FAERS Safety Report 22273822 (Version 2)
Quarter: 2023Q2

REPORT INFORMATION
  Report Type: Spontaneous
  Country: CA (occurrence: CA)
  Receive Date: 20230502
  Receipt Date: 20230531
  Transmission Date: 20230722
  Serious: Yes (Life-Threatening, Hospitalization, Other)
  Sender: FDA-Public Use
  Company Number: ALC2023CA002208

PATIENT
  Age: 77 Year
  Sex: Female

DRUGS (1239)
  1. PHENYLEPHRINE HYDROCHLORIDE [Suspect]
     Active Substance: PHENYLEPHRINE HYDROCHLORIDE
     Indication: Pain
     Dosage: 2 BDF
     Route: 065
  2. PHENYLEPHRINE HYDROCHLORIDE [Suspect]
     Active Substance: PHENYLEPHRINE HYDROCHLORIDE
     Indication: Cerebrovascular accident
  3. ATROPINE [Suspect]
     Active Substance: ATROPINE
     Indication: Coronary artery disease
     Dosage: UNK
     Route: 065
  4. ATROPINE [Suspect]
     Active Substance: ATROPINE
     Indication: Chest pain
     Dosage: UNK 6 MG, QD
     Route: 061
  5. ATROPINE [Suspect]
     Active Substance: ATROPINE
     Indication: Angina pectoris
     Dosage: UNK
     Route: 065
  6. DILTIAZEM HYDROCHLORIDE [Suspect]
     Active Substance: DILTIAZEM HYDROCHLORIDE
     Indication: Coronary artery disease
     Dosage: 15 MG, QD
     Route: 065
  7. DILTIAZEM HYDROCHLORIDE [Suspect]
     Active Substance: DILTIAZEM HYDROCHLORIDE
     Indication: Chest pain
     Dosage: 36 MG, QD
     Route: 065
  8. DILTIAZEM HYDROCHLORIDE [Suspect]
     Active Substance: DILTIAZEM HYDROCHLORIDE
     Indication: Hypertension
     Dosage: 360 MG, QD
     Route: 065
  9. DILTIAZEM HYDROCHLORIDE [Suspect]
     Active Substance: DILTIAZEM HYDROCHLORIDE
     Indication: Angina pectoris
     Dosage: UNK
     Route: 065
  10. DILTIAZEM HYDROCHLORIDE [Suspect]
     Active Substance: DILTIAZEM HYDROCHLORIDE
     Dosage: UNK
     Route: 065
  11. DILTIAZEM HYDROCHLORIDE [Suspect]
     Active Substance: DILTIAZEM HYDROCHLORIDE
     Dosage: 360 MG, QD
     Route: 065
  12. DILTIAZEM HYDROCHLORIDE [Suspect]
     Active Substance: DILTIAZEM HYDROCHLORIDE
     Dosage: 369 MG, QD
     Route: 065
  13. DILTIAZEM HYDROCHLORIDE [Suspect]
     Active Substance: DILTIAZEM HYDROCHLORIDE
     Dosage: UNK
     Route: 065
  14. DILTIAZEM HYDROCHLORIDE [Suspect]
     Active Substance: DILTIAZEM HYDROCHLORIDE
     Dosage: 360 MG, QD
     Route: 065
  15. DILTIAZEM HYDROCHLORIDE [Suspect]
     Active Substance: DILTIAZEM HYDROCHLORIDE
     Dosage: 360 MG, QD
     Route: 065
  16. DILTIAZEM HYDROCHLORIDE [Suspect]
     Active Substance: DILTIAZEM HYDROCHLORIDE
     Dosage: UNK
     Route: 065
  17. DILTIAZEM HYDROCHLORIDE [Suspect]
     Active Substance: DILTIAZEM HYDROCHLORIDE
     Dosage: 360 MG, QD
     Route: 065
  18. DILTIAZEM HYDROCHLORIDE [Suspect]
     Active Substance: DILTIAZEM HYDROCHLORIDE
     Dosage: UNK
     Route: 065
  19. DILTIAZEM HYDROCHLORIDE [Suspect]
     Active Substance: DILTIAZEM HYDROCHLORIDE
     Dosage: 360 MG, QD
     Route: 065
  20. DILTIAZEM HYDROCHLORIDE [Suspect]
     Active Substance: DILTIAZEM HYDROCHLORIDE
     Dosage: UNK
     Route: 065
  21. DILTIAZEM HYDROCHLORIDE [Suspect]
     Active Substance: DILTIAZEM HYDROCHLORIDE
     Dosage: UNK
     Route: 065
  22. DILTIAZEM HYDROCHLORIDE [Suspect]
     Active Substance: DILTIAZEM HYDROCHLORIDE
     Dosage: 15 MG, QD
     Route: 065
  23. DILTIAZEM HYDROCHLORIDE [Suspect]
     Active Substance: DILTIAZEM HYDROCHLORIDE
     Dosage: 36 MG, QD
     Route: 065
  24. DILTIAZEM HYDROCHLORIDE [Suspect]
     Active Substance: DILTIAZEM HYDROCHLORIDE
     Dosage: UNK
     Route: 065
  25. DILTIAZEM HYDROCHLORIDE [Suspect]
     Active Substance: DILTIAZEM HYDROCHLORIDE
     Dosage: 360 MG, QD
     Route: 065
  26. DILTIAZEM HYDROCHLORIDE [Suspect]
     Active Substance: DILTIAZEM HYDROCHLORIDE
     Dosage: UNK
     Route: 065
  27. DILTIAZEM HYDROCHLORIDE [Suspect]
     Active Substance: DILTIAZEM HYDROCHLORIDE
     Dosage: 360 MG, QD (1 EVERY 1 DAY)
     Route: 065
  28. DILTIAZEM HYDROCHLORIDE [Suspect]
     Active Substance: DILTIAZEM HYDROCHLORIDE
     Dosage: 360 MG, QD (1 EVERY 1 DAY)
     Route: 065
  29. DILTIAZEM HYDROCHLORIDE [Suspect]
     Active Substance: DILTIAZEM HYDROCHLORIDE
     Dosage: 360 MG, QD (1 EVERY 1 DAY)
     Route: 065
  30. DILTIAZEM HYDROCHLORIDE [Suspect]
     Active Substance: DILTIAZEM HYDROCHLORIDE
     Dosage: UNK
     Route: 065
  31. DILTIAZEM HYDROCHLORIDE [Suspect]
     Active Substance: DILTIAZEM HYDROCHLORIDE
     Dosage: UNK
     Route: 065
  32. DILTIAZEM HYDROCHLORIDE [Suspect]
     Active Substance: DILTIAZEM HYDROCHLORIDE
     Dosage: UNK
     Route: 065
  33. DILTIAZEM HYDROCHLORIDE [Suspect]
     Active Substance: DILTIAZEM HYDROCHLORIDE
     Dosage: 40 MG, Q12H
     Route: 065
  34. DILTIAZEM HYDROCHLORIDE [Suspect]
     Active Substance: DILTIAZEM HYDROCHLORIDE
     Dosage: 360.0 MG, QD
     Route: 042
  35. DILTIAZEM HYDROCHLORIDE [Suspect]
     Active Substance: DILTIAZEM HYDROCHLORIDE
     Dosage: 15 MG, QD
     Route: 065
  36. DILTIAZEM HYDROCHLORIDE [Suspect]
     Active Substance: DILTIAZEM HYDROCHLORIDE
     Dosage: 360.0 MG, QD
     Route: 042
  37. DILTIAZEM HYDROCHLORIDE [Suspect]
     Active Substance: DILTIAZEM HYDROCHLORIDE
     Dosage: UNK
     Route: 042
  38. LEVOTHYROXINE SODIUM [Suspect]
     Active Substance: LEVOTHYROXINE SODIUM
     Indication: Radioactive iodine therapy
     Dosage: 0.09 MG, QD
     Route: 065
  39. LEVOTHYROXINE SODIUM [Suspect]
     Active Substance: LEVOTHYROXINE SODIUM
     Indication: Thyroid disorder
     Dosage: 0.8 MG, QD
     Route: 065
  40. LEVOTHYROXINE SODIUM [Suspect]
     Active Substance: LEVOTHYROXINE SODIUM
     Indication: Constipation
     Dosage: 0.88 MG, QD
     Route: 065
  41. LEVOTHYROXINE SODIUM [Suspect]
     Active Substance: LEVOTHYROXINE SODIUM
     Dosage: UNK
     Route: 065
  42. LEVOTHYROXINE SODIUM [Suspect]
     Active Substance: LEVOTHYROXINE SODIUM
     Dosage: 0.9 MG, QD
     Route: 065
  43. LEVOTHYROXINE SODIUM [Suspect]
     Active Substance: LEVOTHYROXINE SODIUM
     Dosage: 0.88 MG
     Route: 065
  44. LEVOTHYROXINE SODIUM [Suspect]
     Active Substance: LEVOTHYROXINE SODIUM
     Dosage: UNK
     Route: 065
  45. LEVOTHYROXINE SODIUM [Suspect]
     Active Substance: LEVOTHYROXINE SODIUM
     Dosage: 0.8 MG, QD
     Route: 065
  46. LEVOTHYROXINE SODIUM [Suspect]
     Active Substance: LEVOTHYROXINE SODIUM
     Dosage: 0.088 MG, QD
     Route: 065
  47. LEVOTHYROXINE SODIUM [Suspect]
     Active Substance: LEVOTHYROXINE SODIUM
     Dosage: 622 MG, BID
     Route: 065
  48. LEVOTHYROXINE SODIUM [Suspect]
     Active Substance: LEVOTHYROXINE SODIUM
     Dosage: UNK
     Route: 065
  49. LEVOTHYROXINE SODIUM [Suspect]
     Active Substance: LEVOTHYROXINE SODIUM
     Dosage: UNK
     Route: 048
  50. LEVOTHYROXINE SODIUM [Suspect]
     Active Substance: LEVOTHYROXINE SODIUM
     Dosage: 0.09 MG
     Route: 065
  51. LEVOTHYROXINE SODIUM [Suspect]
     Active Substance: LEVOTHYROXINE SODIUM
     Dosage: UNK
     Route: 048
  52. LEVOTHYROXINE SODIUM [Suspect]
     Active Substance: LEVOTHYROXINE SODIUM
     Dosage: 88 MG, QD
     Route: 065
  53. LEVOTHYROXINE SODIUM [Suspect]
     Active Substance: LEVOTHYROXINE SODIUM
     Dosage: 0.088 MG, QD
     Route: 065
  54. LEVOTHYROXINE SODIUM [Suspect]
     Active Substance: LEVOTHYROXINE SODIUM
     Dosage: 88 MG, QD
     Route: 065
  55. LEVOTHYROXINE SODIUM [Suspect]
     Active Substance: LEVOTHYROXINE SODIUM
     Dosage: 250 MG, BID
     Route: 065
  56. LEVOTHYROXINE SODIUM [Suspect]
     Active Substance: LEVOTHYROXINE SODIUM
     Dosage: 622 MG, BID
     Route: 065
  57. LEVOTHYROXINE SODIUM [Suspect]
     Active Substance: LEVOTHYROXINE SODIUM
     Dosage: 250 MG
     Route: 065
  58. LEVOTHYROXINE SODIUM [Suspect]
     Active Substance: LEVOTHYROXINE SODIUM
     Dosage: 250 MG, QD
     Route: 065
  59. LEVOTHYROXINE SODIUM [Suspect]
     Active Substance: LEVOTHYROXINE SODIUM
     Dosage: 0.9 MG, QD
     Route: 065
  60. LEVOTHYROXINE SODIUM [Suspect]
     Active Substance: LEVOTHYROXINE SODIUM
     Dosage: 0.9 MG, QD
     Route: 065
  61. GLUCOSAMINE [Suspect]
     Active Substance: GLUCOSAMINE
     Indication: Pain
     Dosage: 500 MG (ONCE EVERY 5 DAY)
     Route: 065
  62. GLUCOSAMINE [Suspect]
     Active Substance: GLUCOSAMINE
     Indication: Arthritis
     Dosage: 500 MG, Q12H
     Route: 065
  63. GLUCOSAMINE [Suspect]
     Active Substance: GLUCOSAMINE
     Dosage: 500 MG, QH
     Route: 065
  64. GLUCOSAMINE [Suspect]
     Active Substance: GLUCOSAMINE
     Dosage: UNK
     Route: 065
  65. GLUCOSAMINE [Suspect]
     Active Substance: GLUCOSAMINE
     Dosage: 500 MG, QD (CAPSULE)
     Route: 065
  66. GLUCOSAMINE [Suspect]
     Active Substance: GLUCOSAMINE
     Dosage: 100 MG, QD
     Route: 065
  67. GLUCOSAMINE [Suspect]
     Active Substance: GLUCOSAMINE
     Dosage: 2500 MG, QD
     Route: 065
  68. GLUCOSAMINE [Suspect]
     Active Substance: GLUCOSAMINE
     Dosage: 500 MG
     Route: 065
  69. GLUCOSAMINE [Suspect]
     Active Substance: GLUCOSAMINE
     Dosage: 500 MG
     Route: 065
  70. GLUCOSAMINE [Suspect]
     Active Substance: GLUCOSAMINE
     Dosage: 250 MG
     Route: 065
  71. GLUCOSAMINE [Suspect]
     Active Substance: GLUCOSAMINE
     Dosage: UNK
     Route: 065
  72. GLUCOSAMINE [Suspect]
     Active Substance: GLUCOSAMINE
     Dosage: UNK
     Route: 065
  73. GLUCOSAMINE [Suspect]
     Active Substance: GLUCOSAMINE
     Dosage: 500 MG, BID
     Route: 065
  74. GLUCOSAMINE [Suspect]
     Active Substance: GLUCOSAMINE
     Dosage: 500 MG, BID
     Route: 065
  75. GLUCOSAMINE [Suspect]
     Active Substance: GLUCOSAMINE
     Dosage: 500 MG, BID
     Route: 065
  76. GLUCOSAMINE [Suspect]
     Active Substance: GLUCOSAMINE
     Dosage: 1000 MG, QD
     Route: 065
  77. GLUCOSAMINE [Suspect]
     Active Substance: GLUCOSAMINE
     Dosage: 500 MG
     Route: 065
  78. GLUCOSAMINE [Suspect]
     Active Substance: GLUCOSAMINE
     Dosage: 500 MG
     Route: 065
  79. GLUCOSAMINE [Suspect]
     Active Substance: GLUCOSAMINE
     Dosage: 500 MG, QH
     Route: 065
  80. GLUCOSAMINE [Suspect]
     Active Substance: GLUCOSAMINE
     Dosage: 500 MG, QH
     Route: 065
  81. GLUCOSAMINE [Suspect]
     Active Substance: GLUCOSAMINE
     Dosage: 1000 MG, QD
     Route: 065
  82. GLUCOSAMINE [Suspect]
     Active Substance: GLUCOSAMINE
     Dosage: 1000 MG, QD
     Route: 065
  83. GLUCOSAMINE [Suspect]
     Active Substance: GLUCOSAMINE
     Dosage: UNK
     Route: 065
  84. GLUCOSAMINE [Suspect]
     Active Substance: GLUCOSAMINE
     Dosage: UNK
     Route: 065
  85. GLUCOSAMINE [Suspect]
     Active Substance: GLUCOSAMINE
     Dosage: 500 MG, Q12H
     Route: 065
  86. GLUCOSAMINE [Suspect]
     Active Substance: GLUCOSAMINE
     Dosage: 500 MG, Q12H
     Route: 065
  87. AMITRIPTYLINE HYDROCHLORIDE [Suspect]
     Active Substance: AMITRIPTYLINE HYDROCHLORIDE
     Indication: Angina pectoris
     Dosage: 50 MG, QD
     Route: 065
  88. AMITRIPTYLINE HYDROCHLORIDE [Suspect]
     Active Substance: AMITRIPTYLINE HYDROCHLORIDE
     Indication: Hypertension
     Dosage: 50 MG, QD
     Route: 065
  89. AMITRIPTYLINE HYDROCHLORIDE [Suspect]
     Active Substance: AMITRIPTYLINE HYDROCHLORIDE
     Indication: Arthritis
     Dosage: 75 MG, QD
     Route: 065
  90. AMITRIPTYLINE HYDROCHLORIDE [Suspect]
     Active Substance: AMITRIPTYLINE HYDROCHLORIDE
     Indication: Constipation
     Dosage: UNK
     Route: 065
  91. AMITRIPTYLINE HYDROCHLORIDE [Suspect]
     Active Substance: AMITRIPTYLINE HYDROCHLORIDE
     Indication: Radioactive iodine therapy
     Dosage: UNK
     Route: 065
  92. AMITRIPTYLINE HYDROCHLORIDE [Suspect]
     Active Substance: AMITRIPTYLINE HYDROCHLORIDE
     Indication: Fibromyalgia
     Dosage: UNK
     Route: 065
  93. AMITRIPTYLINE HYDROCHLORIDE [Suspect]
     Active Substance: AMITRIPTYLINE HYDROCHLORIDE
     Indication: Coronary artery disease
     Dosage: UNK
     Route: 065
  94. AMITRIPTYLINE HYDROCHLORIDE [Suspect]
     Active Substance: AMITRIPTYLINE HYDROCHLORIDE
     Indication: Dementia
     Dosage: UNK
     Route: 048
  95. AMITRIPTYLINE HYDROCHLORIDE [Suspect]
     Active Substance: AMITRIPTYLINE HYDROCHLORIDE
     Indication: Duodenal ulcer
     Dosage: UNK
     Route: 065
  96. AMITRIPTYLINE HYDROCHLORIDE [Suspect]
     Active Substance: AMITRIPTYLINE HYDROCHLORIDE
     Indication: Prophylaxis
     Dosage: UNK
     Route: 065
  97. AMITRIPTYLINE HYDROCHLORIDE [Suspect]
     Active Substance: AMITRIPTYLINE HYDROCHLORIDE
     Indication: Insomnia
     Dosage: UNK
     Route: 065
  98. AMITRIPTYLINE HYDROCHLORIDE [Suspect]
     Active Substance: AMITRIPTYLINE HYDROCHLORIDE
     Indication: Thyroid disorder
     Dosage: UNK
     Route: 065
  99. AMITRIPTYLINE HYDROCHLORIDE [Suspect]
     Active Substance: AMITRIPTYLINE HYDROCHLORIDE
     Indication: Oedema
     Dosage: UNK
     Route: 065
  100. AMITRIPTYLINE HYDROCHLORIDE [Suspect]
     Active Substance: AMITRIPTYLINE HYDROCHLORIDE
     Indication: Chest pain
     Dosage: UNK
     Route: 048
  101. AMITRIPTYLINE HYDROCHLORIDE [Suspect]
     Active Substance: AMITRIPTYLINE HYDROCHLORIDE
     Indication: Pain
     Dosage: 25 MG, QD
     Route: 065
  102. AMITRIPTYLINE HYDROCHLORIDE [Suspect]
     Active Substance: AMITRIPTYLINE HYDROCHLORIDE
     Indication: Small intestine carcinoma
     Dosage: 75 MG, QD
     Route: 065
  103. AMITRIPTYLINE HYDROCHLORIDE [Suspect]
     Active Substance: AMITRIPTYLINE HYDROCHLORIDE
     Dosage: 75 MG, QD
     Route: 065
  104. AMITRIPTYLINE HYDROCHLORIDE [Suspect]
     Active Substance: AMITRIPTYLINE HYDROCHLORIDE
     Dosage: 50 MG, QD
     Route: 065
  105. AMITRIPTYLINE HYDROCHLORIDE [Suspect]
     Active Substance: AMITRIPTYLINE HYDROCHLORIDE
     Dosage: 50 MG
     Route: 065
  106. AMITRIPTYLINE HYDROCHLORIDE [Suspect]
     Active Substance: AMITRIPTYLINE HYDROCHLORIDE
     Dosage: 75 MG, QD
     Route: 065
  107. AMITRIPTYLINE HYDROCHLORIDE [Suspect]
     Active Substance: AMITRIPTYLINE HYDROCHLORIDE
     Dosage: 50 MG, QD
     Route: 065
  108. AMITRIPTYLINE HYDROCHLORIDE [Suspect]
     Active Substance: AMITRIPTYLINE HYDROCHLORIDE
     Dosage: 50 MG, QD
     Route: 065
  109. AMITRIPTYLINE HYDROCHLORIDE [Suspect]
     Active Substance: AMITRIPTYLINE HYDROCHLORIDE
     Dosage: 75 MG, QD
     Route: 065
  110. AMITRIPTYLINE HYDROCHLORIDE [Suspect]
     Active Substance: AMITRIPTYLINE HYDROCHLORIDE
     Dosage: 50 MG, QD
     Route: 065
  111. AMITRIPTYLINE HYDROCHLORIDE [Suspect]
     Active Substance: AMITRIPTYLINE HYDROCHLORIDE
     Dosage: 75 MG, QD
     Route: 065
  112. AMITRIPTYLINE HYDROCHLORIDE [Suspect]
     Active Substance: AMITRIPTYLINE HYDROCHLORIDE
     Dosage: 75 MG
     Route: 065
  113. AMITRIPTYLINE HYDROCHLORIDE [Suspect]
     Active Substance: AMITRIPTYLINE HYDROCHLORIDE
     Dosage: 50 MG, QD
     Route: 065
  114. AMITRIPTYLINE HYDROCHLORIDE [Suspect]
     Active Substance: AMITRIPTYLINE HYDROCHLORIDE
     Dosage: 75 MG, QD
     Route: 065
  115. AMITRIPTYLINE HYDROCHLORIDE [Suspect]
     Active Substance: AMITRIPTYLINE HYDROCHLORIDE
     Dosage: 75 MG, QD
     Route: 065
  116. AMITRIPTYLINE HYDROCHLORIDE [Suspect]
     Active Substance: AMITRIPTYLINE HYDROCHLORIDE
     Dosage: 75 MG, QD
     Route: 065
  117. PAPAVERINE [Suspect]
     Active Substance: PAPAVERINE
     Indication: Coronary artery disease
     Dosage: 6 MG, QD
     Route: 061
  118. PAPAVERINE [Suspect]
     Active Substance: PAPAVERINE
     Indication: Chest pain
     Dosage: UNK
     Route: 065
  119. PAPAVERINE [Suspect]
     Active Substance: PAPAVERINE
     Indication: Angina pectoris
  120. OXAZEPAM [Suspect]
     Active Substance: OXAZEPAM
     Indication: Insomnia
     Dosage: 15 MG, QD
     Route: 048
  121. OXAZEPAM [Suspect]
     Active Substance: OXAZEPAM
     Indication: Hypertension
     Dosage: 40 MG, QD
     Route: 065
  122. OXAZEPAM [Suspect]
     Active Substance: OXAZEPAM
     Indication: Coronary artery disease
     Dosage: 20 MG, QD
     Route: 065
  123. OXAZEPAM [Suspect]
     Active Substance: OXAZEPAM
     Indication: Cerebrovascular accident
     Dosage: UNK
     Route: 065
  124. OXAZEPAM [Suspect]
     Active Substance: OXAZEPAM
     Indication: Angina pectoris
     Dosage: 15 MG, QD
     Route: 065
  125. OXAZEPAM [Suspect]
     Active Substance: OXAZEPAM
     Indication: Cerebrovascular accident
     Dosage: 40 MG, QD
     Route: 048
  126. OXAZEPAM [Suspect]
     Active Substance: OXAZEPAM
     Dosage: 15 MG, QD
     Route: 065
  127. OXAZEPAM [Suspect]
     Active Substance: OXAZEPAM
     Dosage: 15 MG, QD
     Route: 065
  128. OXAZEPAM [Suspect]
     Active Substance: OXAZEPAM
     Dosage: UNK
     Route: 065
  129. OXAZEPAM [Suspect]
     Active Substance: OXAZEPAM
     Dosage: 40 MG, QD
     Route: 048
  130. OXAZEPAM [Suspect]
     Active Substance: OXAZEPAM
     Dosage: 40 MG, QD
     Route: 048
  131. OXAZEPAM [Suspect]
     Active Substance: OXAZEPAM
     Dosage: UNK
     Route: 065
  132. OXAZEPAM [Suspect]
     Active Substance: OXAZEPAM
     Dosage: 20 MG, QD
     Route: 048
  133. OXAZEPAM [Suspect]
     Active Substance: OXAZEPAM
     Dosage: 20 MG, QD
     Route: 048
  134. OXAZEPAM [Suspect]
     Active Substance: OXAZEPAM
     Dosage: UNK
     Route: 065
  135. OXAZEPAM [Suspect]
     Active Substance: OXAZEPAM
     Dosage: UNK
     Route: 065
  136. OXAZEPAM [Suspect]
     Active Substance: OXAZEPAM
     Dosage: UNK
     Route: 048
  137. OXAZEPAM [Suspect]
     Active Substance: OXAZEPAM
     Dosage: UNK
     Route: 048
  138. OXAZEPAM [Suspect]
     Active Substance: OXAZEPAM
     Dosage: 15 MG, QD
     Route: 065
  139. OXAZEPAM [Suspect]
     Active Substance: OXAZEPAM
     Dosage: 15 MG, QD
     Route: 065
  140. OXAZEPAM [Suspect]
     Active Substance: OXAZEPAM
     Dosage: 15 MG, QD
     Route: 065
  141. MORPHINE SULFATE [Suspect]
     Active Substance: MORPHINE SULFATE
     Indication: Fibromyalgia
     Dosage: 10 MILLIGRAM, QD
     Route: 030
  142. MORPHINE SULFATE [Suspect]
     Active Substance: MORPHINE SULFATE
     Indication: Chest pain
     Dosage: 10 MILLIGRAM QD
     Route: 065
  143. MORPHINE SULFATE [Suspect]
     Active Substance: MORPHINE SULFATE
     Indication: Pain
     Dosage: 100 MILLIGRAM QD
     Route: 065
  144. MORPHINE SULFATE [Suspect]
     Active Substance: MORPHINE SULFATE
     Dosage: 20 MILLIGRAM, QD
     Route: 030
  145. MORPHINE SULFATE [Suspect]
     Active Substance: MORPHINE SULFATE
     Dosage: 2 DOSAGE FORM, QD
     Route: 065
  146. MORPHINE SULFATE [Suspect]
     Active Substance: MORPHINE SULFATE
     Dosage: UNK, QD
     Route: 065
  147. MORPHINE SULFATE [Suspect]
     Active Substance: MORPHINE SULFATE
     Dosage: 1 DOSAGE FORM, QD
     Route: 065
  148. MORPHINE SULFATE [Suspect]
     Active Substance: MORPHINE SULFATE
     Dosage: 1 DOSAGE FORM, BID
     Route: 065
  149. MORPHINE SULFATE [Suspect]
     Active Substance: MORPHINE SULFATE
     Dosage: 10 MILLIGRAM, QD
     Route: 048
  150. ERGOCALCIFEROL [Suspect]
     Active Substance: ERGOCALCIFEROL
     Indication: Product used for unknown indication
     Route: 065
  151. DIAZEPAM [Suspect]
     Active Substance: DIAZEPAM
     Indication: Insomnia
     Route: 065
  152. DIAZEPAM [Suspect]
     Active Substance: DIAZEPAM
     Indication: Angina pectoris
     Route: 065
  153. DIAZEPAM [Suspect]
     Active Substance: DIAZEPAM
     Indication: Coronary artery disease
     Route: 065
  154. DIAZEPAM [Suspect]
     Active Substance: DIAZEPAM
     Dosage: 75 MG, QD
     Route: 065
  155. DIAZEPAM [Suspect]
     Active Substance: DIAZEPAM
     Dosage: 2 BDF
     Route: 065
  156. PHENOBARBITAL [Suspect]
     Active Substance: PHENOBARBITAL
     Indication: Coronary artery disease
     Dosage: 6 MG, QD
     Route: 061
  157. PHENOBARBITAL [Suspect]
     Active Substance: PHENOBARBITAL
     Indication: Chest pain
     Dosage: UNK
     Route: 065
  158. PHENOBARBITAL [Suspect]
     Active Substance: PHENOBARBITAL
     Indication: Angina pectoris
     Dosage: UNK
     Route: 065
  159. OMEPRAZOLE [Suspect]
     Active Substance: OMEPRAZOLE
     Indication: Duodenal ulcer
     Dosage: 20 MG, QD
     Route: 048
  160. OMEPRAZOLE [Suspect]
     Active Substance: OMEPRAZOLE
     Indication: Small intestine carcinoma
     Dosage: 20 MG, QD
     Route: 048
  161. OMEPRAZOLE [Suspect]
     Active Substance: OMEPRAZOLE
     Indication: Hypertension
     Dosage: 20 MG, QD
     Route: 065
  162. OMEPRAZOLE [Suspect]
     Active Substance: OMEPRAZOLE
     Indication: Coronary artery disease
     Dosage: 20 MG, Q12H
     Route: 048
  163. OMEPRAZOLE [Suspect]
     Active Substance: OMEPRAZOLE
     Indication: Angina pectoris
     Dosage: 20 MG, QD
     Route: 048
  164. OMEPRAZOLE [Suspect]
     Active Substance: OMEPRAZOLE
     Indication: Chest pain
     Dosage: 20 MG, QD
     Route: 048
  165. OMEPRAZOLE [Suspect]
     Active Substance: OMEPRAZOLE
     Dosage: UNK
     Route: 048
  166. OMEPRAZOLE [Suspect]
     Active Substance: OMEPRAZOLE
     Dosage: UNK
     Route: 065
  167. OXCARBAZEPINE [Suspect]
     Active Substance: OXCARBAZEPINE
     Indication: Product used for unknown indication
     Route: 065
  168. OXCARBAZEPINE [Suspect]
     Active Substance: OXCARBAZEPINE
     Dosage: UNK
     Route: 065
  169. FUROSEMIDE [Suspect]
     Active Substance: FUROSEMIDE
     Indication: Oedema
     Dosage: 40 MG, QD
     Route: 061
  170. FUROSEMIDE [Suspect]
     Active Substance: FUROSEMIDE
     Indication: Coronary artery disease
     Dosage: 4 MG, QD
     Route: 065
  171. FUROSEMIDE [Suspect]
     Active Substance: FUROSEMIDE
     Indication: Chest pain
     Dosage: 40 MG, QD
     Route: 065
  172. FUROSEMIDE [Suspect]
     Active Substance: FUROSEMIDE
     Indication: Angina pectoris
     Dosage: 40 MG, QD
     Route: 065
  173. FUROSEMIDE [Suspect]
     Active Substance: FUROSEMIDE
     Dosage: 4 MG, QD
     Route: 065
  174. FUROSEMIDE [Suspect]
     Active Substance: FUROSEMIDE
     Dosage: 40 MG, QD
     Route: 065
  175. FUROSEMIDE [Suspect]
     Active Substance: FUROSEMIDE
     Dosage: 4 MG, QD
     Route: 065
  176. FUROSEMIDE [Suspect]
     Active Substance: FUROSEMIDE
     Dosage: 40 MG, QD
     Route: 065
  177. FUROSEMIDE [Suspect]
     Active Substance: FUROSEMIDE
     Dosage: 10 MG, QD
     Route: 061
  178. FUROSEMIDE [Suspect]
     Active Substance: FUROSEMIDE
     Dosage: UNK
     Route: 065
  179. FUROSEMIDE [Suspect]
     Active Substance: FUROSEMIDE
     Dosage: UNK
     Route: 065
  180. FUROSEMIDE [Suspect]
     Active Substance: FUROSEMIDE
     Dosage: 20 MG, QD
     Route: 065
  181. FUROSEMIDE [Suspect]
     Active Substance: FUROSEMIDE
     Dosage: UNK
     Route: 065
  182. FUROSEMIDE [Suspect]
     Active Substance: FUROSEMIDE
     Dosage: 40 MG, QD
     Route: 065
  183. FUROSEMIDE [Suspect]
     Active Substance: FUROSEMIDE
     Dosage: 40 MG, QD
     Route: 065
  184. FUROSEMIDE [Suspect]
     Active Substance: FUROSEMIDE
     Dosage: 40 MG, QD
     Route: 065
  185. FUROSEMIDE [Suspect]
     Active Substance: FUROSEMIDE
     Dosage: 40 MG, QD
     Route: 065
  186. FUROSEMIDE [Suspect]
     Active Substance: FUROSEMIDE
     Dosage: 40 MG, QD
     Route: 065
  187. FUROSEMIDE [Suspect]
     Active Substance: FUROSEMIDE
     Dosage: 40 MG, QD
     Route: 065
  188. FUROSEMIDE [Suspect]
     Active Substance: FUROSEMIDE
     Dosage: 40 MG, QD
     Route: 065
  189. FUROSEMIDE [Suspect]
     Active Substance: FUROSEMIDE
     Dosage: 40 MG, QD
     Route: 065
  190. FUROSEMIDE [Suspect]
     Active Substance: FUROSEMIDE
     Dosage: 40 MG, QD
     Route: 065
  191. FUROSEMIDE [Suspect]
     Active Substance: FUROSEMIDE
     Dosage: 40 MG, QD
     Route: 065
  192. FUROSEMIDE [Suspect]
     Active Substance: FUROSEMIDE
     Dosage: 40 MG, QD
     Route: 065
  193. FUROSEMIDE [Suspect]
     Active Substance: FUROSEMIDE
     Dosage: UNK
     Route: 065
  194. FUROSEMIDE [Suspect]
     Active Substance: FUROSEMIDE
     Dosage: UNK
     Route: 065
  195. FUROSEMIDE [Suspect]
     Active Substance: FUROSEMIDE
     Dosage: UNK
     Route: 065
  196. FUROSEMIDE [Suspect]
     Active Substance: FUROSEMIDE
     Dosage: UNK
     Route: 065
  197. FUROSEMIDE [Suspect]
     Active Substance: FUROSEMIDE
     Dosage: 40 MG, QD
     Route: 065
  198. FUROSEMIDE [Suspect]
     Active Substance: FUROSEMIDE
     Dosage: 40 MG, QD
     Route: 065
  199. AMLODIPINE BESYLATE [Suspect]
     Active Substance: AMLODIPINE BESYLATE
     Indication: Constipation
     Dosage: UNK
     Route: 065
  200. AMLODIPINE BESYLATE [Suspect]
     Active Substance: AMLODIPINE BESYLATE
     Indication: Coronary artery disease
     Dosage: 5 MG, QD
     Route: 065
  201. AMLODIPINE BESYLATE [Suspect]
     Active Substance: AMLODIPINE BESYLATE
     Indication: Angina pectoris
     Dosage: UNK
     Route: 065
  202. AMLODIPINE BESYLATE [Suspect]
     Active Substance: AMLODIPINE BESYLATE
     Indication: Hypertension
     Dosage: UNK
     Route: 065
  203. AMLODIPINE BESYLATE [Suspect]
     Active Substance: AMLODIPINE BESYLATE
     Indication: Chest pain
     Dosage: 5 MG, QD
     Route: 065
  204. AMLODIPINE BESYLATE [Suspect]
     Active Substance: AMLODIPINE BESYLATE
     Dosage: 5 MG
     Route: 065
  205. AMLODIPINE BESYLATE [Suspect]
     Active Substance: AMLODIPINE BESYLATE
     Dosage: 5 MG, QD
     Route: 065
  206. AMLODIPINE BESYLATE [Suspect]
     Active Substance: AMLODIPINE BESYLATE
     Dosage: 5 MG, QD
     Route: 065
  207. AMLODIPINE BESYLATE [Suspect]
     Active Substance: AMLODIPINE BESYLATE
     Dosage: UNK
     Route: 065
  208. AMLODIPINE BESYLATE [Suspect]
     Active Substance: AMLODIPINE BESYLATE
     Dosage: 5 MG, QD
     Route: 065
  209. AMLODIPINE BESYLATE [Suspect]
     Active Substance: AMLODIPINE BESYLATE
     Dosage: UNK
     Route: 065
  210. AMLODIPINE BESYLATE [Suspect]
     Active Substance: AMLODIPINE BESYLATE
     Dosage: UNK
     Route: 065
  211. AMLODIPINE BESYLATE [Suspect]
     Active Substance: AMLODIPINE BESYLATE
     Dosage: UNK
     Route: 065
  212. AMLODIPINE BESYLATE [Suspect]
     Active Substance: AMLODIPINE BESYLATE
     Dosage: UNK
     Route: 065
  213. AMLODIPINE BESYLATE [Suspect]
     Active Substance: AMLODIPINE BESYLATE
     Dosage: 5 MG, QD
     Route: 065
  214. AMLODIPINE BESYLATE [Suspect]
     Active Substance: AMLODIPINE BESYLATE
     Dosage: 5 MG
     Route: 065
  215. AMLODIPINE BESYLATE [Suspect]
     Active Substance: AMLODIPINE BESYLATE
     Dosage: UNK
     Route: 065
  216. AMLODIPINE BESYLATE [Suspect]
     Active Substance: AMLODIPINE BESYLATE
     Dosage: 5 MG, QD
     Route: 065
  217. AMLODIPINE BESYLATE [Suspect]
     Active Substance: AMLODIPINE BESYLATE
     Dosage: UNK
     Route: 065
  218. AMLODIPINE BESYLATE [Suspect]
     Active Substance: AMLODIPINE BESYLATE
     Dosage: 5 MG, QD
     Route: 065
  219. AMLODIPINE BESYLATE [Suspect]
     Active Substance: AMLODIPINE BESYLATE
     Dosage: 5 MG, QD
     Route: 065
  220. AMLODIPINE BESYLATE [Suspect]
     Active Substance: AMLODIPINE BESYLATE
     Dosage: 5 MG, QD
     Route: 065
  221. AMLODIPINE BESYLATE [Suspect]
     Active Substance: AMLODIPINE BESYLATE
     Dosage: 5 MG, QD
     Route: 065
  222. AMLODIPINE BESYLATE [Suspect]
     Active Substance: AMLODIPINE BESYLATE
     Dosage: 5 MG, QD
     Route: 065
  223. AMLODIPINE BESYLATE [Suspect]
     Active Substance: AMLODIPINE BESYLATE
     Dosage: 5 MG, QD
     Route: 065
  224. AMLODIPINE BESYLATE [Suspect]
     Active Substance: AMLODIPINE BESYLATE
     Dosage: UNK
     Route: 065
  225. AMLODIPINE BESYLATE [Suspect]
     Active Substance: AMLODIPINE BESYLATE
     Dosage: UNK
     Route: 065
  226. AMLODIPINE BESYLATE [Suspect]
     Active Substance: AMLODIPINE BESYLATE
     Dosage: UNK
     Route: 065
  227. AMLODIPINE BESYLATE [Suspect]
     Active Substance: AMLODIPINE BESYLATE
     Dosage: UNK
     Route: 065
  228. AMLODIPINE BESYLATE [Suspect]
     Active Substance: AMLODIPINE BESYLATE
     Dosage: UNK
     Route: 065
  229. AMLODIPINE BESYLATE [Suspect]
     Active Substance: AMLODIPINE BESYLATE
     Dosage: 5 MG, QD
     Route: 065
  230. AMLODIPINE BESYLATE [Suspect]
     Active Substance: AMLODIPINE BESYLATE
     Dosage: 5 MG, QD
     Route: 065
  231. AMLODIPINE BESYLATE [Suspect]
     Active Substance: AMLODIPINE BESYLATE
     Dosage: 5 MG, QD
     Route: 065
  232. AMLODIPINE BESYLATE [Suspect]
     Active Substance: AMLODIPINE BESYLATE
     Dosage: 5 MG, QD
     Route: 065
  233. AMLODIPINE BESYLATE [Suspect]
     Active Substance: AMLODIPINE BESYLATE
     Dosage: 5 MG, QD
     Route: 065
  234. AMLODIPINE BESYLATE [Suspect]
     Active Substance: AMLODIPINE BESYLATE
     Dosage: 5 MG, QD
     Route: 065
  235. AMLODIPINE BESYLATE [Suspect]
     Active Substance: AMLODIPINE BESYLATE
     Dosage: 5 MG, QD
     Route: 065
  236. AMLODIPINE BESYLATE [Suspect]
     Active Substance: AMLODIPINE BESYLATE
     Dosage: 5 MG, QD
     Route: 065
  237. AMLODIPINE BESYLATE [Suspect]
     Active Substance: AMLODIPINE BESYLATE
     Dosage: 5 MG, QD
     Route: 065
  238. AMLODIPINE BESYLATE [Suspect]
     Active Substance: AMLODIPINE BESYLATE
     Dosage: 5 MG, QD
     Route: 065
  239. AMLODIPINE BESYLATE [Suspect]
     Active Substance: AMLODIPINE BESYLATE
     Dosage: 5 MG, QD
     Route: 065
  240. AMLODIPINE BESYLATE [Suspect]
     Active Substance: AMLODIPINE BESYLATE
     Dosage: 5 MG, QD
     Route: 065
  241. AMLODIPINE BESYLATE [Suspect]
     Active Substance: AMLODIPINE BESYLATE
     Dosage: UNK
     Route: 065
  242. AMLODIPINE BESYLATE [Suspect]
     Active Substance: AMLODIPINE BESYLATE
     Dosage: UNK
     Route: 065
  243. AMLODIPINE BESYLATE [Suspect]
     Active Substance: AMLODIPINE BESYLATE
     Dosage: 5 MG, QD
     Route: 065
  244. GALANTAMINE HYDROBROMIDE [Suspect]
     Active Substance: GALANTAMINE HYDROBROMIDE
     Indication: Dementia
     Dosage: 16 MG, QD
     Route: 065
  245. GALANTAMINE HYDROBROMIDE [Suspect]
     Active Substance: GALANTAMINE HYDROBROMIDE
     Route: 065
  246. GALANTAMINE HYDROBROMIDE [Suspect]
     Active Substance: GALANTAMINE HYDROBROMIDE
     Dosage: UNK
     Route: 065
  247. GALANTAMINE HYDROBROMIDE [Suspect]
     Active Substance: GALANTAMINE HYDROBROMIDE
     Dosage: 16 MG
     Route: 065
  248. GALANTAMINE HYDROBROMIDE [Suspect]
     Active Substance: GALANTAMINE HYDROBROMIDE
     Dosage: 16 MG, QD
     Route: 065
  249. GALANTAMINE HYDROBROMIDE [Suspect]
     Active Substance: GALANTAMINE HYDROBROMIDE
     Dosage: UNK
     Route: 065
  250. CARBAMAZEPINE [Suspect]
     Active Substance: CARBAMAZEPINE
     Indication: Seizure prophylaxis
     Dosage: 2 DF, QD
     Route: 065
  251. CARBAMAZEPINE [Suspect]
     Active Substance: CARBAMAZEPINE
     Indication: Seizure
     Dosage: 200 MG, Q12H
     Route: 065
  252. CARBAMAZEPINE [Suspect]
     Active Substance: CARBAMAZEPINE
     Indication: Pain
     Dosage: 200 MG, Q48H
     Route: 065
  253. CARBAMAZEPINE [Suspect]
     Active Substance: CARBAMAZEPINE
     Indication: Fibromyalgia
     Dosage: 100 MG, Q12H
     Route: 065
  254. CARBAMAZEPINE [Suspect]
     Active Substance: CARBAMAZEPINE
     Dosage: 2 DF, QD
     Route: 065
  255. CARBAMAZEPINE [Suspect]
     Active Substance: CARBAMAZEPINE
     Dosage: 400 MG, Q12H
     Route: 065
  256. CARBAMAZEPINE [Suspect]
     Active Substance: CARBAMAZEPINE
     Dosage: 100 MG, BID
     Route: 065
  257. CARBAMAZEPINE [Suspect]
     Active Substance: CARBAMAZEPINE
     Dosage: 200 MG, BID
     Route: 065
  258. CARBAMAZEPINE [Suspect]
     Active Substance: CARBAMAZEPINE
     Dosage: 2 DF, Q12H
     Route: 065
  259. CARBAMAZEPINE [Suspect]
     Active Substance: CARBAMAZEPINE
     Dosage: 400 MG, Q12H
     Route: 065
  260. CARBAMAZEPINE [Suspect]
     Active Substance: CARBAMAZEPINE
     Dosage: 200 MG, Q12H
     Route: 065
  261. CARBAMAZEPINE [Suspect]
     Active Substance: CARBAMAZEPINE
     Dosage: 100 MG
     Route: 065
  262. CARBAMAZEPINE [Suspect]
     Active Substance: CARBAMAZEPINE
     Dosage: 2 DF, QD
     Route: 065
  263. CARBAMAZEPINE [Suspect]
     Active Substance: CARBAMAZEPINE
     Dosage: 1 DF, QD
     Route: 065
  264. CARBAMAZEPINE [Suspect]
     Active Substance: CARBAMAZEPINE
     Dosage: 200 MG
     Route: 065
  265. CARBAMAZEPINE [Suspect]
     Active Substance: CARBAMAZEPINE
     Dosage: 1 DF, Q12H
     Route: 065
  266. CARBAMAZEPINE [Suspect]
     Active Substance: CARBAMAZEPINE
     Dosage: 200 MG, Q12H
     Route: 065
  267. CARBAMAZEPINE [Suspect]
     Active Substance: CARBAMAZEPINE
     Dosage: 100 MG, Q12H
     Route: 065
  268. CARBAMAZEPINE [Suspect]
     Active Substance: CARBAMAZEPINE
     Dosage: UNK
     Route: 065
  269. CARBAMAZEPINE [Suspect]
     Active Substance: CARBAMAZEPINE
     Dosage: UNK
     Route: 065
  270. CARBAMAZEPINE [Suspect]
     Active Substance: CARBAMAZEPINE
     Dosage: 500 MG, QD
     Route: 065
  271. CARBAMAZEPINE [Suspect]
     Active Substance: CARBAMAZEPINE
     Dosage: 200 MG, BID
     Route: 065
  272. CARBAMAZEPINE [Suspect]
     Active Substance: CARBAMAZEPINE
     Dosage: 200 MG, BID
     Route: 065
  273. CARBAMAZEPINE [Suspect]
     Active Substance: CARBAMAZEPINE
     Dosage: 1 DF
     Route: 065
  274. CARBAMAZEPINE [Suspect]
     Active Substance: CARBAMAZEPINE
     Dosage: 200 MG, BID
     Route: 065
  275. CARBAMAZEPINE [Suspect]
     Active Substance: CARBAMAZEPINE
     Dosage: 400 MG, BID
     Route: 065
  276. CARBAMAZEPINE [Suspect]
     Active Substance: CARBAMAZEPINE
     Dosage: 100 MG, QD
     Route: 065
  277. CARBAMAZEPINE [Suspect]
     Active Substance: CARBAMAZEPINE
     Dosage: 200 MG
     Route: 065
  278. CARBAMAZEPINE [Suspect]
     Active Substance: CARBAMAZEPINE
     Dosage: UNK
     Route: 065
  279. CARBAMAZEPINE [Suspect]
     Active Substance: CARBAMAZEPINE
     Dosage: 10 MG
     Route: 065
  280. CARBAMAZEPINE [Suspect]
     Active Substance: CARBAMAZEPINE
     Dosage: 200 MG, QD
     Route: 065
  281. CARBAMAZEPINE [Suspect]
     Active Substance: CARBAMAZEPINE
     Dosage: 200 MG, QD
     Route: 065
  282. CARBAMAZEPINE [Suspect]
     Active Substance: CARBAMAZEPINE
     Dosage: 100 MG, Q12H
     Route: 065
  283. CARBAMAZEPINE [Suspect]
     Active Substance: CARBAMAZEPINE
     Dosage: 200 MG, QD
     Route: 065
  284. CARBAMAZEPINE [Suspect]
     Active Substance: CARBAMAZEPINE
     Dosage: 200 MG, Q12H
     Route: 065
  285. CARBAMAZEPINE [Suspect]
     Active Substance: CARBAMAZEPINE
     Dosage: 200 MG, Q12H
     Route: 065
  286. CARBAMAZEPINE [Suspect]
     Active Substance: CARBAMAZEPINE
     Dosage: 200 MG, Q12H
     Route: 065
  287. CARBAMAZEPINE [Suspect]
     Active Substance: CARBAMAZEPINE
     Dosage: 200 MG, Q12H
     Route: 065
  288. CARBAMAZEPINE [Suspect]
     Active Substance: CARBAMAZEPINE
     Dosage: 200 MG, Q12H
     Route: 065
  289. CARBAMAZEPINE [Suspect]
     Active Substance: CARBAMAZEPINE
     Dosage: 2 DF, QD
     Route: 065
  290. CARBAMAZEPINE [Suspect]
     Active Substance: CARBAMAZEPINE
     Dosage: 2 DF, QD
     Route: 065
  291. CARBAMAZEPINE [Suspect]
     Active Substance: CARBAMAZEPINE
     Dosage: 2 DF, QD
     Route: 065
  292. CARBAMAZEPINE [Suspect]
     Active Substance: CARBAMAZEPINE
     Dosage: 2 DF, QD
     Route: 065
  293. CARBAMAZEPINE [Suspect]
     Active Substance: CARBAMAZEPINE
     Dosage: 2 DF, QD
     Route: 065
  294. CARBAMAZEPINE [Suspect]
     Active Substance: CARBAMAZEPINE
     Dosage: 200 MG, Q12H
     Route: 065
  295. AMLODIPINE [Suspect]
     Active Substance: AMLODIPINE BESYLATE
     Indication: Hypertension
     Dosage: 50 MG, QD
     Route: 065
  296. AMLODIPINE [Suspect]
     Active Substance: AMLODIPINE BESYLATE
     Indication: Coronary artery disease
     Dosage: UNK
     Route: 065
  297. AMLODIPINE [Suspect]
     Active Substance: AMLODIPINE BESYLATE
     Indication: Angina pectoris
     Dosage: UNK
     Route: 065
  298. AMLODIPINE [Suspect]
     Active Substance: AMLODIPINE BESYLATE
     Indication: Constipation
     Dosage: 5 MG, QD
     Route: 065
  299. AMLODIPINE [Suspect]
     Active Substance: AMLODIPINE BESYLATE
     Indication: Chest pain
  300. DIPYRIDAMOLE [Suspect]
     Active Substance: DIPYRIDAMOLE
     Indication: Cerebrovascular accident
     Dosage: 2 DF, QD
     Route: 065
  301. DIPYRIDAMOLE [Suspect]
     Active Substance: DIPYRIDAMOLE
     Dosage: 0.5 DF, QD
     Route: 065
  302. DIPYRIDAMOLE [Suspect]
     Active Substance: DIPYRIDAMOLE
     Dosage: 2 DF, QOD
     Route: 065
  303. DIPYRIDAMOLE [Suspect]
     Active Substance: DIPYRIDAMOLE
     Dosage: 1 DF, QD
     Route: 065
  304. DIPYRIDAMOLE [Suspect]
     Active Substance: DIPYRIDAMOLE
     Dosage: 1 DF, Q12H
     Route: 065
  305. DIPYRIDAMOLE [Suspect]
     Active Substance: DIPYRIDAMOLE
     Dosage: 1 DF
     Route: 065
  306. DIPYRIDAMOLE [Suspect]
     Active Substance: DIPYRIDAMOLE
     Dosage: 2 DF, BID
     Route: 065
  307. DIPYRIDAMOLE [Suspect]
     Active Substance: DIPYRIDAMOLE
     Dosage: 1 DF, BID
     Route: 065
  308. DIPYRIDAMOLE [Suspect]
     Active Substance: DIPYRIDAMOLE
     Dosage: UNK, QD
     Route: 065
  309. DIPYRIDAMOLE [Suspect]
     Active Substance: DIPYRIDAMOLE
     Dosage: UNK
     Route: 065
  310. DIPYRIDAMOLE [Suspect]
     Active Substance: DIPYRIDAMOLE
     Dosage: UNK
     Route: 048
  311. DIPYRIDAMOLE [Suspect]
     Active Substance: DIPYRIDAMOLE
     Dosage: 0.5 DF, QD
     Route: 065
  312. DIPYRIDAMOLE [Suspect]
     Active Substance: DIPYRIDAMOLE
     Dosage: 2 DF, QD
     Route: 065
  313. DIPYRIDAMOLE [Suspect]
     Active Substance: DIPYRIDAMOLE
     Dosage: 25 MG
     Route: 065
  314. DIPYRIDAMOLE [Suspect]
     Active Substance: DIPYRIDAMOLE
     Dosage: 200 MG, BID
     Route: 048
  315. DIPYRIDAMOLE [Suspect]
     Active Substance: DIPYRIDAMOLE
     Dosage: 0.5 DF
     Route: 065
  316. DIPYRIDAMOLE [Suspect]
     Active Substance: DIPYRIDAMOLE
     Dosage: 1 DF, BID
     Route: 065
  317. DIPYRIDAMOLE [Suspect]
     Active Substance: DIPYRIDAMOLE
     Dosage: 2 DF, QD
     Route: 065
  318. DIPYRIDAMOLE [Suspect]
     Active Substance: DIPYRIDAMOLE
     Dosage: 2 DF, QD
     Route: 065
  319. ALBUTEROL SULFATE [Suspect]
     Active Substance: ALBUTEROL SULFATE
     Indication: Chest pain
     Dosage: 100 MG, QD
     Route: 065
  320. ALBUTEROL SULFATE [Suspect]
     Active Substance: ALBUTEROL SULFATE
     Indication: Angina pectoris
     Dosage: 400 MG, Q6H
     Route: 065
  321. ALBUTEROL SULFATE [Suspect]
     Active Substance: ALBUTEROL SULFATE
     Indication: Constipation
     Dosage: 100 UG, QD
     Route: 065
  322. ALBUTEROL SULFATE [Suspect]
     Active Substance: ALBUTEROL SULFATE
     Indication: Hypertension
     Dosage: 200 MG, Q6H
     Route: 065
  323. ALBUTEROL SULFATE [Suspect]
     Active Substance: ALBUTEROL SULFATE
     Indication: Coronary artery disease
     Dosage: 200 UG, Q6H
     Route: 065
  324. ALBUTEROL SULFATE [Suspect]
     Active Substance: ALBUTEROL SULFATE
     Dosage: 100 MG, QD
     Route: 065
  325. ALBUTEROL SULFATE [Suspect]
     Active Substance: ALBUTEROL SULFATE
     Dosage: 400 MG, Q6H
     Route: 065
  326. ALBUTEROL SULFATE [Suspect]
     Active Substance: ALBUTEROL SULFATE
     Dosage: UNK
     Route: 065
  327. ALBUTEROL SULFATE [Suspect]
     Active Substance: ALBUTEROL SULFATE
     Dosage: 200 UG, Q6H
     Route: 065
  328. ALBUTEROL SULFATE [Suspect]
     Active Substance: ALBUTEROL SULFATE
     Dosage: 200 UG, Q6H
     Route: 065
  329. ALBUTEROL SULFATE [Suspect]
     Active Substance: ALBUTEROL SULFATE
     Dosage: 100 UG, QD
     Route: 065
  330. ALBUTEROL SULFATE [Suspect]
     Active Substance: ALBUTEROL SULFATE
     Dosage: UNK
     Route: 065
  331. ALBUTEROL SULFATE [Suspect]
     Active Substance: ALBUTEROL SULFATE
     Dosage: 200 UG, QID
     Route: 065
  332. ALBUTEROL SULFATE [Suspect]
     Active Substance: ALBUTEROL SULFATE
     Dosage: 400 MG, QID
     Route: 065
  333. ALBUTEROL SULFATE [Suspect]
     Active Substance: ALBUTEROL SULFATE
     Dosage: 100 MG, QD
     Route: 065
  334. ALBUTEROL SULFATE [Suspect]
     Active Substance: ALBUTEROL SULFATE
     Dosage: 400 MG, QID
     Route: 065
  335. ALBUTEROL SULFATE [Suspect]
     Active Substance: ALBUTEROL SULFATE
     Dosage: 200 MG, QID
     Route: 065
  336. LEVOFLOXACIN [Suspect]
     Active Substance: LEVOFLOXACIN
     Indication: Urinary tract infection
     Dosage: 250 MG, QD
     Route: 065
  337. LEVOFLOXACIN [Suspect]
     Active Substance: LEVOFLOXACIN
     Dosage: 250 MG, Q12H
     Route: 065
  338. LEVOFLOXACIN [Suspect]
     Active Substance: LEVOFLOXACIN
     Dosage: UNK
     Route: 065
  339. LEVOFLOXACIN [Suspect]
     Active Substance: LEVOFLOXACIN
     Dosage: 200 MG, QD
     Route: 065
  340. LEVOFLOXACIN [Suspect]
     Active Substance: LEVOFLOXACIN
     Dosage: 200 MG, QD
     Route: 065
  341. LEVOFLOXACIN [Suspect]
     Active Substance: LEVOFLOXACIN
     Dosage: 250 MG
     Route: 065
  342. LEVOFLOXACIN [Suspect]
     Active Substance: LEVOFLOXACIN
     Dosage: 15 MG
     Route: 065
  343. LEVOFLOXACIN [Suspect]
     Active Substance: LEVOFLOXACIN
     Dosage: UNK
     Route: 065
  344. LEVOFLOXACIN [Suspect]
     Active Substance: LEVOFLOXACIN
     Dosage: 250 MG, Q12H
     Route: 065
  345. LEVOFLOXACIN [Suspect]
     Active Substance: LEVOFLOXACIN
     Dosage: 200 MG, QD
     Route: 065
  346. ROSUVASTATIN [Suspect]
     Active Substance: ROSUVASTATIN
     Indication: Cerebrovascular accident
     Dosage: 20 MG, Q12H
     Route: 048
  347. ROSUVASTATIN [Suspect]
     Active Substance: ROSUVASTATIN
     Indication: Chronic obstructive pulmonary disease
     Dosage: 20 MG, QD
     Route: 065
  348. ROSUVASTATIN [Suspect]
     Active Substance: ROSUVASTATIN
     Indication: Coronary artery disease
     Dosage: 200 MG, Q12H
     Route: 065
  349. ROSUVASTATIN [Suspect]
     Active Substance: ROSUVASTATIN
     Indication: Insomnia
     Dosage: 20 MG, QOD
     Route: 065
  350. ROSUVASTATIN [Suspect]
     Active Substance: ROSUVASTATIN
     Indication: Hypertension
     Dosage: 40 MG, QD
     Route: 048
  351. ROSUVASTATIN [Suspect]
     Active Substance: ROSUVASTATIN
     Indication: Chest pain
     Dosage: 200 MG, BID
     Route: 065
  352. ROSUVASTATIN [Suspect]
     Active Substance: ROSUVASTATIN
     Indication: Angina pectoris
     Dosage: UNK
     Route: 065
  353. ROSUVASTATIN [Suspect]
     Active Substance: ROSUVASTATIN
     Dosage: UNK
     Route: 065
  354. ROSUVASTATIN [Suspect]
     Active Substance: ROSUVASTATIN
     Dosage: UNK
     Route: 065
  355. ROSUVASTATIN [Suspect]
     Active Substance: ROSUVASTATIN
     Dosage: 200 MG, BID
     Route: 048
  356. ROSUVASTATIN [Suspect]
     Active Substance: ROSUVASTATIN
     Dosage: UNK
     Route: 048
  357. ROSUVASTATIN [Suspect]
     Active Substance: ROSUVASTATIN
     Dosage: 20 MG, Q12H
     Route: 048
  358. ROSUVASTATIN [Suspect]
     Active Substance: ROSUVASTATIN
     Dosage: 20 MG, Q12H
     Route: 048
  359. ROSUVASTATIN [Suspect]
     Active Substance: ROSUVASTATIN
     Dosage: 20 MG, Q12H
     Route: 048
  360. ROSUVASTATIN [Suspect]
     Active Substance: ROSUVASTATIN
     Dosage: UNK
     Route: 048
  361. ROSUVASTATIN [Suspect]
     Active Substance: ROSUVASTATIN
     Dosage: UNK
     Route: 048
  362. ROSUVASTATIN [Suspect]
     Active Substance: ROSUVASTATIN
     Dosage: UNK
     Route: 048
  363. ROSUVASTATIN [Suspect]
     Active Substance: ROSUVASTATIN
     Dosage: UNK
     Route: 048
  364. ROSUVASTATIN [Suspect]
     Active Substance: ROSUVASTATIN
     Dosage: UNK
     Route: 048
  365. ROSUVASTATIN [Suspect]
     Active Substance: ROSUVASTATIN
     Dosage: UNK
     Route: 048
  366. ROSUVASTATIN [Suspect]
     Active Substance: ROSUVASTATIN
     Dosage: UNK
     Route: 048
  367. ROSUVASTATIN [Suspect]
     Active Substance: ROSUVASTATIN
     Dosage: UNK
     Route: 048
  368. ROSUVASTATIN [Suspect]
     Active Substance: ROSUVASTATIN
     Dosage: UNK
     Route: 048
  369. ROSUVASTATIN [Suspect]
     Active Substance: ROSUVASTATIN
     Dosage: UNK
     Route: 048
  370. ROSUVASTATIN [Suspect]
     Active Substance: ROSUVASTATIN
     Dosage: UNK
     Route: 048
  371. ROSUVASTATIN [Suspect]
     Active Substance: ROSUVASTATIN
     Dosage: 200 MG, Q8H
     Route: 065
  372. ROSUVASTATIN [Suspect]
     Active Substance: ROSUVASTATIN
     Dosage: 40 MG, QD
     Route: 048
  373. ROSUVASTATIN [Suspect]
     Active Substance: ROSUVASTATIN
     Dosage: 200 MG, Q8H
     Route: 065
  374. ROSUVASTATIN [Suspect]
     Active Substance: ROSUVASTATIN
     Dosage: 20 MG, Q12H
     Route: 048
  375. ROSUVASTATIN [Suspect]
     Active Substance: ROSUVASTATIN
     Dosage: 20 MG, Q12H
     Route: 048
  376. ROSUVASTATIN [Suspect]
     Active Substance: ROSUVASTATIN
     Dosage: 20 MG, QD
     Route: 048
  377. ROSUVASTATIN [Suspect]
     Active Substance: ROSUVASTATIN
     Dosage: UNK
     Route: 048
  378. ROSUVASTATIN [Suspect]
     Active Substance: ROSUVASTATIN
     Dosage: 20 MG, Q12H
     Route: 048
  379. ROSUVASTATIN [Suspect]
     Active Substance: ROSUVASTATIN
     Dosage: 200 MG, Q8H
     Route: 065
  380. ROSUVASTATIN [Suspect]
     Active Substance: ROSUVASTATIN
     Dosage: 40 MG, QD
     Route: 048
  381. ROSUVASTATIN [Suspect]
     Active Substance: ROSUVASTATIN
     Dosage: 20 MG, Q12H
     Route: 048
  382. ROSUVASTATIN [Suspect]
     Active Substance: ROSUVASTATIN
     Dosage: 20 MG, QD
     Route: 048
  383. ROSUVASTATIN [Suspect]
     Active Substance: ROSUVASTATIN
     Dosage: 20 MG, QD
     Route: 048
  384. ROSUVASTATIN [Suspect]
     Active Substance: ROSUVASTATIN
     Dosage: 20 MG, QD
     Route: 048
  385. ROSUVASTATIN [Suspect]
     Active Substance: ROSUVASTATIN
     Dosage: 200 MG, Q8H
     Route: 065
  386. ROSUVASTATIN [Suspect]
     Active Substance: ROSUVASTATIN
     Dosage: 200 MG, Q12H
     Route: 065
  387. ROSUVASTATIN [Suspect]
     Active Substance: ROSUVASTATIN
     Dosage: 200 MG, Q12H
     Route: 065
  388. ROSUVASTATIN [Suspect]
     Active Substance: ROSUVASTATIN
     Dosage: 200 MG, Q12H
     Route: 065
  389. ROSUVASTATIN [Suspect]
     Active Substance: ROSUVASTATIN
     Dosage: 20 MG, Q12H
     Route: 048
  390. ROSUVASTATIN [Suspect]
     Active Substance: ROSUVASTATIN
     Dosage: 40 MG, QD
     Route: 048
  391. ROSUVASTATIN [Suspect]
     Active Substance: ROSUVASTATIN
     Dosage: 200 MG, Q12H
     Route: 065
  392. ROSUVASTATIN [Suspect]
     Active Substance: ROSUVASTATIN
     Dosage: 200 MG, Q12H
     Route: 065
  393. CYCLOBENZAPRINE [Suspect]
     Active Substance: CYCLOBENZAPRINE
     Indication: Seizure prophylaxis
     Dosage: 15 MG, Q8H
     Route: 065
  394. CYCLOBENZAPRINE [Suspect]
     Active Substance: CYCLOBENZAPRINE
     Indication: Fibromyalgia
     Dosage: 100 MG, Q12H
     Route: 065
  395. CYCLOBENZAPRINE [Suspect]
     Active Substance: CYCLOBENZAPRINE
     Indication: Pain
     Dosage: 1.87 MG, QD
     Route: 065
  396. CYCLOBENZAPRINE [Suspect]
     Active Substance: CYCLOBENZAPRINE
     Indication: Seizure
     Dosage: 5 MG, Q8H
     Route: 065
  397. CYCLOBENZAPRINE [Suspect]
     Active Substance: CYCLOBENZAPRINE
     Dosage: 5 MG, Q12H
     Route: 065
  398. CYCLOBENZAPRINE [Suspect]
     Active Substance: CYCLOBENZAPRINE
     Dosage: 200 MG, Q12H
     Route: 065
  399. CYCLOBENZAPRINE [Suspect]
     Active Substance: CYCLOBENZAPRINE
     Dosage: UNK
     Route: 065
  400. CYCLOBENZAPRINE [Suspect]
     Active Substance: CYCLOBENZAPRINE
     Dosage: 200 MG, Q12H
     Route: 065
  401. CYCLOBENZAPRINE [Suspect]
     Active Substance: CYCLOBENZAPRINE
     Dosage: 1.87 MG
     Route: 065
  402. CYCLOBENZAPRINE [Suspect]
     Active Substance: CYCLOBENZAPRINE
     Dosage: 2 MG, QD
     Route: 065
  403. CYCLOBENZAPRINE [Suspect]
     Active Substance: CYCLOBENZAPRINE
     Dosage: 45 MG, QD
     Route: 065
  404. CYCLOBENZAPRINE [Suspect]
     Active Substance: CYCLOBENZAPRINE
     Dosage: UNK
     Route: 065
  405. CYCLOBENZAPRINE [Suspect]
     Active Substance: CYCLOBENZAPRINE
     Dosage: 100 MG, Q12H
     Route: 065
  406. CYCLOBENZAPRINE [Suspect]
     Active Substance: CYCLOBENZAPRINE
     Dosage: 5 MG, Q12H
     Route: 065
  407. CYCLOBENZAPRINE [Suspect]
     Active Substance: CYCLOBENZAPRINE
     Dosage: 1.87 MG, QD
     Route: 065
  408. CYCLOBENZAPRINE [Suspect]
     Active Substance: CYCLOBENZAPRINE
     Dosage: 5 MG, Q8H
     Route: 065
  409. CYCLOBENZAPRINE [Suspect]
     Active Substance: CYCLOBENZAPRINE
     Dosage: 0.63 MG
     Route: 065
  410. CYCLOBENZAPRINE [Suspect]
     Active Substance: CYCLOBENZAPRINE
     Dosage: 5 MG
     Route: 065
  411. CYCLOBENZAPRINE [Suspect]
     Active Substance: CYCLOBENZAPRINE
     Dosage: 5 MG
     Route: 065
  412. CYCLOBENZAPRINE [Suspect]
     Active Substance: CYCLOBENZAPRINE
     Dosage: 5 MG, Q8H
     Route: 065
  413. CYCLOBENZAPRINE [Suspect]
     Active Substance: CYCLOBENZAPRINE
     Dosage: 15 MG
     Route: 065
  414. CYCLOBENZAPRINE [Suspect]
     Active Substance: CYCLOBENZAPRINE
     Dosage: 15 MG, Q8H
     Route: 065
  415. CYCLOBENZAPRINE [Suspect]
     Active Substance: CYCLOBENZAPRINE
     Dosage: 500 MG, TID
     Route: 065
  416. CYCLOBENZAPRINE [Suspect]
     Active Substance: CYCLOBENZAPRINE
     Dosage: 15 MG, QD
     Route: 065
  417. CYCLOBENZAPRINE [Suspect]
     Active Substance: CYCLOBENZAPRINE
     Dosage: 15 MG, QD
     Route: 065
  418. CYCLOBENZAPRINE [Suspect]
     Active Substance: CYCLOBENZAPRINE
     Dosage: 200 MG, QD
     Route: 065
  419. CYCLOBENZAPRINE [Suspect]
     Active Substance: CYCLOBENZAPRINE
     Dosage: 5 MG, QD
     Route: 065
  420. CYCLOBENZAPRINE [Suspect]
     Active Substance: CYCLOBENZAPRINE
     Dosage: 5 MG, QD
     Route: 065
  421. CYCLOBENZAPRINE [Suspect]
     Active Substance: CYCLOBENZAPRINE
     Dosage: 5 MG, QD
     Route: 065
  422. CYCLOBENZAPRINE [Suspect]
     Active Substance: CYCLOBENZAPRINE
     Dosage: 5 MG, QD
     Route: 065
  423. CYCLOBENZAPRINE [Suspect]
     Active Substance: CYCLOBENZAPRINE
     Dosage: 5 MG, QD
     Route: 065
  424. CYCLOBENZAPRINE [Suspect]
     Active Substance: CYCLOBENZAPRINE
     Dosage: 5 MG, QD
     Route: 065
  425. CYCLOBENZAPRINE [Suspect]
     Active Substance: CYCLOBENZAPRINE
     Dosage: 10 MG, QD
     Route: 065
  426. CYCLOBENZAPRINE [Suspect]
     Active Substance: CYCLOBENZAPRINE
     Dosage: 5 MG, BID
     Route: 065
  427. CYCLOBENZAPRINE [Suspect]
     Active Substance: CYCLOBENZAPRINE
     Dosage: 1.87 MG, QD
     Route: 065
  428. CYCLOBENZAPRINE [Suspect]
     Active Substance: CYCLOBENZAPRINE
     Dosage: 1.87 MG, QD
     Route: 065
  429. CYCLOBENZAPRINE [Suspect]
     Active Substance: CYCLOBENZAPRINE
     Dosage: 1.87 MG, QD
     Route: 065
  430. CYCLOBENZAPRINE [Suspect]
     Active Substance: CYCLOBENZAPRINE
     Dosage: 1 MG, QD
     Route: 065
  431. CYCLOBENZAPRINE [Suspect]
     Active Substance: CYCLOBENZAPRINE
     Dosage: 1 MG, QD
     Route: 065
  432. CYCLOBENZAPRINE [Suspect]
     Active Substance: CYCLOBENZAPRINE
     Dosage: 200 MG, Q12H
     Route: 065
  433. CYCLOBENZAPRINE [Suspect]
     Active Substance: CYCLOBENZAPRINE
     Dosage: 0.63 MG
     Route: 065
  434. CYCLOBENZAPRINE [Suspect]
     Active Substance: CYCLOBENZAPRINE
     Dosage: 0.63 MG
     Route: 065
  435. CYCLOBENZAPRINE [Suspect]
     Active Substance: CYCLOBENZAPRINE
     Dosage: 0.63 MG
     Route: 065
  436. CYCLOBENZAPRINE [Suspect]
     Active Substance: CYCLOBENZAPRINE
     Dosage: 0.63 MG
     Route: 065
  437. CYCLOBENZAPRINE [Suspect]
     Active Substance: CYCLOBENZAPRINE
     Dosage: 10 MG, QD
     Route: 065
  438. CYCLOBENZAPRINE [Suspect]
     Active Substance: CYCLOBENZAPRINE
     Dosage: 10 MG, QD
     Route: 065
  439. CYCLOBENZAPRINE [Suspect]
     Active Substance: CYCLOBENZAPRINE
     Dosage: 0.63 MG, Q12H
     Route: 065
  440. CYCLOBENZAPRINE [Suspect]
     Active Substance: CYCLOBENZAPRINE
     Dosage: 0.63 MG, Q12H
     Route: 065
  441. CYCLOBENZAPRINE [Suspect]
     Active Substance: CYCLOBENZAPRINE
     Dosage: 5 MG, Q12H
     Route: 065
  442. CYCLOBENZAPRINE [Suspect]
     Active Substance: CYCLOBENZAPRINE
     Dosage: 100 MG, Q12H
     Route: 065
  443. NITROGLYCERIN [Suspect]
     Active Substance: NITROGLYCERIN
     Indication: Angina pectoris
     Dosage: 1 DF, QD
     Route: 065
  444. NITROGLYCERIN [Suspect]
     Active Substance: NITROGLYCERIN
     Indication: Coronary artery disease
     Dosage: 0.4 MG, QD
     Route: 061
  445. NITROGLYCERIN [Suspect]
     Active Substance: NITROGLYCERIN
     Indication: Hypertension
     Dosage: 0.4 DF, QD
     Route: 065
  446. NITROGLYCERIN [Suspect]
     Active Substance: NITROGLYCERIN
     Indication: Chest pain
     Dosage: 0.6 MG, QD
     Route: 061
  447. NITROGLYCERIN [Suspect]
     Active Substance: NITROGLYCERIN
     Indication: Fibromyalgia
     Dosage: 0.6 MG, QD
     Route: 065
  448. NITROGLYCERIN [Suspect]
     Active Substance: NITROGLYCERIN
     Dosage: 0.6 MG, QD
     Route: 065
  449. NITROGLYCERIN [Suspect]
     Active Substance: NITROGLYCERIN
     Dosage: 20 MG, QD
     Route: 065
  450. NITROGLYCERIN [Suspect]
     Active Substance: NITROGLYCERIN
     Dosage: 0.6 MG, QD
     Route: 065
  451. NITROGLYCERIN [Suspect]
     Active Substance: NITROGLYCERIN
     Dosage: UNK
     Route: 065
  452. NITROGLYCERIN [Suspect]
     Active Substance: NITROGLYCERIN
     Dosage: 1 DF, QD
     Route: 065
  453. NITROGLYCERIN [Suspect]
     Active Substance: NITROGLYCERIN
     Dosage: 0.4 MG, QD
     Route: 065
  454. NITROGLYCERIN [Suspect]
     Active Substance: NITROGLYCERIN
     Dosage: 0.4 MG, QD
     Route: 065
  455. NITROGLYCERIN [Suspect]
     Active Substance: NITROGLYCERIN
     Dosage: 0.4 MG, QD
     Route: 065
  456. NITROGLYCERIN [Suspect]
     Active Substance: NITROGLYCERIN
     Dosage: 1 DF, QD
     Route: 065
  457. NITROGLYCERIN [Suspect]
     Active Substance: NITROGLYCERIN
     Dosage: 1 DF, QD
     Route: 065
  458. NITROGLYCERIN [Suspect]
     Active Substance: NITROGLYCERIN
     Dosage: 0.6 MG, QD
     Route: 061
  459. NITROGLYCERIN [Suspect]
     Active Substance: NITROGLYCERIN
     Dosage: 0.6 MG, QD
     Route: 061
  460. NITROGLYCERIN [Suspect]
     Active Substance: NITROGLYCERIN
     Dosage: 0.6 MG, QD
     Route: 061
  461. NITROGLYCERIN [Suspect]
     Active Substance: NITROGLYCERIN
     Dosage: 0.6 MG, QD
     Route: 061
  462. NITROGLYCERIN [Suspect]
     Active Substance: NITROGLYCERIN
     Dosage: 0.4 MG, QD
     Route: 065
  463. NITROGLYCERIN [Suspect]
     Active Substance: NITROGLYCERIN
     Dosage: 0.4 MG, QD
     Route: 065
  464. NITROGLYCERIN [Suspect]
     Active Substance: NITROGLYCERIN
     Dosage: 0.4 MG, QD
     Route: 065
  465. NITROGLYCERIN [Suspect]
     Active Substance: NITROGLYCERIN
     Dosage: 0.6 MG, QD
     Route: 061
  466. NITROGLYCERIN [Suspect]
     Active Substance: NITROGLYCERIN
     Dosage: 0.6 MG, QD
     Route: 061
  467. NITROGLYCERIN [Suspect]
     Active Substance: NITROGLYCERIN
     Dosage: 1 DF, QD
     Route: 065
  468. NITROGLYCERIN [Suspect]
     Active Substance: NITROGLYCERIN
     Dosage: 1 DF, QD
     Route: 065
  469. NITROGLYCERIN [Suspect]
     Active Substance: NITROGLYCERIN
     Dosage: 0.4 MG, QD
     Route: 065
  470. NITROGLYCERIN [Suspect]
     Active Substance: NITROGLYCERIN
     Dosage: 0.4 MG, QD
     Route: 065
  471. NITROGLYCERIN [Suspect]
     Active Substance: NITROGLYCERIN
     Dosage: UNK
     Route: 065
  472. NITROGLYCERIN [Suspect]
     Active Substance: NITROGLYCERIN
     Dosage: UNK
     Route: 065
  473. NITROGLYCERIN [Suspect]
     Active Substance: NITROGLYCERIN
     Dosage: UNK
     Route: 065
  474. NITROGLYCERIN [Suspect]
     Active Substance: NITROGLYCERIN
     Dosage: UNK
     Route: 065
  475. NITROGLYCERIN [Suspect]
     Active Substance: NITROGLYCERIN
     Dosage: UNK
     Route: 065
  476. QUINAPRIL HYDROCHLORIDE [Suspect]
     Active Substance: QUINAPRIL HYDROCHLORIDE
     Indication: Seizure prophylaxis
     Dosage: 40 MG, QD
     Route: 065
  477. QUINAPRIL HYDROCHLORIDE [Suspect]
     Active Substance: QUINAPRIL HYDROCHLORIDE
     Indication: Seizure
     Dosage: 20 MG, QD
     Route: 065
  478. QUINAPRIL HYDROCHLORIDE [Suspect]
     Active Substance: QUINAPRIL HYDROCHLORIDE
     Indication: Pain
     Dosage: 40 MG, QD
     Route: 065
  479. QUINAPRIL HYDROCHLORIDE [Suspect]
     Active Substance: QUINAPRIL HYDROCHLORIDE
     Indication: Insomnia
     Dosage: 20 MG
     Route: 065
  480. QUINAPRIL HYDROCHLORIDE [Suspect]
     Active Substance: QUINAPRIL HYDROCHLORIDE
     Indication: Hypertension
     Dosage: UNK
     Route: 065
  481. QUINAPRIL HYDROCHLORIDE [Suspect]
     Active Substance: QUINAPRIL HYDROCHLORIDE
     Indication: Chest pain
     Dosage: UNK
     Route: 065
  482. QUINAPRIL HYDROCHLORIDE [Suspect]
     Active Substance: QUINAPRIL HYDROCHLORIDE
     Indication: Angina pectoris
     Dosage: 40 MG, QD
     Route: 065
  483. QUINAPRIL HYDROCHLORIDE [Suspect]
     Active Substance: QUINAPRIL HYDROCHLORIDE
     Indication: Coronary artery disease
     Dosage: 20 MG, QD
     Route: 065
  484. QUINAPRIL HYDROCHLORIDE [Suspect]
     Active Substance: QUINAPRIL HYDROCHLORIDE
     Dosage: 40 MG, QD
     Route: 065
  485. QUINAPRIL HYDROCHLORIDE [Suspect]
     Active Substance: QUINAPRIL HYDROCHLORIDE
     Dosage: 20 MG, QD
     Route: 065
  486. QUINAPRIL HYDROCHLORIDE [Suspect]
     Active Substance: QUINAPRIL HYDROCHLORIDE
     Dosage: UNK
     Route: 065
  487. QUINAPRIL HYDROCHLORIDE [Suspect]
     Active Substance: QUINAPRIL HYDROCHLORIDE
     Dosage: UNK
     Route: 065
  488. QUINAPRIL HYDROCHLORIDE [Suspect]
     Active Substance: QUINAPRIL HYDROCHLORIDE
     Dosage: 200 MG, QID
     Route: 065
  489. QUINAPRIL HYDROCHLORIDE [Suspect]
     Active Substance: QUINAPRIL HYDROCHLORIDE
     Dosage: UNK
     Route: 065
  490. QUINAPRIL HYDROCHLORIDE [Suspect]
     Active Substance: QUINAPRIL HYDROCHLORIDE
     Dosage: UNK
     Route: 065
  491. QUINAPRIL HYDROCHLORIDE [Suspect]
     Active Substance: QUINAPRIL HYDROCHLORIDE
     Dosage: UNK
     Route: 065
  492. QUINAPRIL HYDROCHLORIDE [Suspect]
     Active Substance: QUINAPRIL HYDROCHLORIDE
     Dosage: UNK
     Route: 065
  493. QUINAPRIL HYDROCHLORIDE [Suspect]
     Active Substance: QUINAPRIL HYDROCHLORIDE
     Dosage: UNK
     Route: 065
  494. QUINAPRIL HYDROCHLORIDE [Suspect]
     Active Substance: QUINAPRIL HYDROCHLORIDE
     Dosage: UNK
     Route: 065
  495. QUINAPRIL HYDROCHLORIDE [Suspect]
     Active Substance: QUINAPRIL HYDROCHLORIDE
     Dosage: UNK
     Route: 065
  496. QUINAPRIL HYDROCHLORIDE [Suspect]
     Active Substance: QUINAPRIL HYDROCHLORIDE
     Dosage: UNK
     Route: 065
  497. QUINAPRIL HYDROCHLORIDE [Suspect]
     Active Substance: QUINAPRIL HYDROCHLORIDE
     Dosage: UNK
     Route: 065
  498. QUINAPRIL HYDROCHLORIDE [Suspect]
     Active Substance: QUINAPRIL HYDROCHLORIDE
     Dosage: UNK
     Route: 065
  499. QUINAPRIL HYDROCHLORIDE [Suspect]
     Active Substance: QUINAPRIL HYDROCHLORIDE
     Dosage: UNK
     Route: 065
  500. QUINAPRIL HYDROCHLORIDE [Suspect]
     Active Substance: QUINAPRIL HYDROCHLORIDE
     Dosage: UNK
     Route: 065
  501. QUINAPRIL HYDROCHLORIDE [Suspect]
     Active Substance: QUINAPRIL HYDROCHLORIDE
     Dosage: 40 MG, QD
     Route: 065
  502. QUINAPRIL HYDROCHLORIDE [Suspect]
     Active Substance: QUINAPRIL HYDROCHLORIDE
     Dosage: UNK
     Route: 065
  503. QUINAPRIL HYDROCHLORIDE [Suspect]
     Active Substance: QUINAPRIL HYDROCHLORIDE
     Dosage: 20 MG, QD
     Route: 065
  504. QUINAPRIL HYDROCHLORIDE [Suspect]
     Active Substance: QUINAPRIL HYDROCHLORIDE
     Dosage: UNK
     Route: 065
  505. ACEBUTOLOL HYDROCHLORIDE [Suspect]
     Active Substance: ACEBUTOLOL HYDROCHLORIDE
     Indication: Hypertension
     Dosage: 400 MG, QD
     Route: 065
  506. ACEBUTOLOL HYDROCHLORIDE [Suspect]
     Active Substance: ACEBUTOLOL HYDROCHLORIDE
     Indication: Coronary artery disease
     Dosage: 100 MG, BID
     Route: 065
  507. ACEBUTOLOL HYDROCHLORIDE [Suspect]
     Active Substance: ACEBUTOLOL HYDROCHLORIDE
     Indication: Constipation
     Dosage: 100 MG, Q12H
     Route: 065
  508. ACEBUTOLOL HYDROCHLORIDE [Suspect]
     Active Substance: ACEBUTOLOL HYDROCHLORIDE
     Indication: Chest pain
     Dosage: 400 MG, QW
     Route: 065
  509. ACEBUTOLOL HYDROCHLORIDE [Suspect]
     Active Substance: ACEBUTOLOL HYDROCHLORIDE
     Indication: Angina pectoris
     Dosage: 200 MG, BID
     Route: 065
  510. ACEBUTOLOL HYDROCHLORIDE [Suspect]
     Active Substance: ACEBUTOLOL HYDROCHLORIDE
     Indication: Product used for unknown indication
     Dosage: 200 MG, Q12H
     Route: 065
  511. ACEBUTOLOL HYDROCHLORIDE [Suspect]
     Active Substance: ACEBUTOLOL HYDROCHLORIDE
     Dosage: 200 MG, Q5W
     Route: 065
  512. ACEBUTOLOL HYDROCHLORIDE [Suspect]
     Active Substance: ACEBUTOLOL HYDROCHLORIDE
     Dosage: 100 MG, Q48H
     Route: 065
  513. ACEBUTOLOL HYDROCHLORIDE [Suspect]
     Active Substance: ACEBUTOLOL HYDROCHLORIDE
     Dosage: 100 MG, 5QD
     Route: 065
  514. ACEBUTOLOL HYDROCHLORIDE [Suspect]
     Active Substance: ACEBUTOLOL HYDROCHLORIDE
     Dosage: UNK
     Route: 065
  515. ACEBUTOLOL HYDROCHLORIDE [Suspect]
     Active Substance: ACEBUTOLOL HYDROCHLORIDE
     Dosage: 500 MG, QD
     Route: 065
  516. ACEBUTOLOL HYDROCHLORIDE [Suspect]
     Active Substance: ACEBUTOLOL HYDROCHLORIDE
     Dosage: 200 MG, BID
     Route: 065
  517. ACEBUTOLOL HYDROCHLORIDE [Suspect]
     Active Substance: ACEBUTOLOL HYDROCHLORIDE
     Dosage: 100 MG, Q2MO
     Route: 065
  518. ACEBUTOLOL HYDROCHLORIDE [Suspect]
     Active Substance: ACEBUTOLOL HYDROCHLORIDE
     Dosage: UNK
     Route: 065
  519. ACEBUTOLOL HYDROCHLORIDE [Suspect]
     Active Substance: ACEBUTOLOL HYDROCHLORIDE
     Dosage: 100 MG, QD
     Route: 065
  520. ACEBUTOLOL HYDROCHLORIDE [Suspect]
     Active Substance: ACEBUTOLOL HYDROCHLORIDE
     Dosage: 200 MG, QD
     Route: 065
  521. ACEBUTOLOL HYDROCHLORIDE [Suspect]
     Active Substance: ACEBUTOLOL HYDROCHLORIDE
     Dosage: 200 MG, BID
     Route: 065
  522. ACEBUTOLOL HYDROCHLORIDE [Suspect]
     Active Substance: ACEBUTOLOL HYDROCHLORIDE
     Dosage: 200 MG, BID
     Route: 065
  523. ACEBUTOLOL HYDROCHLORIDE [Suspect]
     Active Substance: ACEBUTOLOL HYDROCHLORIDE
     Dosage: 200 MG, BID
     Route: 065
  524. ACEBUTOLOL HYDROCHLORIDE [Suspect]
     Active Substance: ACEBUTOLOL HYDROCHLORIDE
     Dosage: 200 MG, BID
     Route: 065
  525. ACEBUTOLOL HYDROCHLORIDE [Suspect]
     Active Substance: ACEBUTOLOL HYDROCHLORIDE
     Dosage: 100 MG, QD
     Route: 065
  526. ACEBUTOLOL HYDROCHLORIDE [Suspect]
     Active Substance: ACEBUTOLOL HYDROCHLORIDE
     Dosage: 100 MG, QD
     Route: 065
  527. ACEBUTOLOL HYDROCHLORIDE [Suspect]
     Active Substance: ACEBUTOLOL HYDROCHLORIDE
     Dosage: 200 MG, Q12H
     Route: 065
  528. ACEBUTOLOL HYDROCHLORIDE [Suspect]
     Active Substance: ACEBUTOLOL HYDROCHLORIDE
     Dosage: 200 MG
     Route: 065
  529. ACEBUTOLOL HYDROCHLORIDE [Suspect]
     Active Substance: ACEBUTOLOL HYDROCHLORIDE
     Dosage: 200 MG
     Route: 065
  530. ACEBUTOLOL HYDROCHLORIDE [Suspect]
     Active Substance: ACEBUTOLOL HYDROCHLORIDE
     Dosage: 100 MG, 5QD
     Route: 065
  531. ACEBUTOLOL HYDROCHLORIDE [Suspect]
     Active Substance: ACEBUTOLOL HYDROCHLORIDE
     Dosage: 200 MG
     Route: 065
  532. ACEBUTOLOL HYDROCHLORIDE [Suspect]
     Active Substance: ACEBUTOLOL HYDROCHLORIDE
     Dosage: 100 MG, BID
     Route: 065
  533. ACEBUTOLOL HYDROCHLORIDE [Suspect]
     Active Substance: ACEBUTOLOL HYDROCHLORIDE
     Dosage: 200 MG, Q12H
     Route: 065
  534. ACEBUTOLOL HYDROCHLORIDE [Suspect]
     Active Substance: ACEBUTOLOL HYDROCHLORIDE
     Dosage: UNK
     Route: 065
  535. ACEBUTOLOL HYDROCHLORIDE [Suspect]
     Active Substance: ACEBUTOLOL HYDROCHLORIDE
     Dosage: 400 MG Q12H (BID);
     Route: 065
  536. ACEBUTOLOL HYDROCHLORIDE [Suspect]
     Active Substance: ACEBUTOLOL HYDROCHLORIDE
     Dosage: 200 MG, Q12H
     Route: 065
  537. ACEBUTOLOL HYDROCHLORIDE [Suspect]
     Active Substance: ACEBUTOLOL HYDROCHLORIDE
     Dosage: 200 MG
     Route: 065
  538. ACEBUTOLOL HYDROCHLORIDE [Suspect]
     Active Substance: ACEBUTOLOL HYDROCHLORIDE
     Dosage: 100 MG, Q12H
     Route: 065
  539. ACEBUTOLOL HYDROCHLORIDE [Suspect]
     Active Substance: ACEBUTOLOL HYDROCHLORIDE
     Dosage: 100 MG
     Route: 065
  540. ACEBUTOLOL HYDROCHLORIDE [Suspect]
     Active Substance: ACEBUTOLOL HYDROCHLORIDE
     Dosage: 200 MG, Q5W
     Route: 065
  541. ACEBUTOLOL HYDROCHLORIDE [Suspect]
     Active Substance: ACEBUTOLOL HYDROCHLORIDE
     Dosage: 400 MG, QD
     Route: 065
  542. ACEBUTOLOL HYDROCHLORIDE [Suspect]
     Active Substance: ACEBUTOLOL HYDROCHLORIDE
     Dosage: 100 MG, Q12H
     Route: 065
  543. ACEBUTOLOL HYDROCHLORIDE [Suspect]
     Active Substance: ACEBUTOLOL HYDROCHLORIDE
     Dosage: 400 MG, QW
     Route: 065
  544. ACEBUTOLOL HYDROCHLORIDE [Suspect]
     Active Substance: ACEBUTOLOL HYDROCHLORIDE
     Dosage: 100 MG
     Route: 065
  545. ACEBUTOLOL HYDROCHLORIDE [Suspect]
     Active Substance: ACEBUTOLOL HYDROCHLORIDE
     Dosage: 200 MG
     Route: 065
  546. ACEBUTOLOL HYDROCHLORIDE [Suspect]
     Active Substance: ACEBUTOLOL HYDROCHLORIDE
     Dosage: 100 MG
     Route: 065
  547. ACEBUTOLOL HYDROCHLORIDE [Suspect]
     Active Substance: ACEBUTOLOL HYDROCHLORIDE
     Dosage: 100 MG, QD
     Route: 065
  548. ACEBUTOLOL HYDROCHLORIDE [Suspect]
     Active Substance: ACEBUTOLOL HYDROCHLORIDE
     Dosage: 200 MG, QD
     Route: 065
  549. ACEBUTOLOL HYDROCHLORIDE [Suspect]
     Active Substance: ACEBUTOLOL HYDROCHLORIDE
     Dosage: 200 MG, QD
     Route: 065
  550. ACEBUTOLOL HYDROCHLORIDE [Suspect]
     Active Substance: ACEBUTOLOL HYDROCHLORIDE
     Dosage: 50 MG, BID
     Route: 065
  551. ACEBUTOLOL HYDROCHLORIDE [Suspect]
     Active Substance: ACEBUTOLOL HYDROCHLORIDE
     Dosage: 50 MG
     Route: 065
  552. ACEBUTOLOL HYDROCHLORIDE [Suspect]
     Active Substance: ACEBUTOLOL HYDROCHLORIDE
     Dosage: 200 MG, QW
     Route: 065
  553. ACEBUTOLOL HYDROCHLORIDE [Suspect]
     Active Substance: ACEBUTOLOL HYDROCHLORIDE
     Dosage: 50 MG
     Route: 065
  554. ACEBUTOLOL HYDROCHLORIDE [Suspect]
     Active Substance: ACEBUTOLOL HYDROCHLORIDE
     Dosage: 200 MG, 5QD
     Route: 065
  555. LACTULOSE [Suspect]
     Active Substance: LACTULOSE
     Indication: Constipation
     Dosage: 15 ML (LIQUID); ORAL USE
     Route: 048
  556. LACTULOSE [Suspect]
     Active Substance: LACTULOSE
     Indication: Thyroid disorder
     Dosage: 15 MG, QD (SYRUP); ORAL
     Route: 048
  557. LACTULOSE [Suspect]
     Active Substance: LACTULOSE
     Indication: Radioactive iodine therapy
     Dosage: UNK
     Route: 048
  558. LACTULOSE [Suspect]
     Active Substance: LACTULOSE
     Dosage: 15 MG, QD (ORAL SOLUTION); ORAL
     Route: 048
  559. LACTULOSE [Suspect]
     Active Substance: LACTULOSE
     Dosage: UNK (SYRUP); ORAL USE
     Route: 048
  560. LACTULOSE [Suspect]
     Active Substance: LACTULOSE
     Dosage: 15 MG, QD
     Route: 048
  561. LACTULOSE [Suspect]
     Active Substance: LACTULOSE
     Dosage: 15 MG, QD
     Route: 048
  562. LACTULOSE [Suspect]
     Active Substance: LACTULOSE
     Dosage: 15 ML
     Route: 048
  563. LACTULOSE [Suspect]
     Active Substance: LACTULOSE
     Dosage: 15 ML
     Route: 048
  564. LACTULOSE [Suspect]
     Active Substance: LACTULOSE
     Dosage: 2 DF, QD
     Route: 048
  565. LACTULOSE [Suspect]
     Active Substance: LACTULOSE
     Dosage: 15 MG, QD
     Route: 048
  566. LACTULOSE [Suspect]
     Active Substance: LACTULOSE
     Dosage: 15 MG
     Route: 048
  567. LACTULOSE [Suspect]
     Active Substance: LACTULOSE
     Dosage: 15 MG, QD
     Route: 048
  568. LACTULOSE [Suspect]
     Active Substance: LACTULOSE
     Dosage: UNK
     Route: 065
  569. LACTULOSE [Suspect]
     Active Substance: LACTULOSE
     Dosage: UNK
     Route: 065
  570. LACTULOSE [Suspect]
     Active Substance: LACTULOSE
     Dosage: 15 ML, QD
     Route: 048
  571. LACTULOSE [Suspect]
     Active Substance: LACTULOSE
     Dosage: 15 ML, QD
     Route: 048
  572. LACTULOSE [Suspect]
     Active Substance: LACTULOSE
     Dosage: 15 ML, QD
     Route: 048
  573. LACTULOSE [Suspect]
     Active Substance: LACTULOSE
     Dosage: 15 MG
     Route: 048
  574. LACTULOSE [Suspect]
     Active Substance: LACTULOSE
     Dosage: 15 ML
     Route: 048
  575. DULCOLAX (BISACODYL) [Suspect]
     Active Substance: BISACODYL
     Indication: Constipation
     Dosage: 2 DF, QD
     Route: 065
  576. DULCOLAX (BISACODYL) [Suspect]
     Active Substance: BISACODYL
     Dosage: 1 DF, QD
     Route: 065
  577. DULCOLAX (BISACODYL) [Suspect]
     Active Substance: BISACODYL
     Dosage: UNK
     Route: 065
  578. DULCOLAX (BISACODYL) [Suspect]
     Active Substance: BISACODYL
     Dosage: UNK
     Route: 048
  579. DULCOLAX (BISACODYL) [Suspect]
     Active Substance: BISACODYL
     Dosage: 2 DF
     Route: 065
  580. DULCOLAX (BISACODYL) [Suspect]
     Active Substance: BISACODYL
     Dosage: 2 DF
     Route: 065
  581. TIOTROPIUM BROMIDE [Suspect]
     Active Substance: TIOTROPIUM BROMIDE
     Indication: Chronic obstructive pulmonary disease
     Dosage: 18 UG, QD
     Route: 048
  582. TIOTROPIUM BROMIDE [Suspect]
     Active Substance: TIOTROPIUM BROMIDE
     Dosage: 18 MG, QD
     Route: 065
  583. QUININE [Suspect]
     Active Substance: QUININE
     Indication: Pain
     Route: 065
  584. AGGRENOX [Suspect]
     Active Substance: ASPIRIN\DIPYRIDAMOLE
     Indication: Cerebrovascular accident
     Dosage: 2 DF, QOD
     Route: 065
  585. AGGRENOX [Suspect]
     Active Substance: ASPIRIN\DIPYRIDAMOLE
     Indication: Hypertension
     Dosage: 2 DOSAGE FORM (TOTAL);
     Route: 065
  586. AGGRENOX [Suspect]
     Active Substance: ASPIRIN\DIPYRIDAMOLE
     Indication: Arthritis
     Dosage: 1 DF, Q12H
     Route: 065
  587. AGGRENOX [Suspect]
     Active Substance: ASPIRIN\DIPYRIDAMOLE
     Dosage: 2 DF
     Route: 065
  588. AGGRENOX [Suspect]
     Active Substance: ASPIRIN\DIPYRIDAMOLE
     Dosage: 1 DF, BID
     Route: 065
  589. AGGRENOX [Suspect]
     Active Substance: ASPIRIN\DIPYRIDAMOLE
     Dosage: 2 DF
     Route: 065
  590. AGGRENOX [Suspect]
     Active Substance: ASPIRIN\DIPYRIDAMOLE
     Dosage: 1 UNK
     Route: 065
  591. AGGRENOX [Suspect]
     Active Substance: ASPIRIN\DIPYRIDAMOLE
     Dosage: 2 DF
     Route: 065
  592. AGGRENOX [Suspect]
     Active Substance: ASPIRIN\DIPYRIDAMOLE
     Dosage: 2 DF, QD
     Route: 065
  593. AGGRENOX [Suspect]
     Active Substance: ASPIRIN\DIPYRIDAMOLE
     Dosage: UNK
     Route: 065
  594. AGGRENOX [Suspect]
     Active Substance: ASPIRIN\DIPYRIDAMOLE
     Dosage: 50 MG
     Route: 065
  595. AGGRENOX [Suspect]
     Active Substance: ASPIRIN\DIPYRIDAMOLE
     Dosage: 2 DF, BID
     Route: 065
  596. AGGRENOX [Suspect]
     Active Substance: ASPIRIN\DIPYRIDAMOLE
     Dosage: 50 MG, QD
     Route: 065
  597. AGGRENOX [Suspect]
     Active Substance: ASPIRIN\DIPYRIDAMOLE
     Dosage: UNK (CAPSULE); UNKNOWN
     Route: 065
  598. AGGRENOX [Suspect]
     Active Substance: ASPIRIN\DIPYRIDAMOLE
     Dosage: 75 MG, QD
     Route: 065
  599. AGGRENOX [Suspect]
     Active Substance: ASPIRIN\DIPYRIDAMOLE
     Dosage: 2 MG, QD
     Route: 065
  600. AGGRENOX [Suspect]
     Active Substance: ASPIRIN\DIPYRIDAMOLE
     Dosage: 2 MG, QD
     Route: 065
  601. AGGRENOX [Suspect]
     Active Substance: ASPIRIN\DIPYRIDAMOLE
     Dosage: 2 MG, QW
     Route: 065
  602. AGGRENOX [Suspect]
     Active Substance: ASPIRIN\DIPYRIDAMOLE
     Dosage: 1 DF, BID
     Route: 065
  603. AGGRENOX [Suspect]
     Active Substance: ASPIRIN\DIPYRIDAMOLE
     Dosage: 1 DF, Q12H
     Route: 065
  604. AGGRENOX [Suspect]
     Active Substance: ASPIRIN\DIPYRIDAMOLE
     Dosage: 1 DF, Q12H
     Route: 065
  605. AGGRENOX [Suspect]
     Active Substance: ASPIRIN\DIPYRIDAMOLE
     Dosage: 1 DF, QD
     Route: 065
  606. AGGRENOX [Suspect]
     Active Substance: ASPIRIN\DIPYRIDAMOLE
     Dosage: 1 DF, Q12H
     Route: 065
  607. AGGRENOX [Suspect]
     Active Substance: ASPIRIN\DIPYRIDAMOLE
     Dosage: 1 DF, Q12H
     Route: 065
  608. AGGRENOX [Suspect]
     Active Substance: ASPIRIN\DIPYRIDAMOLE
     Dosage: 1 DF, Q12H
     Route: 065
  609. AGGRENOX [Suspect]
     Active Substance: ASPIRIN\DIPYRIDAMOLE
     Dosage: 1 DF, Q12H
     Route: 065
  610. MAGNESIUM HYDROXIDE [Suspect]
     Active Substance: MAGNESIUM HYDROXIDE
     Indication: Constipation
     Dosage: 622 MG, QD
     Route: 065
  611. MAGNESIUM HYDROXIDE [Suspect]
     Active Substance: MAGNESIUM HYDROXIDE
     Dosage: 1 DF, QD
     Route: 065
  612. MAGNESIUM HYDROXIDE [Suspect]
     Active Substance: MAGNESIUM HYDROXIDE
     Dosage: 622 MG, Q12H
     Route: 065
  613. MAGNESIUM HYDROXIDE [Suspect]
     Active Substance: MAGNESIUM HYDROXIDE
     Dosage: 2 DF, QD
     Route: 065
  614. MAGNESIUM HYDROXIDE [Suspect]
     Active Substance: MAGNESIUM HYDROXIDE
     Dosage: UNK
     Route: 065
  615. MAGNESIUM HYDROXIDE [Suspect]
     Active Substance: MAGNESIUM HYDROXIDE
     Dosage: UNK, QD
     Route: 065
  616. MAGNESIUM HYDROXIDE [Suspect]
     Active Substance: MAGNESIUM HYDROXIDE
     Dosage: 1 DF, BID
     Route: 065
  617. MAGNESIUM HYDROXIDE [Suspect]
     Active Substance: MAGNESIUM HYDROXIDE
     Dosage: 311 MG
     Route: 065
  618. MAGNESIUM HYDROXIDE [Suspect]
     Active Substance: MAGNESIUM HYDROXIDE
     Dosage: 622 MG
     Route: 065
  619. MAGNESIUM HYDROXIDE [Suspect]
     Active Substance: MAGNESIUM HYDROXIDE
     Dosage: 1244 MG, QD
     Route: 065
  620. MAGNESIUM HYDROXIDE [Suspect]
     Active Substance: MAGNESIUM HYDROXIDE
     Dosage: 1240 MG, QD
     Route: 065
  621. MAGNESIUM HYDROXIDE [Suspect]
     Active Substance: MAGNESIUM HYDROXIDE
     Dosage: 10 MG, QD
     Route: 065
  622. MAGNESIUM HYDROXIDE [Suspect]
     Active Substance: MAGNESIUM HYDROXIDE
     Dosage: 622 MG, Q12H
     Route: 065
  623. MAGNESIUM HYDROXIDE [Suspect]
     Active Substance: MAGNESIUM HYDROXIDE
     Dosage: 1 DOSAGE FORM, BID
     Route: 065
  624. MAGNESIUM HYDROXIDE [Suspect]
     Active Substance: MAGNESIUM HYDROXIDE
     Dosage: 1 DOSAGE FORM, QD
     Route: 065
  625. MAGNESIUM HYDROXIDE [Suspect]
     Active Substance: MAGNESIUM HYDROXIDE
     Dosage: UNK QD
     Route: 065
  626. MAGNESIUM HYDROXIDE [Suspect]
     Active Substance: MAGNESIUM HYDROXIDE
     Dosage: 622 MILLIGRAM, BID
     Route: 065
  627. MAGNESIUM HYDROXIDE [Suspect]
     Active Substance: MAGNESIUM HYDROXIDE
     Dosage: 622 MG, QD
     Route: 065
  628. MAGNESIUM HYDROXIDE [Suspect]
     Active Substance: MAGNESIUM HYDROXIDE
     Dosage: 622 MG, QD
     Route: 065
  629. MAGNESIUM HYDROXIDE [Suspect]
     Active Substance: MAGNESIUM HYDROXIDE
     Dosage: 2 DF, QD
     Route: 065
  630. MAGNESIUM HYDROXIDE [Suspect]
     Active Substance: MAGNESIUM HYDROXIDE
     Dosage: 622 MG, QD
     Route: 065
  631. DILTIAZEM HYDROCHLORIDE [Suspect]
     Active Substance: DILTIAZEM HYDROCHLORIDE
     Indication: Hypertension
     Dosage: 500 MG, QD
     Route: 065
  632. DILTIAZEM HYDROCHLORIDE [Suspect]
     Active Substance: DILTIAZEM HYDROCHLORIDE
     Indication: Coronary artery disease
     Dosage: 360 MG, QD
     Route: 065
  633. DILTIAZEM HYDROCHLORIDE [Suspect]
     Active Substance: DILTIAZEM HYDROCHLORIDE
     Indication: Angina pectoris
     Dosage: UNK
     Route: 065
  634. DILTIAZEM HYDROCHLORIDE [Suspect]
     Active Substance: DILTIAZEM HYDROCHLORIDE
     Indication: Chest pain
     Dosage: UNK
     Route: 065
  635. DILTIAZEM HYDROCHLORIDE [Suspect]
     Active Substance: DILTIAZEM HYDROCHLORIDE
     Dosage: UNK
     Route: 065
  636. DILTIAZEM HYDROCHLORIDE [Suspect]
     Active Substance: DILTIAZEM HYDROCHLORIDE
     Dosage: 360 MG, QD
     Route: 065
  637. DILTIAZEM HYDROCHLORIDE [Suspect]
     Active Substance: DILTIAZEM HYDROCHLORIDE
     Dosage: 360 MG, QD
     Route: 065
  638. DILTIAZEM HYDROCHLORIDE [Suspect]
     Active Substance: DILTIAZEM HYDROCHLORIDE
     Dosage: UNK
     Route: 065
  639. DILTIAZEM HYDROCHLORIDE [Suspect]
     Active Substance: DILTIAZEM HYDROCHLORIDE
     Dosage: UNK
     Route: 065
  640. DILTIAZEM HYDROCHLORIDE [Suspect]
     Active Substance: DILTIAZEM HYDROCHLORIDE
     Dosage: UNK
     Route: 065
  641. DILTIAZEM HYDROCHLORIDE [Suspect]
     Active Substance: DILTIAZEM HYDROCHLORIDE
     Dosage: UNK
     Route: 065
  642. DILTIAZEM HYDROCHLORIDE [Suspect]
     Active Substance: DILTIAZEM HYDROCHLORIDE
     Dosage: UNK
     Route: 065
  643. DILTIAZEM HYDROCHLORIDE [Suspect]
     Active Substance: DILTIAZEM HYDROCHLORIDE
     Dosage: UNK
     Route: 065
  644. DILTIAZEM HYDROCHLORIDE [Suspect]
     Active Substance: DILTIAZEM HYDROCHLORIDE
     Dosage: UNK
     Route: 065
  645. DILTIAZEM HYDROCHLORIDE [Suspect]
     Active Substance: DILTIAZEM HYDROCHLORIDE
     Dosage: UNK
     Route: 065
  646. DILTIAZEM HYDROCHLORIDE [Suspect]
     Active Substance: DILTIAZEM HYDROCHLORIDE
     Dosage: UNK
     Route: 065
  647. DILTIAZEM HYDROCHLORIDE [Suspect]
     Active Substance: DILTIAZEM HYDROCHLORIDE
     Dosage: 500 MG, QD
     Route: 065
  648. DILTIAZEM HYDROCHLORIDE [Suspect]
     Active Substance: DILTIAZEM HYDROCHLORIDE
     Dosage: 500 MG, QD
     Route: 065
  649. DILTIAZEM HYDROCHLORIDE [Suspect]
     Active Substance: DILTIAZEM HYDROCHLORIDE
     Dosage: 500 MG, QD
     Route: 065
  650. DILTIAZEM HYDROCHLORIDE [Suspect]
     Active Substance: DILTIAZEM HYDROCHLORIDE
     Dosage: 360 MG, QD
     Route: 065
  651. DILTIAZEM HYDROCHLORIDE [Suspect]
     Active Substance: DILTIAZEM HYDROCHLORIDE
     Dosage: UNK
     Route: 065
  652. DILTIAZEM HYDROCHLORIDE [Suspect]
     Active Substance: DILTIAZEM HYDROCHLORIDE
     Dosage: UNK
     Route: 065
  653. DILTIAZEM HYDROCHLORIDE [Suspect]
     Active Substance: DILTIAZEM HYDROCHLORIDE
     Dosage: UNK
     Route: 065
  654. DILTIAZEM HYDROCHLORIDE [Suspect]
     Active Substance: DILTIAZEM HYDROCHLORIDE
     Dosage: 360 MG, QD
     Route: 065
  655. DILTIAZEM HYDROCHLORIDE [Suspect]
     Active Substance: DILTIAZEM HYDROCHLORIDE
     Dosage: 500 MG, QD
     Route: 065
  656. DILTIAZEM HYDROCHLORIDE [Suspect]
     Active Substance: DILTIAZEM HYDROCHLORIDE
     Dosage: 500 MG, QD
     Route: 065
  657. CYCLOBENZAPRINE [Suspect]
     Active Substance: CYCLOBENZAPRINE
     Indication: Fibromyalgia
     Dosage: 5 MG, Q8H (TID);
     Route: 065
  658. CYCLOBENZAPRINE [Suspect]
     Active Substance: CYCLOBENZAPRINE
     Indication: Pain
     Dosage: UNK
     Route: 065
  659. CYCLOBENZAPRINE [Suspect]
     Active Substance: CYCLOBENZAPRINE
     Indication: Seizure prophylaxis
     Dosage: 15 MG
     Route: 065
  660. CYCLOBENZAPRINE [Suspect]
     Active Substance: CYCLOBENZAPRINE
     Dosage: UNK
     Route: 065
  661. CYCLOBENZAPRINE [Suspect]
     Active Substance: CYCLOBENZAPRINE
     Dosage: UNK
     Route: 065
  662. CYCLOBENZAPRINE [Suspect]
     Active Substance: CYCLOBENZAPRINE
     Dosage: 5 MG, TID
     Route: 065
  663. CYCLOBENZAPRINE [Suspect]
     Active Substance: CYCLOBENZAPRINE
     Dosage: UNK
     Route: 065
  664. CYCLOBENZAPRINE [Suspect]
     Active Substance: CYCLOBENZAPRINE
     Dosage: 5 MG
     Route: 065
  665. CYCLOBENZAPRINE [Suspect]
     Active Substance: CYCLOBENZAPRINE
     Dosage: UNK
     Route: 065
  666. CYCLOBENZAPRINE [Suspect]
     Active Substance: CYCLOBENZAPRINE
     Dosage: UNK
     Route: 065
  667. CYCLOBENZAPRINE [Suspect]
     Active Substance: CYCLOBENZAPRINE
     Dosage: 5 MG
     Route: 065
  668. CYCLOBENZAPRINE [Suspect]
     Active Substance: CYCLOBENZAPRINE
     Dosage: 5 MG, QD
     Route: 065
  669. CYCLOBENZAPRINE [Suspect]
     Active Substance: CYCLOBENZAPRINE
     Dosage: 5 MG, QD
     Route: 065
  670. CYCLOBENZAPRINE [Suspect]
     Active Substance: CYCLOBENZAPRINE
     Dosage: 5 MG, QD
     Route: 065
  671. CALCIUM CARBONATE [Suspect]
     Active Substance: CALCIUM CARBONATE
     Indication: Product used for unknown indication
     Route: 065
  672. CALCIUM CARBONATE [Suspect]
     Active Substance: CALCIUM CARBONATE
     Dosage: UNK
     Route: 065
  673. AMITRIPTYLINE HYDROCHLORIDE [Suspect]
     Active Substance: AMITRIPTYLINE HYDROCHLORIDE
     Indication: Insomnia
     Dosage: 75 MG, QD
     Route: 065
  674. AMITRIPTYLINE HYDROCHLORIDE [Suspect]
     Active Substance: AMITRIPTYLINE HYDROCHLORIDE
     Dosage: UNK
     Route: 065
  675. AMITRIPTYLINE HYDROCHLORIDE [Suspect]
     Active Substance: AMITRIPTYLINE HYDROCHLORIDE
     Dosage: 25 M, QD
     Route: 065
  676. AMITRIPTYLINE HYDROCHLORIDE [Suspect]
     Active Substance: AMITRIPTYLINE HYDROCHLORIDE
     Dosage: 50 MG
     Route: 065
  677. AMITRIPTYLINE HYDROCHLORIDE [Suspect]
     Active Substance: AMITRIPTYLINE HYDROCHLORIDE
     Dosage: 75 MG
     Route: 065
  678. CARBAMAZEPINE [Suspect]
     Active Substance: CARBAMAZEPINE
     Indication: Prophylaxis
     Dosage: 200 MG, Q12H
     Route: 065
  679. CARBAMAZEPINE [Suspect]
     Active Substance: CARBAMAZEPINE
     Indication: Fibromyalgia
     Dosage: 200 MG, BID
     Route: 065
  680. CARBAMAZEPINE [Suspect]
     Active Substance: CARBAMAZEPINE
     Indication: Seizure
     Dosage: 200 MG
     Route: 065
  681. CARBAMAZEPINE [Suspect]
     Active Substance: CARBAMAZEPINE
     Dosage: UNK
     Route: 065
  682. CARBAMAZEPINE [Suspect]
     Active Substance: CARBAMAZEPINE
     Dosage: 100 MG
     Route: 065
  683. CARBAMAZEPINE [Suspect]
     Active Substance: CARBAMAZEPINE
     Dosage: UNK
     Route: 065
  684. CARBAMAZEPINE [Suspect]
     Active Substance: CARBAMAZEPINE
     Dosage: 400 MG, QD
     Route: 065
  685. CARBAMAZEPINE [Suspect]
     Active Substance: CARBAMAZEPINE
     Dosage: 200 MG, BID
     Route: 065
  686. CARBAMAZEPINE [Suspect]
     Active Substance: CARBAMAZEPINE
     Dosage: 400 MG, QD
     Route: 065
  687. CARBAMAZEPINE [Suspect]
     Active Substance: CARBAMAZEPINE
     Dosage: 2 DOSAGE FORM, DAILY
     Route: 065
  688. PHENOLPHTHALEIN [Suspect]
     Active Substance: PHENOLPHTHALEIN
     Indication: Pain
     Route: 065
  689. PERSANTINE [Suspect]
     Active Substance: DIPYRIDAMOLE
     Indication: Cerebrovascular accident
     Dosage: 25 DF, QD
     Route: 065
  690. PERSANTINE [Suspect]
     Active Substance: DIPYRIDAMOLE
     Dosage: 1 DF, Q12H
     Route: 065
  691. PERSANTINE [Suspect]
     Active Substance: DIPYRIDAMOLE
     Dosage: 1 DF, QD
     Route: 065
  692. PERSANTINE [Suspect]
     Active Substance: DIPYRIDAMOLE
     Dosage: 1 DF
     Route: 065
  693. PERSANTINE [Suspect]
     Active Substance: DIPYRIDAMOLE
     Dosage: 2 DF
     Route: 065
  694. PERSANTINE [Suspect]
     Active Substance: DIPYRIDAMOLE
     Dosage: 1 DF, Q12H
     Route: 065
  695. PERSANTINE [Suspect]
     Active Substance: DIPYRIDAMOLE
     Dosage: 2 DF, QD
     Route: 065
  696. PERSANTINE [Suspect]
     Active Substance: DIPYRIDAMOLE
     Dosage: 1 DF, QD
     Route: 065
  697. PERSANTINE [Suspect]
     Active Substance: DIPYRIDAMOLE
     Dosage: 0.5 MG
     Route: 065
  698. PERSANTINE [Suspect]
     Active Substance: DIPYRIDAMOLE
     Dosage: 1 DF
     Route: 065
  699. SPIRIVA [Suspect]
     Active Substance: TIOTROPIUM BROMIDE MONOHYDRATE
     Indication: Asthma
     Dosage: 18 UG, QD
     Route: 065
  700. SPIRIVA [Suspect]
     Active Substance: TIOTROPIUM BROMIDE MONOHYDRATE
     Indication: Chronic obstructive pulmonary disease
     Dosage: 1 DF, QD
     Route: 065
  701. SPIRIVA [Suspect]
     Active Substance: TIOTROPIUM BROMIDE MONOHYDRATE
     Dosage: UNK
     Route: 065
  702. SPIRIVA [Suspect]
     Active Substance: TIOTROPIUM BROMIDE MONOHYDRATE
     Dosage: 18 UG, QD
     Route: 065
  703. SPIRIVA [Suspect]
     Active Substance: TIOTROPIUM BROMIDE MONOHYDRATE
     Dosage: 18 MG, QD
     Route: 065
  704. SPIRIVA [Suspect]
     Active Substance: TIOTROPIUM BROMIDE MONOHYDRATE
     Dosage: 18 UG, QD
     Route: 065
  705. SPIRIVA [Suspect]
     Active Substance: TIOTROPIUM BROMIDE MONOHYDRATE
     Dosage: UNK
     Route: 065
  706. SPIRIVA [Suspect]
     Active Substance: TIOTROPIUM BROMIDE MONOHYDRATE
     Dosage: 18 UG, QD
     Route: 065
  707. SPIRIVA [Suspect]
     Active Substance: TIOTROPIUM BROMIDE MONOHYDRATE
     Dosage: 18 UG, QD
     Route: 065
  708. SPIRIVA [Suspect]
     Active Substance: TIOTROPIUM BROMIDE MONOHYDRATE
     Dosage: 18 UG, QD
     Route: 065
  709. SPIRIVA [Suspect]
     Active Substance: TIOTROPIUM BROMIDE MONOHYDRATE
     Dosage: UNK
     Route: 065
  710. SPIRIVA [Suspect]
     Active Substance: TIOTROPIUM BROMIDE MONOHYDRATE
     Dosage: UNK
     Route: 065
  711. SPIRIVA [Suspect]
     Active Substance: TIOTROPIUM BROMIDE MONOHYDRATE
     Dosage: UNK
     Route: 065
  712. SPIRIVA [Suspect]
     Active Substance: TIOTROPIUM BROMIDE MONOHYDRATE
     Dosage: UNK
     Route: 065
  713. SPIRIVA [Suspect]
     Active Substance: TIOTROPIUM BROMIDE MONOHYDRATE
     Dosage: UNK
     Route: 065
  714. SPIRIVA [Suspect]
     Active Substance: TIOTROPIUM BROMIDE MONOHYDRATE
     Dosage: 18 UG, QD
     Route: 065
  715. SPIRIVA [Suspect]
     Active Substance: TIOTROPIUM BROMIDE MONOHYDRATE
     Dosage: 18 UG, QD
     Route: 065
  716. SPIRIVA [Suspect]
     Active Substance: TIOTROPIUM BROMIDE MONOHYDRATE
     Dosage: 18 UG, QD
     Route: 065
  717. SPIRIVA [Suspect]
     Active Substance: TIOTROPIUM BROMIDE MONOHYDRATE
     Dosage: 18 UG, QD
     Route: 065
  718. SPIRIVA [Suspect]
     Active Substance: TIOTROPIUM BROMIDE MONOHYDRATE
     Dosage: 18 UG, QD
     Route: 065
  719. SPIRIVA [Suspect]
     Active Substance: TIOTROPIUM BROMIDE MONOHYDRATE
     Dosage: 18 UG, QD
     Route: 065
  720. SPIRIVA [Suspect]
     Active Substance: TIOTROPIUM BROMIDE MONOHYDRATE
     Dosage: 18 UG, QD
     Route: 065
  721. SPIRIVA [Suspect]
     Active Substance: TIOTROPIUM BROMIDE MONOHYDRATE
     Dosage: 18 UG, QD
     Route: 065
  722. NITROGLYCERIN [Suspect]
     Active Substance: NITROGLYCERIN
     Indication: Coronary artery disease
     Dosage: 0.4 MG, QD
     Route: 065
  723. NITROGLYCERIN [Suspect]
     Active Substance: NITROGLYCERIN
     Indication: Chest pain
     Dosage: 1 DF, QD
     Route: 065
  724. NITROGLYCERIN [Suspect]
     Active Substance: NITROGLYCERIN
     Indication: Angina pectoris
     Dosage: 0.6 MG, QD
     Route: 061
  725. NITROGLYCERIN [Suspect]
     Active Substance: NITROGLYCERIN
     Indication: Hypertension
     Dosage: UNK
     Route: 065
  726. NITROGLYCERIN [Suspect]
     Active Substance: NITROGLYCERIN
     Dosage: 0.6 MG
     Route: 061
  727. NITROGLYCERIN [Suspect]
     Active Substance: NITROGLYCERIN
     Dosage: 4 MG
     Route: 061
  728. NITROGLYCERIN [Suspect]
     Active Substance: NITROGLYCERIN
     Dosage: 6 MG, QD
     Route: 061
  729. NITROGLYCERIN [Suspect]
     Active Substance: NITROGLYCERIN
     Dosage: 6.0 MG, QD
     Route: 061
  730. NITROGLYCERIN [Suspect]
     Active Substance: NITROGLYCERIN
     Dosage: UNK
     Route: 061
  731. NITROGLYCERIN [Suspect]
     Active Substance: NITROGLYCERIN
     Dosage: 0.4 MG, QD
     Route: 065
  732. NITROGLYCERIN [Suspect]
     Active Substance: NITROGLYCERIN
     Dosage: 0.6 MG, QD
     Route: 065
  733. NITROGLYCERIN [Suspect]
     Active Substance: NITROGLYCERIN
     Dosage: 0.6 MG
     Route: 061
  734. NITROGLYCERIN [Suspect]
     Active Substance: NITROGLYCERIN
     Dosage: 6 MG, QD
     Route: 061
  735. NITROGLYCERIN [Suspect]
     Active Substance: NITROGLYCERIN
     Dosage: 0.4 MG
     Route: 065
  736. NITROGLYCERIN [Suspect]
     Active Substance: NITROGLYCERIN
     Dosage: 0.6 MG
     Route: 065
  737. NITROGLYCERIN [Suspect]
     Active Substance: NITROGLYCERIN
     Dosage: UNK
     Route: 065
  738. NITROGLYCERIN [Suspect]
     Active Substance: NITROGLYCERIN
     Dosage: 1 DF, QD
     Route: 065
  739. NITROGLYCERIN [Suspect]
     Active Substance: NITROGLYCERIN
     Dosage: 0.4 MG, QD
     Route: 065
  740. NITROGLYCERIN [Suspect]
     Active Substance: NITROGLYCERIN
     Dosage: 0.6 MG, QD
     Route: 065
  741. NITROGLYCERIN [Suspect]
     Active Substance: NITROGLYCERIN
     Dosage: 0.4 MG, QD
     Route: 065
  742. NITROGLYCERIN [Suspect]
     Active Substance: NITROGLYCERIN
     Dosage: 0.4 MG, QD
     Route: 065
  743. NITROGLYCERIN [Suspect]
     Active Substance: NITROGLYCERIN
     Dosage: 0.4 MG, QD
     Route: 065
  744. NITROGLYCERIN [Suspect]
     Active Substance: NITROGLYCERIN
     Dosage: 0.6 MG, QD
     Route: 065
  745. NITROGLYCERIN [Suspect]
     Active Substance: NITROGLYCERIN
     Dosage: 0.6 MG, QD
     Route: 065
  746. NITROGLYCERIN [Suspect]
     Active Substance: NITROGLYCERIN
     Dosage: 1 DF, QD
     Route: 065
  747. NITROGLYCERIN [Suspect]
     Active Substance: NITROGLYCERIN
     Dosage: 1 DF, QD
     Route: 065
  748. NITROGLYCERIN [Suspect]
     Active Substance: NITROGLYCERIN
     Dosage: 1 DF, QD
     Route: 065
  749. NITROGLYCERIN [Suspect]
     Active Substance: NITROGLYCERIN
     Dosage: UNK
     Route: 065
  750. NITROGLYCERIN [Suspect]
     Active Substance: NITROGLYCERIN
     Dosage: UNK
     Route: 065
  751. NITROGLYCERIN [Suspect]
     Active Substance: NITROGLYCERIN
     Dosage: UNK
     Route: 065
  752. NITROGLYCERIN [Suspect]
     Active Substance: NITROGLYCERIN
     Dosage: 1 DF, QD
     Route: 065
  753. NITROGLYCERIN [Suspect]
     Active Substance: NITROGLYCERIN
     Dosage: 0.6 MG, QD
     Route: 065
  754. BISACODYL [Suspect]
     Active Substance: BISACODYL
     Indication: Constipation
     Dosage: 2 DF, QD
     Route: 065
  755. BISACODYL [Suspect]
     Active Substance: BISACODYL
     Dosage: 1 DF, QD
     Route: 065
  756. BISACODYL [Suspect]
     Active Substance: BISACODYL
     Dosage: 2 DF
     Route: 065
  757. BISACODYL [Suspect]
     Active Substance: BISACODYL
     Dosage: UNK
     Route: 065
  758. BISACODYL [Suspect]
     Active Substance: BISACODYL
     Dosage: 1 DF, QD
     Route: 065
  759. BISACODYL [Suspect]
     Active Substance: BISACODYL
     Dosage: 2 DF, QD
     Route: 065
  760. BISACODYL [Suspect]
     Active Substance: BISACODYL
     Dosage: 2 DF
     Route: 065
  761. BISACODYL [Suspect]
     Active Substance: BISACODYL
     Dosage: 2 DF
     Route: 065
  762. LEVOFLOXACIN HEMIHYDRATE [Suspect]
     Active Substance: LEVOFLOXACIN
     Indication: Urinary tract infection
     Dosage: UNK
     Route: 065
  763. LEVOFLOXACIN HEMIHYDRATE [Suspect]
     Active Substance: LEVOFLOXACIN
     Dosage: 200 MG, QD
     Route: 065
  764. POLYSORBATE 85 [Suspect]
     Active Substance: POLYSORBATE 85
     Indication: Insomnia
     Dosage: UNK
     Route: 065
  765. POLYSORBATE 85 [Suspect]
     Active Substance: POLYSORBATE 85
     Dosage: UNK
     Route: 065
  766. ACETAMINOPHEN [Suspect]
     Active Substance: ACETAMINOPHEN
     Indication: Pain
     Dosage: 650 MG, Q6H; ELIXIR
     Route: 065
  767. ACETAMINOPHEN [Suspect]
     Active Substance: ACETAMINOPHEN
     Indication: Fibromyalgia
     Dosage: 650 MG, PRN; ELIXIR
     Route: 065
  768. ACETAMINOPHEN [Suspect]
     Active Substance: ACETAMINOPHEN
     Indication: Angina pectoris
     Dosage: 650 MG UNK
     Route: 065
  769. ACETAMINOPHEN [Suspect]
     Active Substance: ACETAMINOPHEN
     Indication: Radioactive iodine therapy
     Dosage: 650 MG, DAILY
     Route: 065
  770. ACETAMINOPHEN [Suspect]
     Active Substance: ACETAMINOPHEN
     Dosage: 50 MILLIGRAM, DAILY
     Route: 065
  771. ORAMORPH SR SUSTAINED RELEASE [Suspect]
     Active Substance: MORPHINE SULFATE
     Indication: Fibromyalgia
     Dosage: 10 MG, QD
     Route: 065
  772. ORAMORPH SR SUSTAINED RELEASE [Suspect]
     Active Substance: MORPHINE SULFATE
     Indication: Pain
     Dosage: 100 MG, QD
     Route: 065
  773. AMITRIPTYLINE [Suspect]
     Active Substance: AMITRIPTYLINE
     Indication: Insomnia
     Dosage: UNK
     Route: 065
  774. AMITRIPTYLINE [Suspect]
     Active Substance: AMITRIPTYLINE
     Indication: Angina pectoris
     Dosage: UNK
     Route: 065
  775. AMITRIPTYLINE [Suspect]
     Active Substance: AMITRIPTYLINE
     Indication: Duodenal ulcer
     Dosage: UNK
     Route: 065
  776. AMITRIPTYLINE [Suspect]
     Active Substance: AMITRIPTYLINE
     Indication: Arthritis
     Dosage: 75 MG, QD
     Route: 065
  777. AMITRIPTYLINE [Suspect]
     Active Substance: AMITRIPTYLINE
     Indication: Thyroid disorder
     Dosage: 50 MG, QD
     Route: 065
  778. AMITRIPTYLINE [Suspect]
     Active Substance: AMITRIPTYLINE
     Indication: Radioactive iodine therapy
     Dosage: UNK
     Route: 065
  779. AMITRIPTYLINE [Suspect]
     Active Substance: AMITRIPTYLINE
     Indication: Prophylaxis
     Dosage: UNK
     Route: 065
  780. AMITRIPTYLINE [Suspect]
     Active Substance: AMITRIPTYLINE
     Indication: Pain
     Dosage: UNK
     Route: 065
  781. AMITRIPTYLINE [Suspect]
     Active Substance: AMITRIPTYLINE
     Indication: Oedema
     Dosage: UNK
     Route: 065
  782. AMITRIPTYLINE [Suspect]
     Active Substance: AMITRIPTYLINE
     Indication: Hypertension
     Dosage: UNK
     Route: 065
  783. AMITRIPTYLINE [Suspect]
     Active Substance: AMITRIPTYLINE
     Indication: Fibromyalgia
     Dosage: UNK
     Route: 065
  784. AMITRIPTYLINE [Suspect]
     Active Substance: AMITRIPTYLINE
     Indication: Dementia
     Dosage: 50 MG, QD
     Route: 065
  785. AMITRIPTYLINE [Suspect]
     Active Substance: AMITRIPTYLINE
     Indication: Coronary artery disease
     Dosage: UNK
     Route: 048
  786. AMITRIPTYLINE [Suspect]
     Active Substance: AMITRIPTYLINE
     Indication: Constipation
     Dosage: UNK
     Route: 048
  787. AMITRIPTYLINE [Suspect]
     Active Substance: AMITRIPTYLINE
     Indication: Chest pain
     Dosage: UNK
     Route: 048
  788. AMITRIPTYLINE [Suspect]
     Active Substance: AMITRIPTYLINE
     Dosage: UNK
     Route: 048
  789. AMITRIPTYLINE [Suspect]
     Active Substance: AMITRIPTYLINE
     Dosage: UNK
     Route: 065
  790. AMITRIPTYLINE [Suspect]
     Active Substance: AMITRIPTYLINE
     Dosage: UNK
     Route: 065
  791. AMITRIPTYLINE [Suspect]
     Active Substance: AMITRIPTYLINE
     Dosage: UNK
     Route: 065
  792. AMITRIPTYLINE [Suspect]
     Active Substance: AMITRIPTYLINE
     Dosage: UNK
     Route: 065
  793. AMITRIPTYLINE [Suspect]
     Active Substance: AMITRIPTYLINE
     Dosage: UNK
     Route: 065
  794. AMITRIPTYLINE [Suspect]
     Active Substance: AMITRIPTYLINE
     Dosage: UNK
     Route: 065
  795. AMITRIPTYLINE [Suspect]
     Active Substance: AMITRIPTYLINE
     Dosage: UNK
     Route: 065
  796. AMITRIPTYLINE [Suspect]
     Active Substance: AMITRIPTYLINE
     Dosage: UNK
     Route: 065
  797. AMITRIPTYLINE [Suspect]
     Active Substance: AMITRIPTYLINE
     Dosage: 50 MG, QD
     Route: 065
  798. AMITRIPTYLINE [Suspect]
     Active Substance: AMITRIPTYLINE
     Dosage: 50 MG, QD
     Route: 065
  799. AMITRIPTYLINE [Suspect]
     Active Substance: AMITRIPTYLINE
     Dosage: 50 MG, QD
     Route: 065
  800. AMITRIPTYLINE [Suspect]
     Active Substance: AMITRIPTYLINE
     Dosage: 50 MG, QD
     Route: 065
  801. AMITRIPTYLINE [Suspect]
     Active Substance: AMITRIPTYLINE
     Dosage: 50 MG, QD
     Route: 065
  802. AMITRIPTYLINE [Suspect]
     Active Substance: AMITRIPTYLINE
     Dosage: 50 MG, QD
     Route: 065
  803. AMITRIPTYLINE [Suspect]
     Active Substance: AMITRIPTYLINE
     Dosage: UNK
     Route: 048
  804. AMITRIPTYLINE [Suspect]
     Active Substance: AMITRIPTYLINE
     Dosage: UNK
     Route: 048
  805. AMITRIPTYLINE [Suspect]
     Active Substance: AMITRIPTYLINE
     Dosage: UNK
     Route: 048
  806. AMITRIPTYLINE [Suspect]
     Active Substance: AMITRIPTYLINE
     Dosage: UNK
     Route: 048
  807. AMITRIPTYLINE [Suspect]
     Active Substance: AMITRIPTYLINE
     Dosage: 75 MG, QD
     Route: 065
  808. AMITRIPTYLINE [Suspect]
     Active Substance: AMITRIPTYLINE
     Dosage: UNK
     Route: 065
  809. AMITRIPTYLINE [Suspect]
     Active Substance: AMITRIPTYLINE
     Dosage: UNK
     Route: 065
  810. AMITRIPTYLINE [Suspect]
     Active Substance: AMITRIPTYLINE
     Dosage: UNK
     Route: 065
  811. AMITRIPTYLINE [Suspect]
     Active Substance: AMITRIPTYLINE
     Dosage: UNK
     Route: 065
  812. AMITRIPTYLINE [Suspect]
     Active Substance: AMITRIPTYLINE
     Dosage: UNK
     Route: 065
  813. AMITRIPTYLINE [Suspect]
     Active Substance: AMITRIPTYLINE
     Dosage: 75 MG, QD
     Route: 065
  814. AMITRIPTYLINE [Suspect]
     Active Substance: AMITRIPTYLINE
     Dosage: 75 MG, QD
     Route: 065
  815. AMITRIPTYLINE [Suspect]
     Active Substance: AMITRIPTYLINE
     Dosage: 75 MG, QD
     Route: 065
  816. AMITRIPTYLINE [Suspect]
     Active Substance: AMITRIPTYLINE
     Dosage: 75 MG, QD
     Route: 065
  817. AMITRIPTYLINE [Suspect]
     Active Substance: AMITRIPTYLINE
     Dosage: 50 MG, QD
     Route: 065
  818. AMITRIPTYLINE [Suspect]
     Active Substance: AMITRIPTYLINE
     Dosage: 50 MG, QD
     Route: 065
  819. AMITRIPTYLINE [Suspect]
     Active Substance: AMITRIPTYLINE
     Dosage: 50 MG, QD
     Route: 065
  820. AMITRIPTYLINE [Suspect]
     Active Substance: AMITRIPTYLINE
     Dosage: 75 MG, QD
     Route: 065
  821. AMITRIPTYLINE [Suspect]
     Active Substance: AMITRIPTYLINE
     Dosage: 75 MG, QD
     Route: 065
  822. HYDROCHLOROTHIAZIDE\QUINAPRIL HYDROCHLORIDE [Suspect]
     Active Substance: HYDROCHLOROTHIAZIDE\QUINAPRIL HYDROCHLORIDE
     Indication: Pain
     Dosage: 40 MG, QD
     Route: 065
  823. HYDROCHLOROTHIAZIDE\QUINAPRIL HYDROCHLORIDE [Suspect]
     Active Substance: HYDROCHLOROTHIAZIDE\QUINAPRIL HYDROCHLORIDE
     Indication: Coronary artery disease
     Dosage: 40 MG, QD
     Route: 065
  824. HYDROCHLOROTHIAZIDE\QUINAPRIL HYDROCHLORIDE [Suspect]
     Active Substance: HYDROCHLOROTHIAZIDE\QUINAPRIL HYDROCHLORIDE
     Indication: Hypertension
     Dosage: 20 MG, QD
     Route: 065
  825. HYDROCHLOROTHIAZIDE\QUINAPRIL HYDROCHLORIDE [Suspect]
     Active Substance: HYDROCHLOROTHIAZIDE\QUINAPRIL HYDROCHLORIDE
     Dosage: 20 MG, QD
     Route: 065
  826. GALANTAMINE [Suspect]
     Active Substance: GALANTAMINE
     Indication: Dementia
     Route: 065
  827. GALANTAMINE [Suspect]
     Active Substance: GALANTAMINE
     Dosage: 16 MG, QD
     Route: 065
  828. GALANTAMINE [Suspect]
     Active Substance: GALANTAMINE
     Dosage: 18 MG, QD
     Route: 065
  829. GALANTAMINE [Suspect]
     Active Substance: GALANTAMINE
     Dosage: UNK
     Route: 065
  830. GALANTAMINE [Suspect]
     Active Substance: GALANTAMINE
     Dosage: 16 MG
     Route: 065
  831. GALANTAMINE [Suspect]
     Active Substance: GALANTAMINE
     Dosage: 16 MG, QD
     Route: 065
  832. ASPIRIN [Suspect]
     Active Substance: ASPIRIN
     Indication: Hypertension
     Route: 065
  833. ASPIRIN [Suspect]
     Active Substance: ASPIRIN
     Indication: Coronary artery disease
     Dosage: 1 DF, Q12H
     Route: 065
  834. ASPIRIN [Suspect]
     Active Substance: ASPIRIN
     Indication: Cerebrovascular accident
     Dosage: UNK
     Route: 065
  835. ASPIRIN [Suspect]
     Active Substance: ASPIRIN
     Indication: Angina pectoris
     Dosage: UNK
     Route: 065
  836. ASPIRIN [Suspect]
     Active Substance: ASPIRIN
     Dosage: UNK
     Route: 065
  837. ASPIRIN [Suspect]
     Active Substance: ASPIRIN
     Dosage: UNK
     Route: 065
  838. ASPIRIN [Suspect]
     Active Substance: ASPIRIN
     Dosage: UNK
     Route: 065
  839. CRANBERRY [Suspect]
     Active Substance: CRANBERRY
     Indication: Bladder disorder
     Dosage: 500 MG, Q8H
     Route: 065
  840. CRANBERRY [Suspect]
     Active Substance: CRANBERRY
     Indication: Balance disorder
     Dosage: 500 MG, Q8H
     Route: 065
  841. CRANBERRY [Suspect]
     Active Substance: CRANBERRY
     Dosage: 500 MG, TID
     Route: 065
  842. CRANBERRY [Suspect]
     Active Substance: CRANBERRY
     Dosage: 500 MG
     Route: 065
  843. CRANBERRY [Suspect]
     Active Substance: CRANBERRY
     Dosage: UNK
     Route: 065
  844. CRANBERRY [Suspect]
     Active Substance: CRANBERRY
     Dosage: 500 MG, QD
     Route: 065
  845. CRANBERRY [Suspect]
     Active Substance: CRANBERRY
     Dosage: 1600 MG, TID
     Route: 065
  846. CRANBERRY [Suspect]
     Active Substance: CRANBERRY
     Dosage: 500 MG, QD
     Route: 065
  847. CRANBERRY [Suspect]
     Active Substance: CRANBERRY
     Dosage: 500 MG, TID
     Route: 065
  848. CRANBERRY [Suspect]
     Active Substance: CRANBERRY
     Dosage: UNK
     Route: 065
  849. CRANBERRY [Suspect]
     Active Substance: CRANBERRY
     Dosage: 500 MG, TID
     Route: 065
  850. CRANBERRY [Suspect]
     Active Substance: CRANBERRY
     Dosage: 500 MG, TID
     Route: 065
  851. CRANBERRY [Suspect]
     Active Substance: CRANBERRY
     Dosage: 500 MG, TID
     Route: 065
  852. CRANBERRY [Suspect]
     Active Substance: CRANBERRY
     Dosage: 1500 MG, TID
     Route: 065
  853. CRANBERRY [Suspect]
     Active Substance: CRANBERRY
     Dosage: 500 MG, TID
     Route: 065
  854. CRANBERRY [Suspect]
     Active Substance: CRANBERRY
     Dosage: 500 MG, TID
     Route: 065
  855. CRANBERRY [Suspect]
     Active Substance: CRANBERRY
     Dosage: UNK
     Route: 065
  856. CRANBERRY [Suspect]
     Active Substance: CRANBERRY
     Dosage: UNK
     Route: 065
  857. CYCLOBENZAPRINE HYDROCHLORIDE [Suspect]
     Active Substance: CYCLOBENZAPRINE HYDROCHLORIDE
     Indication: Pain
     Dosage: 15 MG, Q8H
     Route: 065
  858. CYCLOBENZAPRINE HYDROCHLORIDE [Suspect]
     Active Substance: CYCLOBENZAPRINE HYDROCHLORIDE
     Indication: Fibromyalgia
     Dosage: 200 MG, Q12H
     Route: 065
  859. CYCLOBENZAPRINE HYDROCHLORIDE [Suspect]
     Active Substance: CYCLOBENZAPRINE HYDROCHLORIDE
     Dosage: UNK
     Route: 048
  860. CYCLOBENZAPRINE HYDROCHLORIDE [Suspect]
     Active Substance: CYCLOBENZAPRINE HYDROCHLORIDE
     Dosage: 1.8 MG, QD
     Route: 065
  861. CYCLOBENZAPRINE HYDROCHLORIDE [Suspect]
     Active Substance: CYCLOBENZAPRINE HYDROCHLORIDE
     Dosage: 5 MG, QD
     Route: 065
  862. CYCLOBENZAPRINE HYDROCHLORIDE [Suspect]
     Active Substance: CYCLOBENZAPRINE HYDROCHLORIDE
     Dosage: 5 MG
     Route: 065
  863. CYCLOBENZAPRINE HYDROCHLORIDE [Suspect]
     Active Substance: CYCLOBENZAPRINE HYDROCHLORIDE
     Dosage: 5 MG
     Route: 065
  864. CYCLOBENZAPRINE HYDROCHLORIDE [Suspect]
     Active Substance: CYCLOBENZAPRINE HYDROCHLORIDE
     Dosage: 5 MG, Q8H
     Route: 065
  865. CYCLOBENZAPRINE HYDROCHLORIDE [Suspect]
     Active Substance: CYCLOBENZAPRINE HYDROCHLORIDE
     Dosage: 1.87 MG
     Route: 065
  866. CYCLOBENZAPRINE HYDROCHLORIDE [Suspect]
     Active Substance: CYCLOBENZAPRINE HYDROCHLORIDE
     Dosage: 100 MG, Q12H
     Route: 065
  867. CYCLOBENZAPRINE HYDROCHLORIDE [Suspect]
     Active Substance: CYCLOBENZAPRINE HYDROCHLORIDE
     Dosage: 500 MG, Q8H
     Route: 065
  868. CYCLOBENZAPRINE HYDROCHLORIDE [Suspect]
     Active Substance: CYCLOBENZAPRINE HYDROCHLORIDE
     Dosage: 200 MG, Q12H
     Route: 065
  869. CYCLOBENZAPRINE HYDROCHLORIDE [Suspect]
     Active Substance: CYCLOBENZAPRINE HYDROCHLORIDE
     Dosage: 15 MG, QD
     Route: 065
  870. CYCLOBENZAPRINE HYDROCHLORIDE [Suspect]
     Active Substance: CYCLOBENZAPRINE HYDROCHLORIDE
     Dosage: 2.0 MG, QD
     Route: 065
  871. CYCLOBENZAPRINE HYDROCHLORIDE [Suspect]
     Active Substance: CYCLOBENZAPRINE HYDROCHLORIDE
     Dosage: 5.0 MG, Q12H
     Route: 065
  872. CYCLOBENZAPRINE HYDROCHLORIDE [Suspect]
     Active Substance: CYCLOBENZAPRINE HYDROCHLORIDE
     Dosage: 5.0 MG, Q12H
     Route: 065
  873. DILTIAZEM [Suspect]
     Active Substance: DILTIAZEM
     Indication: Hypertension
     Dosage: 360 MG, QD
     Route: 065
  874. DILTIAZEM [Suspect]
     Active Substance: DILTIAZEM
     Indication: Coronary artery disease
     Dosage: UNK
     Route: 065
  875. DILTIAZEM [Suspect]
     Active Substance: DILTIAZEM
     Indication: Chest pain
     Dosage: 360 MG, QD
     Route: 065
  876. DILTIAZEM [Suspect]
     Active Substance: DILTIAZEM
     Indication: Angina pectoris
     Dosage: 360 MG, QD
     Route: 065
  877. DILTIAZEM [Suspect]
     Active Substance: DILTIAZEM
     Indication: Angina unstable
     Dosage: UNK
     Route: 065
  878. DILTIAZEM [Suspect]
     Active Substance: DILTIAZEM
     Dosage: UNK
     Route: 065
  879. DILTIAZEM [Suspect]
     Active Substance: DILTIAZEM
     Dosage: 360 MG, QD
     Route: 065
  880. DILTIAZEM [Suspect]
     Active Substance: DILTIAZEM
     Dosage: 360 MG, QD
     Route: 065
  881. DILTIAZEM [Suspect]
     Active Substance: DILTIAZEM
     Dosage: 360 MG, QD
     Route: 065
  882. DILTIAZEM [Suspect]
     Active Substance: DILTIAZEM
     Dosage: UNK
     Route: 065
  883. DILTIAZEM [Suspect]
     Active Substance: DILTIAZEM
     Dosage: UNK
     Route: 065
  884. DILTIAZEM [Suspect]
     Active Substance: DILTIAZEM
     Dosage: 360 MG, QD
     Route: 065
  885. DILTIAZEM [Suspect]
     Active Substance: DILTIAZEM
     Dosage: 15 MG, QD
     Route: 065
  886. DILTIAZEM [Suspect]
     Active Substance: DILTIAZEM
     Dosage: 360 MG, QD
     Route: 065
  887. DILTIAZEM [Suspect]
     Active Substance: DILTIAZEM
     Dosage: UNK
     Route: 065
  888. DILTIAZEM [Suspect]
     Active Substance: DILTIAZEM
     Dosage: 360 MG, QD
     Route: 065
  889. DILTIAZEM [Suspect]
     Active Substance: DILTIAZEM
     Dosage: UNK
     Route: 065
  890. DILTIAZEM [Suspect]
     Active Substance: DILTIAZEM
     Dosage: UNK
     Route: 065
  891. CRESTOR [Suspect]
     Active Substance: ROSUVASTATIN CALCIUM
     Indication: Cerebrovascular accident
     Dosage: 40 MG
     Route: 065
  892. SALICYLAMIDE [Suspect]
     Active Substance: SALICYLAMIDE
     Indication: Pain
     Route: 065
  893. OXAZEPAM [Suspect]
     Active Substance: OXAZEPAM
     Indication: Hypertension
     Dosage: 15 MG, QD
     Route: 065
  894. OXAZEPAM [Suspect]
     Active Substance: OXAZEPAM
     Indication: Coronary artery disease
     Dosage: UNK
     Route: 065
  895. OXAZEPAM [Suspect]
     Active Substance: OXAZEPAM
     Indication: Insomnia
     Dosage: UNK
     Route: 065
  896. OXAZEPAM [Suspect]
     Active Substance: OXAZEPAM
     Dosage: 15 MG, QD
     Route: 065
  897. OXAZEPAM [Suspect]
     Active Substance: OXAZEPAM
     Dosage: 15 MG, QD
     Route: 065
  898. OXAZEPAM [Suspect]
     Active Substance: OXAZEPAM
     Dosage: 15 MG, QD
     Route: 065
  899. OXAZEPAM [Suspect]
     Active Substance: OXAZEPAM
     Dosage: UNK
     Route: 065
  900. OXAZEPAM [Suspect]
     Active Substance: OXAZEPAM
     Dosage: 15 MG, QD
     Route: 065
  901. OXAZEPAM [Suspect]
     Active Substance: OXAZEPAM
     Dosage: 15 MG, QD
     Route: 065
  902. OXAZEPAM [Suspect]
     Active Substance: OXAZEPAM
     Dosage: 360 MG, QD
     Route: 065
  903. GLUCOSAMINE SULFATE [Suspect]
     Active Substance: GLUCOSAMINE SULFATE
     Indication: Pain
     Dosage: 500 MG,1 EVERY 2 DAYS
     Route: 065
  904. GLUCOSAMINE SULFATE [Suspect]
     Active Substance: GLUCOSAMINE SULFATE
     Indication: Arthritis
     Dosage: 500 MILLIGRAM, DAILY
     Route: 065
  905. GLUCOSAMINE SULFATE [Suspect]
     Active Substance: GLUCOSAMINE SULFATE
     Dosage: 500 MG, BID
     Route: 065
  906. GLUCOSAMINE SULFATE [Suspect]
     Active Substance: GLUCOSAMINE SULFATE
     Dosage: 500 MILLIGRAM, CYCLICAL
     Route: 065
  907. GLUCOSAMINE SULFATE [Suspect]
     Active Substance: GLUCOSAMINE SULFATE
     Dosage: 500 MG
     Route: 065
  908. GLUCOSAMINE SULFATE [Suspect]
     Active Substance: GLUCOSAMINE SULFATE
     Dosage: 500 MG, QD
     Route: 065
  909. GLUCOSAMINE SULFATE [Suspect]
     Active Substance: GLUCOSAMINE SULFATE
     Dosage: UNK
     Route: 065
  910. GLUCOSAMINE SULFATE [Suspect]
     Active Substance: GLUCOSAMINE SULFATE
     Dosage: UNK
     Route: 065
  911. GLUCOSAMINE SULFATE [Suspect]
     Active Substance: GLUCOSAMINE SULFATE
     Dosage: UNK
     Route: 065
  912. GLUCOSAMINE SULFATE [Suspect]
     Active Substance: GLUCOSAMINE SULFATE
     Dosage: 500 MG, BID
     Route: 065
  913. GLUCOSAMINE SULFATE [Suspect]
     Active Substance: GLUCOSAMINE SULFATE
     Dosage: 500 MG, BID
     Route: 065
  914. ALBUTEROL [Suspect]
     Active Substance: ALBUTEROL
     Indication: Chest pain
     Dosage: 400 MG, QD
     Route: 065
  915. ALBUTEROL [Suspect]
     Active Substance: ALBUTEROL
     Indication: Hypertension
     Dosage: 400 MG, Q6H
     Route: 065
  916. ALBUTEROL [Suspect]
     Active Substance: ALBUTEROL
     Indication: Coronary artery disease
     Dosage: 100 MG
     Route: 065
  917. ALBUTEROL [Suspect]
     Active Substance: ALBUTEROL
     Indication: Angina pectoris
     Dosage: UNK
     Route: 065
  918. ALBUTEROL [Suspect]
     Active Substance: ALBUTEROL
     Indication: Chronic obstructive pulmonary disease
     Dosage: 100 MG, QD
     Route: 065
  919. ALBUTEROL [Suspect]
     Active Substance: ALBUTEROL
     Indication: Constipation
     Dosage: 100 UG, QD
     Route: 065
  920. ALBUTEROL [Suspect]
     Active Substance: ALBUTEROL
     Dosage: 100 UG, QD
     Route: 065
  921. ALBUTEROL [Suspect]
     Active Substance: ALBUTEROL
     Dosage: 400 UG, QID
     Route: 065
  922. ALBUTEROL [Suspect]
     Active Substance: ALBUTEROL
     Dosage: 800 MG, QD
     Route: 065
  923. ALBUTEROL [Suspect]
     Active Substance: ALBUTEROL
     Dosage: 100 MG, QD
     Route: 065
  924. ALBUTEROL [Suspect]
     Active Substance: ALBUTEROL
     Dosage: UNK
     Route: 065
  925. ALBUTEROL [Suspect]
     Active Substance: ALBUTEROL
     Dosage: UNK (TABLET); UNKNOWN
     Route: 065
  926. ALBUTEROL [Suspect]
     Active Substance: ALBUTEROL
     Dosage: UNK
     Route: 055
  927. ALBUTEROL [Suspect]
     Active Substance: ALBUTEROL
     Dosage: UNK (TABLET); UNKNOWN
     Route: 065
  928. ALBUTEROL [Suspect]
     Active Substance: ALBUTEROL
     Dosage: 100 UG, QD
     Route: 065
  929. ALBUTEROL [Suspect]
     Active Substance: ALBUTEROL
     Dosage: 100 MG, QD
     Route: 065
  930. ALBUTEROL [Suspect]
     Active Substance: ALBUTEROL
     Dosage: 200 MG, QID
     Route: 065
  931. ALBUTEROL [Suspect]
     Active Substance: ALBUTEROL
     Dosage: UNK
     Route: 065
  932. ALBUTEROL [Suspect]
     Active Substance: ALBUTEROL
     Dosage: 400 MG, QID
     Route: 065
  933. ALBUTEROL [Suspect]
     Active Substance: ALBUTEROL
     Dosage: UNK
     Route: 065
  934. ALBUTEROL [Suspect]
     Active Substance: ALBUTEROL
     Dosage: 400 MG, QD
     Route: 065
  935. ALBUTEROL [Suspect]
     Active Substance: ALBUTEROL
     Dosage: 200 MG, BID
     Route: 065
  936. ALBUTEROL [Suspect]
     Active Substance: ALBUTEROL
     Dosage: 800 MG, QD
     Route: 065
  937. ALBUTEROL [Suspect]
     Active Substance: ALBUTEROL
     Dosage: 200 UG, QID
     Route: 065
  938. ALBUTEROL [Suspect]
     Active Substance: ALBUTEROL
     Dosage: 200 MG, QID
     Route: 065
  939. ALBUTEROL [Suspect]
     Active Substance: ALBUTEROL
     Dosage: UNK
     Route: 065
  940. ALBUTEROL [Suspect]
     Active Substance: ALBUTEROL
     Dosage: 400 MG, QID
     Route: 065
  941. ALBUTEROL [Suspect]
     Active Substance: ALBUTEROL
     Dosage: UNK (TABLET); UNKNOWN
     Route: 065
  942. ALBUTEROL [Suspect]
     Active Substance: ALBUTEROL
     Dosage: UNK (TABLET); UNKNOWN
     Route: 065
  943. ALBUTEROL [Suspect]
     Active Substance: ALBUTEROL
     Dosage: 100.0 UG, QD
     Route: 065
  944. ALBUTEROL [Suspect]
     Active Substance: ALBUTEROL
     Dosage: 200 MG, QID
     Route: 065
  945. ALBUTEROL [Suspect]
     Active Substance: ALBUTEROL
     Dosage: 200 MG, QID
     Route: 065
  946. ALBUTEROL [Suspect]
     Active Substance: ALBUTEROL
     Dosage: UNK UNK, QID
     Route: 065
  947. ALBUTEROL [Suspect]
     Active Substance: ALBUTEROL
     Dosage: UNK, BID
     Route: 065
  948. ALBUTEROL [Suspect]
     Active Substance: ALBUTEROL
     Dosage: UNK, Q6H
     Route: 065
  949. ALBUTEROL [Suspect]
     Active Substance: ALBUTEROL
     Dosage: 200 MG, Q6H
     Route: 065
  950. ALBUTEROL [Suspect]
     Active Substance: ALBUTEROL
     Dosage: 200 MG, Q6H
     Route: 065
  951. ALBUTEROL [Suspect]
     Active Substance: ALBUTEROL
     Dosage: 400 MG, Q6H
     Route: 065
  952. ALBUTEROL [Suspect]
     Active Substance: ALBUTEROL
     Dosage: 400 MG, Q6H
     Route: 065
  953. ALBUTEROL [Suspect]
     Active Substance: ALBUTEROL
     Dosage: 100 MG, QD
     Route: 065
  954. ALBUTEROL [Suspect]
     Active Substance: ALBUTEROL
     Dosage: 400 MG, Q6H
     Route: 065
  955. ALBUTEROL [Suspect]
     Active Substance: ALBUTEROL
     Dosage: 100 MG, QD
     Route: 065
  956. ALBUTEROL [Suspect]
     Active Substance: ALBUTEROL
     Dosage: 200 MG, Q6H
     Route: 065
  957. ALBUTEROL [Suspect]
     Active Substance: ALBUTEROL
     Dosage: 100 MG, QD
     Route: 065
  958. ALBUTEROL [Suspect]
     Active Substance: ALBUTEROL
     Dosage: UNK
     Route: 065
  959. ALBUTEROL [Suspect]
     Active Substance: ALBUTEROL
     Dosage: 200 MG, Q6H
     Route: 065
  960. ALBUTEROL [Suspect]
     Active Substance: ALBUTEROL
     Dosage: 400 MG, Q6H
     Route: 065
  961. ALBUTEROL [Suspect]
     Active Substance: ALBUTEROL
     Dosage: 100 MG, QD
     Route: 065
  962. ALBUTEROL [Suspect]
     Active Substance: ALBUTEROL
     Dosage: 200 MG, Q6H
     Route: 065
  963. ALBUTEROL [Suspect]
     Active Substance: ALBUTEROL
     Dosage: 200 MG, Q6H
     Route: 065
  964. ROSUVASTATIN [Suspect]
     Active Substance: ROSUVASTATIN
     Indication: Hypertension
     Dosage: 20 MG, Q12H
     Route: 048
  965. ROSUVASTATIN [Suspect]
     Active Substance: ROSUVASTATIN
     Indication: Coronary artery disease
     Dosage: 20 UNK
     Route: 048
  966. ROSUVASTATIN [Suspect]
     Active Substance: ROSUVASTATIN
     Indication: Cerebrovascular accident
     Dosage: UNK
     Route: 058
  967. ROSUVASTATIN [Suspect]
     Active Substance: ROSUVASTATIN
     Indication: Chest pain
     Dosage: 20 MG
     Route: 065
  968. ROSUVASTATIN [Suspect]
     Active Substance: ROSUVASTATIN
     Indication: Angina pectoris
     Dosage: UNK
     Route: 065
  969. ROSUVASTATIN [Suspect]
     Active Substance: ROSUVASTATIN
     Indication: Insomnia
     Dosage: 20 MG, Q12H
     Route: 048
  970. ROSUVASTATIN [Suspect]
     Active Substance: ROSUVASTATIN
     Indication: Chronic obstructive pulmonary disease
     Dosage: 20 MG, Q12H
     Route: 065
  971. ROSUVASTATIN [Suspect]
     Active Substance: ROSUVASTATIN
     Dosage: 200 MG, Q12H
     Route: 048
  972. ROSUVASTATIN [Suspect]
     Active Substance: ROSUVASTATIN
     Dosage: 20 MG
     Route: 065
  973. ROSUVASTATIN [Suspect]
     Active Substance: ROSUVASTATIN
     Dosage: UNK
     Route: 058
  974. ROSUVASTATIN [Suspect]
     Active Substance: ROSUVASTATIN
     Dosage: 200 MG
     Route: 065
  975. ROSUVASTATIN [Suspect]
     Active Substance: ROSUVASTATIN
     Dosage: 20 MG, Q12H
     Route: 048
  976. ROSUVASTATIN [Suspect]
     Active Substance: ROSUVASTATIN
     Dosage: UNK
     Route: 048
  977. ROSUVASTATIN [Suspect]
     Active Substance: ROSUVASTATIN
     Dosage: 20 MG
     Route: 048
  978. ROSUVASTATIN [Suspect]
     Active Substance: ROSUVASTATIN
     Dosage: 20 MG
     Route: 048
  979. ACETAMINOPHEN AND CODEINE [Suspect]
     Active Substance: ACETAMINOPHEN\CODEINE PHOSPHATE
     Indication: Pain
     Dosage: 650 MG
     Route: 065
  980. ACETAMINOPHEN AND CODEINE [Suspect]
     Active Substance: ACETAMINOPHEN\CODEINE PHOSPHATE
     Indication: Cerebrovascular accident
     Dosage: UNK
     Route: 065
  981. ACETAMINOPHEN AND CODEINE [Suspect]
     Active Substance: ACETAMINOPHEN\CODEINE PHOSPHATE
     Indication: Chronic obstructive pulmonary disease
     Dosage: 60 MG, QD
     Route: 065
  982. ACETAMINOPHEN AND CODEINE [Suspect]
     Active Substance: ACETAMINOPHEN\CODEINE PHOSPHATE
     Indication: Hypertension
     Dosage: UNK
     Route: 065
  983. ACETAMINOPHEN AND CODEINE [Suspect]
     Active Substance: ACETAMINOPHEN\CODEINE PHOSPHATE
     Indication: Coronary artery disease
     Dosage: 50 MG, QD
     Route: 065
  984. ACETAMINOPHEN AND CODEINE [Suspect]
     Active Substance: ACETAMINOPHEN\CODEINE PHOSPHATE
     Indication: Chest pain
     Dosage: UNK
     Route: 065
  985. ACETAMINOPHEN AND CODEINE [Suspect]
     Active Substance: ACETAMINOPHEN\CODEINE PHOSPHATE
     Indication: Angina pectoris
     Dosage: UNK
     Route: 065
  986. ACETAMINOPHEN AND CODEINE [Suspect]
     Active Substance: ACETAMINOPHEN\CODEINE PHOSPHATE
     Dosage: UNK
     Route: 065
  987. ACETAMINOPHEN AND CODEINE [Suspect]
     Active Substance: ACETAMINOPHEN\CODEINE PHOSPHATE
     Dosage: UNK
     Route: 065
  988. CHONDROITIN SULFATE (BOVINE)\GLUCOSAMINE SULFATE [Suspect]
     Active Substance: CHONDROITIN SULFATE (BOVINE)\GLUCOSAMINE SULFATE
     Indication: Product used for unknown indication
     Dosage: UNK
     Route: 065
  989. AMINOPHYLLINE [Suspect]
     Active Substance: AMINOPHYLLINE
     Indication: Coronary artery disease
     Route: 065
  990. AMINOPHYLLINE [Suspect]
     Active Substance: AMINOPHYLLINE
     Indication: Chest pain
     Dosage: 6 MG, QD
     Route: 061
  991. AMINOPHYLLINE [Suspect]
     Active Substance: AMINOPHYLLINE
     Indication: Angina pectoris
     Dosage: UNK
     Route: 065
  992. ACETAMINOPHEN\CAFFEINE [Suspect]
     Active Substance: ACETAMINOPHEN\CAFFEINE
     Indication: Pain
     Dosage: 600 MG, QD
     Route: 065
  993. ACETAMINOPHEN\CAFFEINE [Suspect]
     Active Substance: ACETAMINOPHEN\CAFFEINE
     Indication: Hypertension
     Dosage: 650 MG, QD
     Route: 065
  994. ACETAMINOPHEN\CAFFEINE [Suspect]
     Active Substance: ACETAMINOPHEN\CAFFEINE
     Indication: Coronary artery disease
     Dosage: 60 MG, QD
     Route: 065
  995. ACETAMINOPHEN\CAFFEINE [Suspect]
     Active Substance: ACETAMINOPHEN\CAFFEINE
     Indication: Chronic obstructive pulmonary disease
     Dosage: 50 MG, QD
     Route: 065
  996. ACETAMINOPHEN\CAFFEINE [Suspect]
     Active Substance: ACETAMINOPHEN\CAFFEINE
     Indication: Chest pain
     Dosage: 650 MG
     Route: 065
  997. ACETAMINOPHEN\CAFFEINE [Suspect]
     Active Substance: ACETAMINOPHEN\CAFFEINE
     Indication: Cerebrovascular accident
     Dosage: 650 MG, QD
     Route: 065
  998. ACETAMINOPHEN\CAFFEINE [Suspect]
     Active Substance: ACETAMINOPHEN\CAFFEINE
     Indication: Angina pectoris
     Dosage: 600 MG, QD
     Route: 065
  999. ACETAMINOPHEN\CAFFEINE [Suspect]
     Active Substance: ACETAMINOPHEN\CAFFEINE
     Indication: Radioactive iodine therapy
     Dosage: UNK
     Route: 065
  1000. ACETAMINOPHEN\CAFFEINE [Suspect]
     Active Substance: ACETAMINOPHEN\CAFFEINE
     Dosage: UNK
     Route: 065
  1001. ACETAMINOPHEN\CAFFEINE [Suspect]
     Active Substance: ACETAMINOPHEN\CAFFEINE
     Dosage: UNK
     Route: 065
  1002. ACETAMINOPHEN\CAFFEINE [Suspect]
     Active Substance: ACETAMINOPHEN\CAFFEINE
     Dosage: 60 MG, QD
     Route: 065
  1003. ACETAMINOPHEN\CAFFEINE [Suspect]
     Active Substance: ACETAMINOPHEN\CAFFEINE
     Dosage: UNK
     Route: 065
  1004. ACETAMINOPHEN\CAFFEINE [Suspect]
     Active Substance: ACETAMINOPHEN\CAFFEINE
     Dosage: 50 MG, QD
     Route: 065
  1005. ACETAMINOPHEN\CAFFEINE [Suspect]
     Active Substance: ACETAMINOPHEN\CAFFEINE
     Dosage: UNK
     Route: 065
  1006. PERPHENAZINE AND AMITRIPTYLINE HYDROCHLORIDE [Suspect]
     Active Substance: AMITRIPTYLINE HYDROCHLORIDE\PERPHENAZINE
     Indication: Insomnia
     Dosage: UNK
     Route: 065
  1007. PERPHENAZINE AND AMITRIPTYLINE HYDROCHLORIDE [Suspect]
     Active Substance: AMITRIPTYLINE HYDROCHLORIDE\PERPHENAZINE
     Indication: Hypertension
     Dosage: 50 MG, QD
     Route: 065
  1008. PERPHENAZINE AND AMITRIPTYLINE HYDROCHLORIDE [Suspect]
     Active Substance: AMITRIPTYLINE HYDROCHLORIDE\PERPHENAZINE
     Indication: Fibromyalgia
     Dosage: UNK
     Route: 065
  1009. PERPHENAZINE AND AMITRIPTYLINE HYDROCHLORIDE [Suspect]
     Active Substance: AMITRIPTYLINE HYDROCHLORIDE\PERPHENAZINE
     Indication: Duodenal ulcer
     Dosage: UNK
     Route: 065
  1010. PERPHENAZINE AND AMITRIPTYLINE HYDROCHLORIDE [Suspect]
     Active Substance: AMITRIPTYLINE HYDROCHLORIDE\PERPHENAZINE
     Indication: Dementia
     Dosage: UNK
     Route: 065
  1011. PERPHENAZINE AND AMITRIPTYLINE HYDROCHLORIDE [Suspect]
     Active Substance: AMITRIPTYLINE HYDROCHLORIDE\PERPHENAZINE
     Indication: Coronary artery disease
     Dosage: UNK
     Route: 065
  1012. PERPHENAZINE AND AMITRIPTYLINE HYDROCHLORIDE [Suspect]
     Active Substance: AMITRIPTYLINE HYDROCHLORIDE\PERPHENAZINE
     Indication: Constipation
     Dosage: UNK
     Route: 065
  1013. PERPHENAZINE AND AMITRIPTYLINE HYDROCHLORIDE [Suspect]
     Active Substance: AMITRIPTYLINE HYDROCHLORIDE\PERPHENAZINE
     Indication: Chest pain
     Dosage: UNK
     Route: 065
  1014. PERPHENAZINE AND AMITRIPTYLINE HYDROCHLORIDE [Suspect]
     Active Substance: AMITRIPTYLINE HYDROCHLORIDE\PERPHENAZINE
     Indication: Arthritis
     Dosage: UNK
     Route: 065
  1015. PERPHENAZINE AND AMITRIPTYLINE HYDROCHLORIDE [Suspect]
     Active Substance: AMITRIPTYLINE HYDROCHLORIDE\PERPHENAZINE
     Indication: Angina pectoris
     Dosage: 75 MG, QD
     Route: 065
  1016. PERPHENAZINE AND AMITRIPTYLINE HYDROCHLORIDE [Suspect]
     Active Substance: AMITRIPTYLINE HYDROCHLORIDE\PERPHENAZINE
     Dosage: UNK
     Route: 065
  1017. PERPHENAZINE AND AMITRIPTYLINE HYDROCHLORIDE [Suspect]
     Active Substance: AMITRIPTYLINE HYDROCHLORIDE\PERPHENAZINE
     Dosage: UNK
     Route: 065
  1018. PERPHENAZINE AND AMITRIPTYLINE HYDROCHLORIDE [Suspect]
     Active Substance: AMITRIPTYLINE HYDROCHLORIDE\PERPHENAZINE
     Dosage: UNK
     Route: 065
  1019. PERPHENAZINE AND AMITRIPTYLINE HYDROCHLORIDE [Suspect]
     Active Substance: AMITRIPTYLINE HYDROCHLORIDE\PERPHENAZINE
     Dosage: UNK
     Route: 065
  1020. PERPHENAZINE AND AMITRIPTYLINE HYDROCHLORIDE [Suspect]
     Active Substance: AMITRIPTYLINE HYDROCHLORIDE\PERPHENAZINE
     Dosage: UNK
     Route: 065
  1021. PERPHENAZINE AND AMITRIPTYLINE HYDROCHLORIDE [Suspect]
     Active Substance: AMITRIPTYLINE HYDROCHLORIDE\PERPHENAZINE
     Dosage: UNK
     Route: 065
  1022. PERPHENAZINE AND AMITRIPTYLINE HYDROCHLORIDE [Suspect]
     Active Substance: AMITRIPTYLINE HYDROCHLORIDE\PERPHENAZINE
     Dosage: UNK
     Route: 065
  1023. PERPHENAZINE AND AMITRIPTYLINE HYDROCHLORIDE [Suspect]
     Active Substance: AMITRIPTYLINE HYDROCHLORIDE\PERPHENAZINE
     Dosage: UNK
     Route: 065
  1024. PERPHENAZINE AND AMITRIPTYLINE HYDROCHLORIDE [Suspect]
     Active Substance: AMITRIPTYLINE HYDROCHLORIDE\PERPHENAZINE
     Dosage: UNK
     Route: 065
  1025. PERPHENAZINE AND AMITRIPTYLINE HYDROCHLORIDE [Suspect]
     Active Substance: AMITRIPTYLINE HYDROCHLORIDE\PERPHENAZINE
     Dosage: UNK
     Route: 065
  1026. PERPHENAZINE AND AMITRIPTYLINE HYDROCHLORIDE [Suspect]
     Active Substance: AMITRIPTYLINE HYDROCHLORIDE\PERPHENAZINE
     Dosage: UNK
     Route: 065
  1027. PERPHENAZINE AND AMITRIPTYLINE HYDROCHLORIDE [Suspect]
     Active Substance: AMITRIPTYLINE HYDROCHLORIDE\PERPHENAZINE
     Dosage: UNK
     Route: 065
  1028. PERPHENAZINE AND AMITRIPTYLINE HYDROCHLORIDE [Suspect]
     Active Substance: AMITRIPTYLINE HYDROCHLORIDE\PERPHENAZINE
     Dosage: UNK
     Route: 065
  1029. PERPHENAZINE AND AMITRIPTYLINE HYDROCHLORIDE [Suspect]
     Active Substance: AMITRIPTYLINE HYDROCHLORIDE\PERPHENAZINE
     Dosage: UNK
     Route: 065
  1030. PERPHENAZINE AND AMITRIPTYLINE HYDROCHLORIDE [Suspect]
     Active Substance: AMITRIPTYLINE HYDROCHLORIDE\PERPHENAZINE
     Dosage: UNK
     Route: 065
  1031. PERPHENAZINE AND AMITRIPTYLINE HYDROCHLORIDE [Suspect]
     Active Substance: AMITRIPTYLINE HYDROCHLORIDE\PERPHENAZINE
     Dosage: UNK
     Route: 065
  1032. PERPHENAZINE AND AMITRIPTYLINE HYDROCHLORIDE [Suspect]
     Active Substance: AMITRIPTYLINE HYDROCHLORIDE\PERPHENAZINE
     Dosage: UNK
     Route: 065
  1033. PERPHENAZINE AND AMITRIPTYLINE HYDROCHLORIDE [Suspect]
     Active Substance: AMITRIPTYLINE HYDROCHLORIDE\PERPHENAZINE
     Dosage: UNK
     Route: 065
  1034. PERPHENAZINE AND AMITRIPTYLINE HYDROCHLORIDE [Suspect]
     Active Substance: AMITRIPTYLINE HYDROCHLORIDE\PERPHENAZINE
     Dosage: UNK
     Route: 065
  1035. PERPHENAZINE AND AMITRIPTYLINE HYDROCHLORIDE [Suspect]
     Active Substance: AMITRIPTYLINE HYDROCHLORIDE\PERPHENAZINE
     Dosage: UNK
     Route: 065
  1036. PERPHENAZINE AND AMITRIPTYLINE HYDROCHLORIDE [Suspect]
     Active Substance: AMITRIPTYLINE HYDROCHLORIDE\PERPHENAZINE
     Dosage: UNK
     Route: 065
  1037. PERPHENAZINE AND AMITRIPTYLINE HYDROCHLORIDE [Suspect]
     Active Substance: AMITRIPTYLINE HYDROCHLORIDE\PERPHENAZINE
     Dosage: UNK
     Route: 065
  1038. PERPHENAZINE AND AMITRIPTYLINE HYDROCHLORIDE [Suspect]
     Active Substance: AMITRIPTYLINE HYDROCHLORIDE\PERPHENAZINE
     Dosage: UNK
     Route: 065
  1039. PERPHENAZINE AND AMITRIPTYLINE HYDROCHLORIDE [Suspect]
     Active Substance: AMITRIPTYLINE HYDROCHLORIDE\PERPHENAZINE
     Dosage: UNK
     Route: 065
  1040. PERPHENAZINE AND AMITRIPTYLINE HYDROCHLORIDE [Suspect]
     Active Substance: AMITRIPTYLINE HYDROCHLORIDE\PERPHENAZINE
     Dosage: UNK
     Route: 065
  1041. PERPHENAZINE AND AMITRIPTYLINE HYDROCHLORIDE [Suspect]
     Active Substance: AMITRIPTYLINE HYDROCHLORIDE\PERPHENAZINE
     Dosage: UNK
     Route: 065
  1042. PERPHENAZINE AND AMITRIPTYLINE HYDROCHLORIDE [Suspect]
     Active Substance: AMITRIPTYLINE HYDROCHLORIDE\PERPHENAZINE
     Dosage: UNK
     Route: 065
  1043. PERPHENAZINE AND AMITRIPTYLINE HYDROCHLORIDE [Suspect]
     Active Substance: AMITRIPTYLINE HYDROCHLORIDE\PERPHENAZINE
     Dosage: UNK
     Route: 065
  1044. PERPHENAZINE AND AMITRIPTYLINE HYDROCHLORIDE [Suspect]
     Active Substance: AMITRIPTYLINE HYDROCHLORIDE\PERPHENAZINE
     Dosage: UNK
     Route: 065
  1045. PERPHENAZINE AND AMITRIPTYLINE HYDROCHLORIDE [Suspect]
     Active Substance: AMITRIPTYLINE HYDROCHLORIDE\PERPHENAZINE
     Dosage: UNK
     Route: 065
  1046. AMLODIPINE MESYLATE [Suspect]
     Active Substance: AMLODIPINE MESYLATE
     Indication: Coronary artery disease
     Dosage: UNK; UNKNOWN
     Route: 065
  1047. AMLODIPINE MESYLATE [Suspect]
     Active Substance: AMLODIPINE MESYLATE
     Indication: Chest pain
     Dosage: UNK; UNKNOWN
     Route: 065
  1048. AMLODIPINE MESYLATE [Suspect]
     Active Substance: AMLODIPINE MESYLATE
     Indication: Angina pectoris
     Dosage: 5 MG, QD; UNKNOWN
     Route: 065
  1049. AMLODIPINE MESYLATE [Suspect]
     Active Substance: AMLODIPINE MESYLATE
     Indication: Hypertension
     Dosage: 5 MG, QD; UNKNOWN
     Route: 065
  1050. AMLODIPINE MESYLATE [Suspect]
     Active Substance: AMLODIPINE MESYLATE
     Dosage: 5 MG, QD; UNKNOWN
     Route: 065
  1051. AMLODIPINE MESYLATE [Suspect]
     Active Substance: AMLODIPINE MESYLATE
     Dosage: 5 MG, QD; UNKNOWN
     Route: 065
  1052. AMLODIPINE MESYLATE [Suspect]
     Active Substance: AMLODIPINE MESYLATE
     Dosage: 5 MG, QD; UNKNOWN
     Route: 065
  1053. AMLODIPINE MESYLATE [Suspect]
     Active Substance: AMLODIPINE MESYLATE
     Dosage: 5 MG, QD; UNKNOWN
     Route: 065
  1054. AMLODIPINE MESYLATE [Suspect]
     Active Substance: AMLODIPINE MESYLATE
     Dosage: 5 MG, QD; UNKNOWN
     Route: 065
  1055. AMLODIPINE MESYLATE [Suspect]
     Active Substance: AMLODIPINE MESYLATE
     Dosage: 5 MG, QD; UNKNOWN
     Route: 065
  1056. AMLODIPINE MESYLATE [Suspect]
     Active Substance: AMLODIPINE MESYLATE
     Dosage: 5 MG, QD; UNKNOWN
     Route: 065
  1057. AMLODIPINE MESYLATE [Suspect]
     Active Substance: AMLODIPINE MESYLATE
     Dosage: 5 MG, QD; UNKNOWN
     Route: 065
  1058. AMLODIPINE MESYLATE [Suspect]
     Active Substance: AMLODIPINE MESYLATE
     Dosage: UNK
     Route: 065
  1059. AMLODIPINE MESYLATE [Suspect]
     Active Substance: AMLODIPINE MESYLATE
     Dosage: UNK
     Route: 065
  1060. AMLODIPINE MESYLATE [Suspect]
     Active Substance: AMLODIPINE MESYLATE
     Dosage: 5 MG, QD; UNKNOWN
     Route: 065
  1061. AMLODIPINE MESYLATE [Suspect]
     Active Substance: AMLODIPINE MESYLATE
     Dosage: 5 MG, QD; UNKNOWN
     Route: 065
  1062. AMLODIPINE MESYLATE [Suspect]
     Active Substance: AMLODIPINE MESYLATE
     Dosage: 5 MG, QD; UNKNOWN
     Route: 065
  1063. AMLODIPINE MESYLATE [Suspect]
     Active Substance: AMLODIPINE MESYLATE
     Dosage: 5 MG, QD; UNKNOWN
     Route: 065
  1064. AMLODIPINE MESYLATE [Suspect]
     Active Substance: AMLODIPINE MESYLATE
     Dosage: 5 MG, QD; UNKNOWN
     Route: 065
  1065. AMLODIPINE MESYLATE [Suspect]
     Active Substance: AMLODIPINE MESYLATE
     Dosage: 5 MG, QD; UNKNOWN
     Route: 065
  1066. AMLODIPINE MESYLATE [Suspect]
     Active Substance: AMLODIPINE MESYLATE
     Dosage: 5 MG, QD; UNKNOWN
     Route: 065
  1067. AMLODIPINE MESYLATE [Suspect]
     Active Substance: AMLODIPINE MESYLATE
     Dosage: 5 MG, QD; UNKNOWN
     Route: 065
  1068. AMLODIPINE MESYLATE [Suspect]
     Active Substance: AMLODIPINE MESYLATE
     Dosage: 5 MG, QD; UNKNOWN
     Route: 065
  1069. AMLODIPINE MESYLATE [Suspect]
     Active Substance: AMLODIPINE MESYLATE
     Dosage: 5 MG, QD; UNKNOWN
     Route: 065
  1070. AMLODIPINE MESYLATE [Suspect]
     Active Substance: AMLODIPINE MESYLATE
     Dosage: 5 MG, QD; UNKNOWN
     Route: 065
  1071. AMLODIPINE MESYLATE [Suspect]
     Active Substance: AMLODIPINE MESYLATE
     Dosage: 5 MG, QD; UNKNOWN
     Route: 065
  1072. AMLODIPINE MESYLATE [Suspect]
     Active Substance: AMLODIPINE MESYLATE
     Dosage: 5 MG, QD; UNKNOWN
     Route: 065
  1073. AMLODIPINE MESYLATE [Suspect]
     Active Substance: AMLODIPINE MESYLATE
     Dosage: 5 MG, QD; UNKNOWN
     Route: 065
  1074. AMLODIPINE MESYLATE [Suspect]
     Active Substance: AMLODIPINE MESYLATE
     Dosage: 5 MG, QD; UNKNOWN
     Route: 065
  1075. AMLODIPINE MESYLATE [Suspect]
     Active Substance: AMLODIPINE MESYLATE
     Dosage: 5 MG, QD; UNKNOWN
     Route: 065
  1076. AMLODIPINE MESYLATE [Suspect]
     Active Substance: AMLODIPINE MESYLATE
     Dosage: 5 MG, QD; UNKNOWN
     Route: 065
  1077. AMLODIPINE MESYLATE [Suspect]
     Active Substance: AMLODIPINE MESYLATE
     Dosage: 5 MG, QD; UNKNOWN
     Route: 065
  1078. AMLODIPINE MESYLATE [Suspect]
     Active Substance: AMLODIPINE MESYLATE
     Dosage: 5 MG, QD; UNKNOWN
     Route: 065
  1079. AMLODIPINE MESYLATE [Suspect]
     Active Substance: AMLODIPINE MESYLATE
     Dosage: 5 MG, QD; UNKNOWN
     Route: 065
  1080. ACETAMINOPHEN [Suspect]
     Active Substance: ACETAMINOPHEN
     Indication: Pain
     Dosage: 60 MG, QD; UNKNOWN
     Route: 065
  1081. ACETAMINOPHEN [Suspect]
     Active Substance: ACETAMINOPHEN
     Indication: Fibromyalgia
     Dosage: UNK; UNKNOWN
     Route: 065
  1082. ACETAMINOPHEN [Suspect]
     Active Substance: ACETAMINOPHEN
     Indication: Angina pectoris
     Dosage: UNK; UNKNOWN
     Route: 065
  1083. ACETAMINOPHEN [Suspect]
     Active Substance: ACETAMINOPHEN
     Indication: Radioactive iodine therapy
     Dosage: 650 MG; UNKNOWN
     Route: 065
  1084. ACETAMINOPHEN [Suspect]
     Active Substance: ACETAMINOPHEN
     Indication: Hypertension
     Dosage: 650 MG, QD; UNKNOWN
     Route: 065
  1085. ACETAMINOPHEN [Suspect]
     Active Substance: ACETAMINOPHEN
     Indication: Chronic obstructive pulmonary disease
     Dosage: 650 MG, QID; UNKNOWN
     Route: 065
  1086. ACETAMINOPHEN [Suspect]
     Active Substance: ACETAMINOPHEN
     Indication: Coronary artery disease
     Dosage: 650 MG; UNKNOWN
     Route: 065
  1087. ACETAMINOPHEN [Suspect]
     Active Substance: ACETAMINOPHEN
     Indication: Cerebrovascular accident
     Dosage: UNK; UNKNOWN
     Route: 065
  1088. ACETAMINOPHEN [Suspect]
     Active Substance: ACETAMINOPHEN
     Indication: Chest pain
     Dosage: UNK; UNKNOWN
     Route: 065
  1089. ACETAMINOPHEN [Suspect]
     Active Substance: ACETAMINOPHEN
     Dosage: 650 MG; UNKNOWN
     Route: 065
  1090. ACETAMINOPHEN [Suspect]
     Active Substance: ACETAMINOPHEN
     Dosage: 650 MG; UNKNOWN
     Route: 065
  1091. ACETAMINOPHEN [Suspect]
     Active Substance: ACETAMINOPHEN
     Dosage: UNK; UNKNOWN
     Route: 065
  1092. ACETAMINOPHEN [Suspect]
     Active Substance: ACETAMINOPHEN
     Dosage: 650 MG, QD; UNKNOWN
     Route: 065
  1093. ACETAMINOPHEN [Suspect]
     Active Substance: ACETAMINOPHEN
     Dosage: 60 MG, QD; UNKNOWN
     Route: 065
  1094. ACETAMINOPHEN [Suspect]
     Active Substance: ACETAMINOPHEN
     Dosage: UNK; UNKNOWN
     Route: 065
  1095. ACETAMINOPHEN [Suspect]
     Active Substance: ACETAMINOPHEN
     Dosage: 60 MG; UNKNOWN
     Route: 065
  1096. ACETAMINOPHEN [Suspect]
     Active Substance: ACETAMINOPHEN
     Dosage: 650 MG, QD; UNKNOWN
     Route: 065
  1097. ACETAMINOPHEN [Suspect]
     Active Substance: ACETAMINOPHEN
     Dosage: 650 MG; UNKNOWN
     Route: 065
  1098. ACETAMINOPHEN [Suspect]
     Active Substance: ACETAMINOPHEN
     Dosage: UNK; UNKNOWN
     Route: 065
  1099. ACETAMINOPHEN [Suspect]
     Active Substance: ACETAMINOPHEN
     Dosage: UNK; UNKNOWN
     Route: 065
  1100. ACETAMINOPHEN [Suspect]
     Active Substance: ACETAMINOPHEN
     Dosage: 50 MG, QD; UNKNOWN
     Route: 065
  1101. ACETAMINOPHEN [Suspect]
     Active Substance: ACETAMINOPHEN
     Dosage: UNK; UNKNOWN
     Route: 065
  1102. ACETAMINOPHEN [Suspect]
     Active Substance: ACETAMINOPHEN
     Dosage: 60 MG, QD; UNKNOWN
     Route: 065
  1103. ACETAMINOPHEN [Suspect]
     Active Substance: ACETAMINOPHEN
     Dosage: UNK; UNKNOWN
     Route: 065
  1104. ACETAMINOPHEN [Suspect]
     Active Substance: ACETAMINOPHEN
     Dosage: 650 MG, QD; UNKNOWN
     Route: 065
  1105. ACETAMINOPHEN [Suspect]
     Active Substance: ACETAMINOPHEN
     Dosage: UNK; UNKNOWN
     Route: 065
  1106. ACETAMINOPHEN [Suspect]
     Active Substance: ACETAMINOPHEN
     Dosage: UNK; UNKNOWN
     Route: 065
  1107. ACETAMINOPHEN [Suspect]
     Active Substance: ACETAMINOPHEN
     Dosage: UNK; UNKNOWN
     Route: 065
  1108. ACETAMINOPHEN [Suspect]
     Active Substance: ACETAMINOPHEN
     Dosage: UNK; UNKNOWN
     Route: 065
  1109. ACETAMINOPHEN [Suspect]
     Active Substance: ACETAMINOPHEN
     Dosage: 650 MG, QD; UNKNOWN
     Route: 065
  1110. ACETAMINOPHEN [Suspect]
     Active Substance: ACETAMINOPHEN
     Dosage: 60 MG, QD; UNKNOWN
     Route: 065
  1111. ACETAMINOPHEN [Suspect]
     Active Substance: ACETAMINOPHEN
     Dosage: 60 MG, QD; UNKNOWN
     Route: 065
  1112. ACETAMINOPHEN [Suspect]
     Active Substance: ACETAMINOPHEN
     Dosage: 60 MG, QD; UNKNOWN
     Route: 065
  1113. ACETAMINOPHEN [Suspect]
     Active Substance: ACETAMINOPHEN
     Dosage: 650 MG, QD; UNKNOWN
     Route: 065
  1114. ACETAMINOPHEN [Suspect]
     Active Substance: ACETAMINOPHEN
     Dosage: 650 MG, QD; UNKNOWN
     Route: 065
  1115. ACETAMINOPHEN [Suspect]
     Active Substance: ACETAMINOPHEN
     Dosage: 60 MG, QD; UNKNOWN
     Route: 065
  1116. ACETAMINOPHEN [Suspect]
     Active Substance: ACETAMINOPHEN
     Dosage: 60 MG, QD; UNKNOWN
     Route: 065
  1117. ACETAMINOPHEN [Suspect]
     Active Substance: ACETAMINOPHEN
     Dosage: 60 MG, QD; UNKNOWN
     Route: 065
  1118. ACETAMINOPHEN [Suspect]
     Active Substance: ACETAMINOPHEN
     Dosage: 600 MG, QD; UNKNOWN
     Route: 065
  1119. SODIUM PICOSULFATE [Suspect]
     Active Substance: SODIUM PICOSULFATE
     Indication: Constipation
     Dosage: 2 DOSAGE FORM,
     Route: 065
  1120. ASCORBIC ACID [Suspect]
     Active Substance: ASCORBIC ACID
     Indication: Product used for unknown indication
     Dosage: 500 MG; UNKNOWN
     Route: 065
  1121. GLYCERIN [Suspect]
     Active Substance: GLYCERIN
     Indication: Product used for unknown indication
     Route: 065
  1122. GLYCERIN [Suspect]
     Active Substance: GLYCERIN
     Route: 065
  1123. CAFFEINE [Suspect]
     Active Substance: CAFFEINE
     Indication: Product used for unknown indication
     Route: 065
  1124. PHENOLPHTHALEIN [Suspect]
     Active Substance: PHENOLPHTHALEIN
     Indication: Pain
     Dosage: UNK (SUGAR COATED PILLS)
     Route: 065
  1125. DOCUSATE SODIUM\PHENOLPHTHALEIN [Suspect]
     Active Substance: DOCUSATE SODIUM\PHENOLPHTHALEIN
     Indication: Pain
     Route: 065
  1126. FUROSEMIDE [Suspect]
     Active Substance: FUROSEMIDE
     Indication: Oedema
     Dosage: 40 MILLIGRAM, QD
     Route: 065
  1127. FRUCTOSE\GLYCERIN\SODIUM CHLORIDE [Suspect]
     Active Substance: FRUCTOSE\GLYCERIN\SODIUM CHLORIDE
     Indication: Product used for unknown indication
     Route: 065
  1128. ASPIRIN [Suspect]
     Active Substance: ASPIRIN
     Indication: Hypertension
     Route: 065
  1129. ASPIRIN [Suspect]
     Active Substance: ASPIRIN
     Indication: Coronary artery disease
     Route: 065
  1130. ASPIRIN [Suspect]
     Active Substance: ASPIRIN
     Indication: Angina pectoris
     Route: 065
  1131. ASPIRIN [Suspect]
     Active Substance: ASPIRIN
     Route: 065
  1132. ASPIRIN [Suspect]
     Active Substance: ASPIRIN
     Route: 065
  1133. ASPIRIN [Suspect]
     Active Substance: ASPIRIN
     Route: 065
  1134. ASPIRIN [Suspect]
     Active Substance: ASPIRIN
     Route: 065
  1135. ASPIRIN [Suspect]
     Active Substance: ASPIRIN
     Route: 065
  1136. OMEPRAZOLE MAGNESIUM [Suspect]
     Active Substance: OMEPRAZOLE MAGNESIUM
     Indication: Duodenal ulcer
     Dosage: 20 MG, BID; ORAL USE
     Route: 065
  1137. OMEPRAZOLE MAGNESIUM [Suspect]
     Active Substance: OMEPRAZOLE MAGNESIUM
     Indication: Small intestine carcinoma
     Dosage: 20 MG, Q12H; ORAL USE
     Route: 065
  1138. OMEPRAZOLE MAGNESIUM [Suspect]
     Active Substance: OMEPRAZOLE MAGNESIUM
     Dosage: 20 MG, QD; UNKNOWN
     Route: 065
  1139. OMEPRAZOLE MAGNESIUM [Suspect]
     Active Substance: OMEPRAZOLE MAGNESIUM
     Dosage: 20 MG, QD; UNKNOWN
     Route: 065
  1140. OMEPRAZOLE MAGNESIUM [Suspect]
     Active Substance: OMEPRAZOLE MAGNESIUM
     Dosage: 20 MG, Q12H; ORAL USE
     Route: 065
  1141. OMEPRAZOLE MAGNESIUM [Suspect]
     Active Substance: OMEPRAZOLE MAGNESIUM
     Dosage: 20 MG, QD; UNKNOWN
     Route: 065
  1142. OMEPRAZOLE MAGNESIUM [Suspect]
     Active Substance: OMEPRAZOLE MAGNESIUM
     Dosage: 20 MG, QD; UNKNOWN
     Route: 065
  1143. AMBROXOL HYDROCHLORIDE [Suspect]
     Active Substance: AMBROXOL HYDROCHLORIDE
     Indication: Product used for unknown indication
     Route: 065
  1144. AMLODIPINE\TELMISARTAN [Suspect]
     Active Substance: AMLODIPINE\TELMISARTAN
     Indication: Constipation
     Dosage: 5 MG, QD; UNKNOWN
     Route: 065
  1145. AMLODIPINE\TELMISARTAN [Suspect]
     Active Substance: AMLODIPINE\TELMISARTAN
     Indication: Angina pectoris
     Dosage: UNK; UNKNOWN
     Route: 065
  1146. AMLODIPINE\TELMISARTAN [Suspect]
     Active Substance: AMLODIPINE\TELMISARTAN
     Indication: Hypertension
     Dosage: UNK; UNKNOWN
     Route: 065
  1147. AMLODIPINE\TELMISARTAN [Suspect]
     Active Substance: AMLODIPINE\TELMISARTAN
     Indication: Coronary artery disease
     Dosage: UNK; UNKNOWN
     Route: 065
  1148. AMLODIPINE\TELMISARTAN [Suspect]
     Active Substance: AMLODIPINE\TELMISARTAN
     Dosage: 5 MG, QD; UNKNOWN
     Route: 065
  1149. AMLODIPINE\TELMISARTAN [Suspect]
     Active Substance: AMLODIPINE\TELMISARTAN
     Dosage: UNK; UNKNOWN
     Route: 065
  1150. AMLODIPINE\TELMISARTAN [Suspect]
     Active Substance: AMLODIPINE\TELMISARTAN
     Dosage: UNK; UNKNOWN
     Route: 065
  1151. POTASSIUM SORBATE [Suspect]
     Active Substance: POTASSIUM SORBATE
     Indication: Product used for unknown indication
     Route: 065
  1152. POTASSIUM SORBATE [Suspect]
     Active Substance: POTASSIUM SORBATE
     Route: 065
  1153. POLYSORBATE 20 [Suspect]
     Active Substance: POLYSORBATE 20
     Indication: Insomnia
     Route: 065
  1154. POLYSORBATE 40 [Suspect]
     Active Substance: POLYSORBATE 40
     Indication: Insomnia
     Route: 065
  1155. SENNOSIDES A AND B [Suspect]
     Active Substance: SENNOSIDES A AND B
     Indication: Product used for unknown indication
     Route: 065
  1156. AMITRIPTYLINE HYDROCHLORIDE\PERPHENAZINE [Suspect]
     Active Substance: AMITRIPTYLINE HYDROCHLORIDE\PERPHENAZINE
     Indication: Insomnia
     Route: 065
  1157. AMITRIPTYLINE HYDROCHLORIDE\PERPHENAZINE [Suspect]
     Active Substance: AMITRIPTYLINE HYDROCHLORIDE\PERPHENAZINE
     Indication: Hypertension
     Route: 065
  1158. AMITRIPTYLINE HYDROCHLORIDE\PERPHENAZINE [Suspect]
     Active Substance: AMITRIPTYLINE HYDROCHLORIDE\PERPHENAZINE
     Indication: Fibromyalgia
     Dosage: UNK
     Route: 065
  1159. AMITRIPTYLINE HYDROCHLORIDE\PERPHENAZINE [Suspect]
     Active Substance: AMITRIPTYLINE HYDROCHLORIDE\PERPHENAZINE
     Indication: Duodenal ulcer
     Dosage: 75 MG, QD; UNKNOWN
     Route: 065
  1160. AMITRIPTYLINE HYDROCHLORIDE\PERPHENAZINE [Suspect]
     Active Substance: AMITRIPTYLINE HYDROCHLORIDE\PERPHENAZINE
     Indication: Dementia
     Dosage: UNK
     Route: 065
  1161. AMITRIPTYLINE HYDROCHLORIDE\PERPHENAZINE [Suspect]
     Active Substance: AMITRIPTYLINE HYDROCHLORIDE\PERPHENAZINE
     Indication: Coronary artery disease
     Dosage: UNK
     Route: 065
  1162. AMITRIPTYLINE HYDROCHLORIDE\PERPHENAZINE [Suspect]
     Active Substance: AMITRIPTYLINE HYDROCHLORIDE\PERPHENAZINE
     Indication: Constipation
     Dosage: 50 MG, QD; UNKNOWN
     Route: 065
  1163. AMITRIPTYLINE HYDROCHLORIDE\PERPHENAZINE [Suspect]
     Active Substance: AMITRIPTYLINE HYDROCHLORIDE\PERPHENAZINE
     Indication: Chest pain
     Dosage: UNK
     Route: 065
  1164. AMITRIPTYLINE HYDROCHLORIDE\PERPHENAZINE [Suspect]
     Active Substance: AMITRIPTYLINE HYDROCHLORIDE\PERPHENAZINE
     Indication: Arthritis
     Dosage: UNK
     Route: 065
  1165. AMITRIPTYLINE HYDROCHLORIDE\PERPHENAZINE [Suspect]
     Active Substance: AMITRIPTYLINE HYDROCHLORIDE\PERPHENAZINE
     Indication: Angina pectoris
     Dosage: UNK
     Route: 065
  1166. CALCIUM [Suspect]
     Active Substance: CALCIUM
     Indication: Product used for unknown indication
     Route: 065
  1167. ACETAMINOSALOL [Suspect]
     Active Substance: ACETAMINOSALOL
     Indication: Product used for unknown indication
     Route: 065
  1168. ASCORBIC ACID\CRANBERRY [Suspect]
     Active Substance: ASCORBIC ACID\CRANBERRY
     Indication: Bladder disorder
     Dosage: 500 MG, Q8H; UNKNOWN
     Route: 065
  1169. ASCORBIC ACID\CRANBERRY [Suspect]
     Active Substance: ASCORBIC ACID\CRANBERRY
     Indication: Fibromyalgia
     Dosage: 500 MG, QD; UNKNOWN
     Route: 065
  1170. ASCORBIC ACID\CRANBERRY [Suspect]
     Active Substance: ASCORBIC ACID\CRANBERRY
     Dosage: UNK
     Route: 065
  1171. ASCORBIC ACID\CRANBERRY [Suspect]
     Active Substance: ASCORBIC ACID\CRANBERRY
     Dosage: 500 MG, QD; UNKNOWN
     Route: 065
  1172. ASCORBIC ACID\CRANBERRY [Suspect]
     Active Substance: ASCORBIC ACID\CRANBERRY
     Dosage: 500 MG, QD; UNKNOWN
     Route: 065
  1173. ASCORBIC ACID\CRANBERRY [Suspect]
     Active Substance: ASCORBIC ACID\CRANBERRY
     Dosage: 1500 MG, QD; UNKNOWN
     Route: 065
  1174. ASCORBIC ACID\CRANBERRY [Suspect]
     Active Substance: ASCORBIC ACID\CRANBERRY
     Dosage: UNK
     Route: 065
  1175. ASCORBIC ACID\CRANBERRY [Suspect]
     Active Substance: ASCORBIC ACID\CRANBERRY
     Dosage: UNK
     Route: 065
  1176. ASCORBIC ACID\CRANBERRY [Suspect]
     Active Substance: ASCORBIC ACID\CRANBERRY
     Dosage: 500 MG, Q8H; UNKNOWN
     Route: 065
  1177. QUINAPRIL [Suspect]
     Active Substance: QUINAPRIL
     Indication: Hypertension
     Dosage: 20 MG, QD; UNKNOWN
     Route: 065
  1178. QUINAPRIL [Suspect]
     Active Substance: QUINAPRIL
     Indication: Coronary artery disease
     Dosage: 20 MG, QD; UNKNOWN
     Route: 065
  1179. QUINAPRIL [Suspect]
     Active Substance: QUINAPRIL
     Indication: Chest pain
     Dosage: 40 MG, QD; UNKNOWN
     Route: 065
  1180. QUINAPRIL [Suspect]
     Active Substance: QUINAPRIL
     Indication: Angina pectoris
     Dosage: 20 MG, QD; UNKNOWN
     Route: 065
  1181. QUINAPRIL [Suspect]
     Active Substance: QUINAPRIL
     Dosage: 20 MG, QD; UNKNOWN
     Route: 065
  1182. QUINAPRIL [Suspect]
     Active Substance: QUINAPRIL
     Dosage: 20 MG, QD; UNKNOWN
     Route: 065
  1183. QUINAPRIL [Suspect]
     Active Substance: QUINAPRIL
     Dosage: 40 MG, QD; UNKNOWN
     Route: 065
  1184. QUINAPRIL [Suspect]
     Active Substance: QUINAPRIL
     Dosage: 40 MG, QD; UNKNOWN
     Route: 065
  1185. QUINAPRIL [Suspect]
     Active Substance: QUINAPRIL
     Dosage: 40 MG, QD; UNKNOWN
     Route: 065
  1186. QUINAPRIL [Suspect]
     Active Substance: QUINAPRIL
     Dosage: 40 MG, QD; UNKNOWN
     Route: 065
  1187. QUINAPRIL [Suspect]
     Active Substance: QUINAPRIL
     Dosage: 40 MG, QD; UNKNOWN
     Route: 065
  1188. QUINAPRIL [Suspect]
     Active Substance: QUINAPRIL
     Dosage: 20 MG, QD; UNKNOWN
     Route: 065
  1189. QUINAPRIL [Suspect]
     Active Substance: QUINAPRIL
     Dosage: 20 MG, QD; UNKNOWN
     Route: 065
  1190. QUINAPRIL [Suspect]
     Active Substance: QUINAPRIL
     Dosage: 20 MG, QD; UNKNOWN
     Route: 065
  1191. QUINAPRIL [Suspect]
     Active Substance: QUINAPRIL
     Dosage: 20 MG, QD; UNKNOWN
     Route: 065
  1192. QUINAPRIL [Suspect]
     Active Substance: QUINAPRIL
     Dosage: 20 MG, QD; UNKNOWN
     Route: 065
  1193. QUINAPRIL [Suspect]
     Active Substance: QUINAPRIL
     Dosage: 20 MG, QD; UNKNOWN
     Route: 065
  1194. QUINAPRIL [Suspect]
     Active Substance: QUINAPRIL
     Dosage: 40 MG, QD; UNKNOWN
     Route: 065
  1195. QUINAPRIL [Suspect]
     Active Substance: QUINAPRIL
     Dosage: 20 MG, QD; UNKNOWN
     Route: 065
  1196. CRANBERRY [Suspect]
     Active Substance: CRANBERRY
     Indication: Bladder disorder
     Dosage: 500 MG, TID; UNKNOWN
     Route: 065
  1197. CRANBERRY [Suspect]
     Active Substance: CRANBERRY
     Indication: Chronic obstructive pulmonary disease
     Dosage: 500 MG, TID; UNKNOWN
     Route: 065
  1198. CRANBERRY [Suspect]
     Active Substance: CRANBERRY
     Dosage: 1500 MG, TID; UNKNOWN
     Route: 065
  1199. CRANBERRY [Suspect]
     Active Substance: CRANBERRY
     Dosage: UNK
     Route: 065
  1200. ACETAMINOPHEN AND CAFFEINE [Suspect]
     Active Substance: ACETAMINOPHEN\CAFFEINE
     Indication: Radioactive iodine therapy
     Dosage: 650 MG 50 GALLONS DAILY
     Route: 065
  1201. ACETAMINOPHEN AND CAFFEINE [Suspect]
     Active Substance: ACETAMINOPHEN\CAFFEINE
     Indication: Cerebrovascular accident
     Dosage: 650 MG, DAILY
     Route: 065
  1202. ACETAMINOPHEN AND CAFFEINE [Suspect]
     Active Substance: ACETAMINOPHEN\CAFFEINE
     Indication: Pain
     Dosage: 60 MILLIGRAM, DAILY
     Route: 065
  1203. ACETAMINOPHEN AND CAFFEINE [Suspect]
     Active Substance: ACETAMINOPHEN\CAFFEINE
     Indication: Cerebrovascular accident
     Dosage: 50 MILLIGRAM, DAILY
     Route: 065
  1204. ACETAMINOPHEN AND CAFFEINE [Suspect]
     Active Substance: ACETAMINOPHEN\CAFFEINE
     Indication: Chronic obstructive pulmonary disease
  1205. ACETAMINOPHEN AND CAFFEINE [Suspect]
     Active Substance: ACETAMINOPHEN\CAFFEINE
     Indication: Chest pain
  1206. ACETAMINOPHEN AND CAFFEINE [Suspect]
     Active Substance: ACETAMINOPHEN\CAFFEINE
     Indication: Coronary artery disease
  1207. ACETAMINOPHEN AND CAFFEINE [Suspect]
     Active Substance: ACETAMINOPHEN\CAFFEINE
     Indication: Hypertension
  1208. PICOLAX (ANHYDROUS CITRIC ACID\MAGNESIUM OXIDE\SODIUM PICOSULFATE) [Suspect]
     Active Substance: ANHYDROUS CITRIC ACID\MAGNESIUM OXIDE\SODIUM PICOSULFATE
     Indication: Constipation
     Dosage: 2 DOSAGE FORM, DAILY
     Route: 065
  1209. DOCUSATE SODIUM [Suspect]
     Active Substance: DOCUSATE SODIUM
     Indication: Constipation
     Route: 065
  1210. CRANBERRY [Suspect]
     Active Substance: CRANBERRY
     Indication: Product used for unknown indication
     Route: 065
  1211. POLYSORBATE 80 [Suspect]
     Active Substance: POLYSORBATE 80
     Indication: Insomnia
     Dosage: 2 BDF
     Route: 065
  1212. AMINOPHYLLINE [Suspect]
     Active Substance: AMINOPHYLLINE
     Indication: Angina pectoris
     Dosage: 6 MILLIGRAM, DAILY TOPICAL
     Route: 065
  1213. ATROPINE [Suspect]
     Active Substance: ATROPINE
     Indication: Coronary artery disease
  1214. NITROGLYCERIN [Suspect]
     Active Substance: NITROGLYCERIN
     Indication: Chest pain
  1215. DROTAVERINE [Suspect]
     Active Substance: DROTAVERINE
     Indication: Product used for unknown indication
     Route: 065
  1216. ACETAMINOPHEN\ASPIRIN\CAFFEINE [Suspect]
     Active Substance: ACETAMINOPHEN\ASPIRIN\CAFFEINE
     Indication: Product used for unknown indication
     Route: 065
  1217. HERBALS\PLANTAGO OVATA LEAF [Suspect]
     Active Substance: HERBALS\PLANTAGO OVATA LEAF
     Indication: Product used for unknown indication
     Dosage: BDF
     Route: 065
  1218. DOCUSATE SODIUM\PHENOLPHTHALEIN [Suspect]
     Active Substance: DOCUSATE SODIUM\PHENOLPHTHALEIN
     Indication: Pain
     Dosage: BDF
     Route: 065
  1219. HERBALS [Suspect]
     Active Substance: HERBALS
     Indication: Product used for unknown indication
     Route: 065
  1220. AMINOPHYLLINE\BROMHEXINE\CHLORPHENIRAMINE [Suspect]
     Active Substance: AMINOPHYLLINE\BROMHEXINE\CHLORPHENIRAMINE
     Indication: Coronary artery disease
     Dosage: 6 MG, DAILY(1 EVERY 1 DAYS); TOPICAL
     Route: 065
  1221. AMINOPHYLLINE\BROMHEXINE\CHLORPHENIRAMINE [Suspect]
     Active Substance: AMINOPHYLLINE\BROMHEXINE\CHLORPHENIRAMINE
     Indication: Chest pain
     Dosage: UNK
     Route: 065
  1222. AMINOPHYLLINE\BROMHEXINE\CHLORPHENIRAMINE [Suspect]
     Active Substance: AMINOPHYLLINE\BROMHEXINE\CHLORPHENIRAMINE
     Indication: Angina pectoris
  1223. ZINC [Suspect]
     Active Substance: ZINC
     Indication: Product used for unknown indication
     Route: 065
  1224. AMBROXOL HYDROCHLORIDE\CLENBUTEROL [Suspect]
     Active Substance: AMBROXOL HYDROCHLORIDE\CLENBUTEROL
     Indication: Product used for unknown indication
     Route: 065
  1225. MAGNESIUM ALUMINUM SILICATE [Suspect]
     Active Substance: MAGNESIUM ALUMINUM SILICATE
     Indication: Constipation
     Dosage: 620 MG, Q12H
     Route: 065
  1226. PERPHENAZINE [Suspect]
     Active Substance: PERPHENAZINE
     Indication: Insomnia
     Dosage: 75 MILLIGRAM, DAILY
     Route: 065
  1227. PYROPHOSPHORIC ACID [Concomitant]
     Active Substance: PYROPHOSPHORIC ACID
     Indication: Product used for unknown indication
     Route: 065
  1228. SODIUM BENZOATE [Concomitant]
     Active Substance: SODIUM BENZOATE
     Indication: Product used for unknown indication
     Route: 065
  1229. ZINC SALICYLATE [Concomitant]
     Active Substance: ZINC SALICYLATE
     Indication: Product used for unknown indication
     Route: 065
  1230. ZINC SULFATE [Concomitant]
     Active Substance: ZINC SULFATE
     Indication: Product used for unknown indication
     Route: 065
  1231. CALCIUM ASCORBATE [Concomitant]
     Active Substance: CALCIUM ASCORBATE
     Indication: Product used for unknown indication
     Route: 065
  1232. PYROPHOSPHORIC ACID [Concomitant]
     Active Substance: PYROPHOSPHORIC ACID
     Indication: Product used for unknown indication
     Route: 065
  1233. ZINC [Concomitant]
     Active Substance: ZINC
     Indication: Product used for unknown indication
     Route: 065
  1234. VITAMIN C [Concomitant]
     Active Substance: ASCORBIC ACID
     Indication: Product used for unknown indication
     Route: 065
  1235. HERBALS\PLANTAGO OVATA SEED COAT [Concomitant]
     Active Substance: HERBALS\PLANTAGO OVATA SEED COAT
     Indication: Product used for unknown indication
     Route: 065
  1236. CALCIUM POLYCARBOPHIL [Concomitant]
     Active Substance: CALCIUM POLYCARBOPHIL
     Indication: Product used for unknown indication
     Route: 065
  1237. FIBER [Concomitant]
     Indication: Product used for unknown indication
     Route: 065
  1238. PAPAVERINE [Suspect]
     Active Substance: PAPAVERINE
  1239. PHENOBARBITAL [Suspect]
     Active Substance: PHENOBARBITAL

REACTIONS (24)
  - Blood calcium decreased [Recovered/Resolved]
  - Sedation [Recovered/Resolved]
  - Cognitive disorder [Recovered/Resolved]
  - Balance disorder [Recovered/Resolved]
  - Pain [Recovered/Resolved]
  - Mobility decreased [Recovered/Resolved]
  - Toxicity to various agents [Recovered/Resolved]
  - Fall [Recovered/Resolved]
  - Sedation complication [Recovered/Resolved]
  - Creatinine renal clearance decreased [Recovered/Resolved]
  - Orthostatic hypotension [Recovered/Resolved]
  - Hypotension [Recovered/Resolved]
  - Constipation [Recovered/Resolved]
  - Dyspnoea [Recovered/Resolved]
  - Drug interaction [Recovered/Resolved]
  - Depressed level of consciousness [Recovered/Resolved]
  - Off label use [Recovered/Resolved]
  - Product use in unapproved indication [Recovered/Resolved]
  - Drug abuse [Recovered/Resolved]
  - Creatinine renal clearance increased [Recovered/Resolved]
  - Renal function test abnormal [Recovered/Resolved]
  - Multiple drug therapy [Recovered/Resolved]
  - Sedation complication [Recovered/Resolved]
  - Overdose [Recovered/Resolved]
